FAERS Safety Report 23714977 (Version 17)
Quarter: 2025Q4

REPORT INFORMATION
  Report Type: Spontaneous
  Country: GB (occurrence: GB)
  Receive Date: 20240406
  Receipt Date: 20251222
  Transmission Date: 20260118
  Serious: Yes (Hospitalization, Other)
  Sender: CELLTRION
  Company Number: GB-CELLTRION INC.-2023GB025604

PATIENT

DRUGS (1860)
  1. INFLIXIMAB [Suspect]
     Active Substance: INFLIXIMAB
     Indication: Crohn^s disease
     Dosage: ADDITIONAL INFO: ROUTE:OTHER
     Route: 050
  2. INFLIXIMAB [Suspect]
     Active Substance: INFLIXIMAB
     Dosage: UNKNOWN; PHARMACEUTICAL DOSE FORM: 230
     Route: 050
  3. INFLIXIMAB [Suspect]
     Active Substance: INFLIXIMAB
     Dosage: PHARMACEUTICAL DOSE FORM (FREE TEXT): 230
     Route: 065
  4. INFLIXIMAB [Suspect]
     Active Substance: INFLIXIMAB
     Dosage: UNK UNK, UNK
     Route: 065
  5. INFLIXIMAB [Suspect]
     Active Substance: INFLIXIMAB
     Dosage: UNKNOWN, ADDITIONAL INFORMATION ON DRUG (FREE TEXT): OROMUCOSAL SPRAY  ADALIMUMAB SOLUTION FOR INJEC
     Route: 065
  6. INFLIXIMAB [Suspect]
     Active Substance: INFLIXIMAB
     Dosage: UNK (ADALIMUMAB SOLUTION FOR INJECTION, SINGLE DOSE PEN)
     Route: 050
  7. INFLIXIMAB [Suspect]
     Active Substance: INFLIXIMAB
     Dosage: UNKNOWN, ADDITIONAL INFORMATION ON DRUG (FREE TEXT): OROMUCOSAL SPRAY  ADALIMUMAB SOLUTION FOR INJEC
     Route: 065
  8. INFLIXIMAB [Suspect]
     Active Substance: INFLIXIMAB
     Dosage: UNK (ADALIMUMAB SOLUTION FOR INJECTION, SINGLE DOSE PEN)
     Route: 050
  9. INFLIXIMAB [Suspect]
     Active Substance: INFLIXIMAB
     Dosage: UNK (ADALIMUMAB SOLUTION FOR INJECTION, SINGLE DOSE PEN OROMUCOSAL SPRAY)
     Route: 065
  10. INFLIXIMAB [Suspect]
     Active Substance: INFLIXIMAB
     Dosage: UNK (ADALIMUMAB SOLUTION FOR INJECTION, SINGLE DOSE PEN)
     Route: 050
  11. INFLIXIMAB [Suspect]
     Active Substance: INFLIXIMAB
     Dosage: UNK, ADDITIONAL INFORMATION ON DRUG (FREE TEXT): OROMUCOSAL SPRAY  ADALIMUMAB SOLUTION FOR INJECTION
     Route: 050
  12. INFLIXIMAB [Suspect]
     Active Substance: INFLIXIMAB
     Dosage: UNK, OTHER (ADALIMUMAB SOLUTION FOR INJECTION, SINGLE DOSE PEN)
     Route: 065
  13. INFLIXIMAB [Suspect]
     Active Substance: INFLIXIMAB
     Dosage: UNK, OTHER
     Route: 065
  14. INFLIXIMAB [Suspect]
     Active Substance: INFLIXIMAB
     Dosage: UNK, OTHER
     Route: 065
  15. INFLIXIMAB [Suspect]
     Active Substance: INFLIXIMAB
     Dosage: UNK, OTHER
     Route: 065
  16. INFLIXIMAB [Suspect]
     Active Substance: INFLIXIMAB
     Dosage: UNK, OTHER
     Route: 065
  17. INFLIXIMAB [Suspect]
     Active Substance: INFLIXIMAB
     Dosage: UNK, OTHER
     Route: 065
  18. INFLIXIMAB [Suspect]
     Active Substance: INFLIXIMAB
     Dosage: UNK, OTHER
     Route: 065
  19. INFLIXIMAB [Suspect]
     Active Substance: INFLIXIMAB
     Dosage: UNKNOWN; ;
     Route: 050
  20. INFLIXIMAB [Suspect]
     Active Substance: INFLIXIMAB
     Dosage: UNKNOWN; ;
     Route: 050
  21. INFLIXIMAB [Suspect]
     Active Substance: INFLIXIMAB
     Dosage: UNK; ; (ADALIMUMAB SOLUTION FOR INJECTION, SINGLE DOSE PEN)
     Route: 050
  22. INFLIXIMAB [Suspect]
     Active Substance: INFLIXIMAB
     Dosage: UNK; ;
     Route: 050
  23. INFLIXIMAB [Suspect]
     Active Substance: INFLIXIMAB
     Dosage: UNK; ;
     Route: 050
  24. INFLIXIMAB [Suspect]
     Active Substance: INFLIXIMAB
     Dosage: UNK; ;
     Route: 050
  25. INFLIXIMAB [Suspect]
     Active Substance: INFLIXIMAB
     Dosage: UNK; ;
     Route: 050
  26. INFLIXIMAB [Suspect]
     Active Substance: INFLIXIMAB
     Dosage: UNK; ;
     Route: 050
  27. INFLIXIMAB [Suspect]
     Active Substance: INFLIXIMAB
     Dosage: UNK; ;
     Route: 050
  28. INFLIXIMAB [Suspect]
     Active Substance: INFLIXIMAB
     Dosage: UNK; ;
     Route: 050
  29. INFLIXIMAB [Suspect]
     Active Substance: INFLIXIMAB
     Dosage: UNK; ;
     Route: 050
  30. INFLIXIMAB [Suspect]
     Active Substance: INFLIXIMAB
     Dosage: UNK (ADALIMUMAB SOLUTION FOR INJECTION, SINGLE DOSE PEN)
     Route: 050
  31. INFLIXIMAB [Suspect]
     Active Substance: INFLIXIMAB
     Dosage: UNK
     Route: 050
  32. INFLIXIMAB [Suspect]
     Active Substance: INFLIXIMAB
     Dosage: UNK, ADDITIONAL INFORMATION ON DRUG (FREE TEXT): OROMUCOSAL SPRAY  ADALIMUMAB SOLUTION FOR INJECTION
     Route: 065
  33. INFLIXIMAB [Suspect]
     Active Substance: INFLIXIMAB
     Dosage: UNK, ADDITIONAL INFORMATION ON DRUG (FREE TEXT): OROMUCOSAL SPRAY  ADALIMUMAB SOLUTION FOR INJECTION
     Route: 065
  34. INFLIXIMAB [Suspect]
     Active Substance: INFLIXIMAB
     Dosage: UNK (ADALIMUMAB SOLUTION FOR INJECTION, SINGLE DOSE PEN)
     Route: 042
  35. INFLIXIMAB [Suspect]
     Active Substance: INFLIXIMAB
     Dosage: UNK, ADDITIONAL INFORMATION ON DRUG (FREE TEXT): OROMUCOSAL SPRAY ADALIMUMAB SOLUTION FOR INJECTION,
     Route: 042
  36. INFLIXIMAB [Suspect]
     Active Substance: INFLIXIMAB
     Dosage: UNK, ADDITIONAL INFORMATION ON DRUG (FREE TEXT): OROMUCOSAL SPRAY ADALIMUMAB SOLUTION FOR INJECTION,
     Route: 042
  37. INFLIXIMAB [Suspect]
     Active Substance: INFLIXIMAB
     Dosage: UNK, ADDITIONAL INFORMATION ON DRUG (FREE TEXT): OROMUCOSAL SPRAY ADALIMUMAB SOLUTION FOR INJECTION,
     Route: 042
  38. INFLIXIMAB [Suspect]
     Active Substance: INFLIXIMAB
     Dosage: UNK; PHARMACEUTICAL DOSE FORM: 230
     Route: 050
  39. INFLIXIMAB [Suspect]
     Active Substance: INFLIXIMAB
     Dosage: UNK, ADDITIONAL INFORMATION ON DRUG (FREE TEXT): OROMUCOSAL SPRAY ADALIMUMAB SOLUTION FOR INJECTION,
     Route: 050
  40. INFLIXIMAB [Suspect]
     Active Substance: INFLIXIMAB
     Dosage: UNK, ADDITIONAL INFORMATION ON DRUG (FREE TEXT): OROMUCOSAL SPRAY ADALIMUMAB SOLUTION FOR INJECTION,
     Route: 050
  41. INFLIXIMAB [Suspect]
     Active Substance: INFLIXIMAB
     Dosage: UNK, ADDITIONAL INFORMATION ON DRUG (FREE TEXT): OROMUCOSAL SPRAY ADALIMUMAB SOLUTION FOR INJECTION,
     Route: 050
  42. INFLIXIMAB [Suspect]
     Active Substance: INFLIXIMAB
     Dosage: UNK, ADDITIONAL INFORMATION ON DRUG (FREE TEXT): OROMUCOSAL SPRAY ADALIMUMAB SOLUTION FOR INJECTION,
     Route: 042
  43. INFLIXIMAB [Suspect]
     Active Substance: INFLIXIMAB
     Dosage: UNK, ADDITIONAL INFORMATION ON DRUG (FREE TEXT): OROMUCOSAL SPRAY ADALIMUMAB SOLUTION FOR INJECTION,
     Route: 042
  44. INFLIXIMAB [Suspect]
     Active Substance: INFLIXIMAB
     Dosage: UNK
     Route: 042
  45. INFLIXIMAB [Suspect]
     Active Substance: INFLIXIMAB
     Dosage: UNK
     Route: 042
  46. INFLIXIMAB [Suspect]
     Active Substance: INFLIXIMAB
     Dosage: UNK
     Route: 042
  47. INFLIXIMAB [Suspect]
     Active Substance: INFLIXIMAB
     Dosage: UNK
     Route: 042
  48. INFLIXIMAB [Suspect]
     Active Substance: INFLIXIMAB
     Dosage: UNK
     Route: 042
  49. INFLIXIMAB [Suspect]
     Active Substance: INFLIXIMAB
     Dosage: UNK
     Route: 042
  50. INFLIXIMAB [Suspect]
     Active Substance: INFLIXIMAB
     Dosage: UNK
     Route: 042
  51. INFLIXIMAB [Suspect]
     Active Substance: INFLIXIMAB
     Indication: Crohn^s disease
     Dosage: UNK
     Route: 042
  52. INFLIXIMAB [Suspect]
     Active Substance: INFLIXIMAB
     Dosage: UNK
     Route: 042
  53. INFLIXIMAB [Suspect]
     Active Substance: INFLIXIMAB
     Dosage: UNK
     Route: 042
  54. INFLIXIMAB [Suspect]
     Active Substance: INFLIXIMAB
     Dosage: UNK
     Route: 042
  55. INFLIXIMAB [Suspect]
     Active Substance: INFLIXIMAB
     Dosage: UNK
     Route: 042
  56. INFLIXIMAB [Suspect]
     Active Substance: INFLIXIMAB
     Dosage: UNK
     Route: 042
  57. INFLIXIMAB [Suspect]
     Active Substance: INFLIXIMAB
     Dosage: UNK
     Route: 042
  58. INFLIXIMAB [Suspect]
     Active Substance: INFLIXIMAB
     Dosage: UNK, ADDITIONAL INFORMATION ON DRUG (FREE TEXT): ADALIMUMAB SOLUTION FOR INJECTION, SINGLE DOSE PEN
     Route: 065
  59. INFLIXIMAB [Suspect]
     Active Substance: INFLIXIMAB
     Dosage: UNK, ADDITIONAL INFORMATION ON DRUG (FREE TEXT): ADALIMUMAB SOLUTION FOR INJECTION, SINGLE DOSE PEN
     Route: 065
  60. INFLIXIMAB [Suspect]
     Active Substance: INFLIXIMAB
     Dosage: UNK, ADDITIONAL INFORMATION ON DRUG (FREE TEXT): ADALIMUMAB SOLUTION FOR INJECTION, SINGLE DOSE PEN
     Route: 065
  61. INFLIXIMAB [Suspect]
     Active Substance: INFLIXIMAB
     Dosage: ADDITIONAL INFORMATION ON DRUG (FREE TEXT): ADALIMUMAB SOLUTION FOR INJECTION, SINGLE DOSE PEN
     Route: 065
  62. INFLIXIMAB [Suspect]
     Active Substance: INFLIXIMAB
     Dosage: ADDITIONAL INFORMATION ON DRUG (FREE TEXT): ADALIMUMAB SOLUTION FOR INJECTION, SINGLE DOSE PEN
     Route: 065
  63. INFLIXIMAB [Suspect]
     Active Substance: INFLIXIMAB
     Dosage: ADDITIONAL INFORMATION ON DRUG (FREE TEXT): ADALIMUMAB SOLUTION FOR INJECTION, SINGLE DOSE PEN
     Route: 065
  64. INFLIXIMAB [Suspect]
     Active Substance: INFLIXIMAB
     Dosage: ADDITIONAL INFORMATION ON DRUG (FREE TEXT): ADALIMUMAB SOLUTION FOR INJECTION, SINGLE DOSE PEN
     Route: 065
  65. INFLIXIMAB [Suspect]
     Active Substance: INFLIXIMAB
     Dosage: ADDITIONAL INFORMATION ON DRUG (FREE TEXT): ADALIMUMAB SOLUTION FOR INJECTION, SINGLE DOSE PEN
     Route: 065
  66. INFLIXIMAB [Suspect]
     Active Substance: INFLIXIMAB
     Dosage: ADDITIONAL INFORMATION ON DRUG (FREE TEXT): ADALIMUMAB SOLUTION FOR INJECTION, SINGLE DOSE PEN
     Route: 042
  67. INFLIXIMAB [Suspect]
     Active Substance: INFLIXIMAB
     Dosage: ADDITIONAL INFORMATION ON DRUG (FREE TEXT): ADALIMUMAB SOLUTION FOR INJECTION, SINGLE DOSE PEN
     Route: 042
  68. INFLIXIMAB [Suspect]
     Active Substance: INFLIXIMAB
     Dosage: ADDITIONAL INFORMATION ON DRUG (FREE TEXT): ADALIMUMAB SOLUTION FOR INJECTION, SINGLE DOSE PEN
     Route: 042
  69. INFLIXIMAB [Suspect]
     Active Substance: INFLIXIMAB
     Dosage: ADDITIONAL INFORMATION ON DRUG (FREE TEXT): ADALIMUMAB SOLUTION FOR INJECTION, SINGLE DOSE PEN
     Route: 042
  70. INFLIXIMAB [Suspect]
     Active Substance: INFLIXIMAB
     Dosage: ADDITIONAL INFORMATION ON DRUG (FREE TEXT): ADALIMUMAB SOLUTION FOR INJECTION, SINGLE DOSE PEN
     Route: 050
  71. INFLIXIMAB [Suspect]
     Active Substance: INFLIXIMAB
     Dosage: ADDITIONAL INFORMATION ON DRUG (FREE TEXT): ADALIMUMAB SOLUTION FOR INJECTION, SINGLE DOSE PEN
     Route: 050
  72. INFLIXIMAB [Suspect]
     Active Substance: INFLIXIMAB
     Dosage: ADDITIONAL INFORMATION ON DRUG (FREE TEXT): ADALIMUMAB SOLUTION FOR INJECTION, SINGLE DOSE PEN
     Route: 050
  73. INFLIXIMAB [Suspect]
     Active Substance: INFLIXIMAB
     Dosage: ADDITIONAL INFORMATION ON DRUG (FREE TEXT): ADALIMUMAB SOLUTION FOR INJECTION, SINGLE DOSE PEN
     Route: 050
  74. INFLIXIMAB [Suspect]
     Active Substance: INFLIXIMAB
     Dosage: ADDITIONAL INFORMATION ON DRUG (FREE TEXT): ADALIMUMAB SOLUTION FOR INJECTION, SINGLE DOSE PEN
     Route: 050
  75. INFLIXIMAB [Suspect]
     Active Substance: INFLIXIMAB
     Dosage: ADDITIONAL INFORMATION ON DRUG (FREE TEXT): ADALIMUMAB SOLUTION FOR INJECTION, SINGLE DOSE PEN
     Route: 050
  76. INFLIXIMAB [Suspect]
     Active Substance: INFLIXIMAB
     Dosage: ADDITIONAL INFORMATION ON DRUG (FREE TEXT): ADALIMUMAB SOLUTION FOR INJECTION, SINGLE DOSE PEN
     Route: 050
  77. INFLIXIMAB [Suspect]
     Active Substance: INFLIXIMAB
     Dosage: ADDITIONAL INFORMATION ON DRUG (FREE TEXT): ADALIMUMAB SOLUTION FOR INJECTION, SINGLE DOSE PEN
     Route: 050
  78. INFLIXIMAB [Suspect]
     Active Substance: INFLIXIMAB
     Dosage: ADDITIONAL INFORMATION ON DRUG (FREE TEXT): ADALIMUMAB SOLUTION FOR INJECTION, SINGLE DOSE PEN
     Route: 050
  79. INFLIXIMAB [Suspect]
     Active Substance: INFLIXIMAB
     Dosage: ADDITIONAL INFORMATION ON DRUG (FREE TEXT): ADALIMUMAB SOLUTION FOR INJECTION, SINGLE DOSE PEN
     Route: 050
  80. INFLIXIMAB [Suspect]
     Active Substance: INFLIXIMAB
     Dosage: ADDITIONAL INFORMATION ON DRUG (FREE TEXT): ADALIMUMAB SOLUTION FOR INJECTION, SINGLE DOSE PEN
     Route: 050
  81. INFLIXIMAB [Suspect]
     Active Substance: INFLIXIMAB
     Dosage: ADDITIONAL INFORMATION ON DRUG (FREE TEXT): ADALIMUMAB SOLUTION FOR INJECTION, SINGLE DOSE PEN
     Route: 050
  82. INFLIXIMAB [Suspect]
     Active Substance: INFLIXIMAB
     Dosage: ADDITIONAL INFORMATION ON DRUG (FREE TEXT): ADALIMUMAB SOLUTION FOR INJECTION, SINGLE DOSE PEN
     Route: 050
  83. INFLIXIMAB [Suspect]
     Active Substance: INFLIXIMAB
     Dosage: ADDITIONAL INFORMATION ON DRUG (FREE TEXT): ADALIMUMAB SOLUTION FOR INJECTION, SINGLE DOSE PEN
     Route: 050
  84. INFLIXIMAB [Suspect]
     Active Substance: INFLIXIMAB
     Dosage: ADDITIONAL INFORMATION ON DRUG (FREE TEXT):ADALIMUMAB SOLUTION FOR INJECTION, SINGLE DOSE PEN DOSAGE
  85. INFLIXIMAB [Suspect]
     Active Substance: INFLIXIMAB
     Dosage: UNK, OROMUCOSAL SPRAY, ADDITIONAL INFORMATION ON DRUG (FREE TEXT): OROMUCOSAL SPRAY ADALIMUMAB SOLUT
     Route: 042
  86. INFLIXIMAB [Suspect]
     Active Substance: INFLIXIMAB
     Dosage: UNK, OROMUCOSAL SPRAY, ADDITIONAL INFORMATION ON DRUG (FREE TEXT): OROMUCOSAL SPRAY ADALIMUMAB SOLUT
     Route: 042
  87. ADALIMUMAB [Suspect]
     Active Substance: ADALIMUMAB
     Indication: Crohn^s disease
     Dosage: UNKNOWN; ADDITIONAL INFORMATION ON DRUG: ADALIMUMAB SOLUTION FOR INJECTION (DOSAGE1: UNITE=SURECLICK
     Route: 050
  88. ADALIMUMAB [Suspect]
     Active Substance: ADALIMUMAB
     Dosage: 1 UNIT; ADALIMUMAB SOLUTION FOR INJECTION, SINGLEDOSE PEN
     Route: 050
  89. ADALIMUMAB [Suspect]
     Active Substance: ADALIMUMAB
     Dosage: 1 UNIT, SINGLE DOSE PEN, UNIT EQUAL TO SURE CLICK (ADALIMUMAB SOLUTION FOR INJECTION, SINGLE DOSE PE
     Route: 050
  90. ADALIMUMAB [Suspect]
     Active Substance: ADALIMUMAB
     Dosage: 1 DOSAGE FORM (1 UNIT)
     Route: 050
  91. ADALIMUMAB [Suspect]
     Active Substance: ADALIMUMAB
     Dosage: UNK. ADDITIONAL INFO: ADALIMUMAB SOLUTION FOR INJECTION, SINGLE DOSE PEN DOSAGE1: UNIT=SURECLICK DOS
     Route: 050
  92. ADALIMUMAB [Suspect]
     Active Substance: ADALIMUMAB
     Dosage: UNK, ( 1UNIT, OTHER ; ADALIMUMAB SOLUTION FOR INJECTION, SINGLE DOSE PEN UNIT=SURECLICK
     Route: 050
  93. ADALIMUMAB [Suspect]
     Active Substance: ADALIMUMAB
     Dosage: UNK, OTHER (ADALIMUMAB SOLUTION FOR INJECTION, SINGLE DOSE PEN UNIT=SURECLICK)
     Route: 050
  94. ADALIMUMAB [Suspect]
     Active Substance: ADALIMUMAB
     Dosage: UNK
     Route: 050
  95. ADALIMUMAB [Suspect]
     Active Substance: ADALIMUMAB
     Dosage: SINGLE DOSE PEN, UNIT EQUAL TO SURE CLICK (ADALIMUMAB SOLUTION FOR INJECTION, SINGLE DOSE PEN UNIT=S
     Route: 050
  96. ADALIMUMAB [Suspect]
     Active Substance: ADALIMUMAB
     Dosage: UNK (SINGLE DOSE PEN, UNIT EQUAL TO SURE CLICK); ADALIMUMAB SOLUTION FOR INJECTION, SINGLE DOSE PEN
     Route: 050
  97. ADALIMUMAB [Suspect]
     Active Substance: ADALIMUMAB
     Dosage: UNK (SINGLE DOSE PEN, UNIT EQUAL TO SURE CLICK); ADALIMUMAB SOLUTION FOR INJECTION, SINGLE DOSE PEN
     Route: 050
  98. ADALIMUMAB [Suspect]
     Active Substance: ADALIMUMAB
     Dosage: UNK (SINGLE DOSE PEN, UNIT EQUAL TO SURE CLICK); ADALIMUMAB SOLUTION FOR INJECTION, SINGLE DOSE PEN
     Route: 050
  99. ADALIMUMAB [Suspect]
     Active Substance: ADALIMUMAB
     Dosage: UNK (1 UNIT, SINGLE DOSE PEN, UNIT EQUAL TO SURECLICK) (ADALIMUMAB SOLUTION FOR INJECTION, SINGLE DO
     Route: 065
  100. ADALIMUMAB [Suspect]
     Active Substance: ADALIMUMAB
     Dosage: UNK; ADALIMUMAB SOLUTION FOR INJECTION, SINGLE DOSE PEN
     Route: 050
  101. ADALIMUMAB [Suspect]
     Active Substance: ADALIMUMAB
     Dosage: UNK
     Route: 050
  102. ADALIMUMAB [Suspect]
     Active Substance: ADALIMUMAB
     Dosage: UNK; ADALIMUMAB SOLUTION FOR INJECTION, SINGLE DOSE PEN
     Route: 050
  103. ADALIMUMAB [Suspect]
     Active Substance: ADALIMUMAB
     Dosage: UNK
     Route: 050
  104. ADALIMUMAB [Suspect]
     Active Substance: ADALIMUMAB
     Dosage: 1 UNIT; ADALIMUMAB SOLUTION FOR INJECTION, SINGLE DOSE PEN
     Route: 050
  105. ADALIMUMAB [Suspect]
     Active Substance: ADALIMUMAB
     Dosage: 1 DOSAGE FORM (1 UNIT); ADDITIONAL INFORMATION ON DRUG (FREE TEXT): ADALIMUMAB SOLUTION FOR INJECTIO
     Route: 050
  106. ADALIMUMAB [Suspect]
     Active Substance: ADALIMUMAB
     Dosage: UNK, OTHER ADDITIONAL INFORMATION ON DRUG (FREE TEXT): ADALIMUMAB SOLUTION FOR INJECTION, SINGLE DOS
     Route: 050
  107. ADALIMUMAB [Suspect]
     Active Substance: ADALIMUMAB
     Dosage: UNK (SINGLE DOSE PEN, UNIT EQUAL TO SURE CLICK); ADALIMUMAB SOLUTION FOR INJECTION, SINGLE DOSE PEN
     Route: 065
  108. ADALIMUMAB [Suspect]
     Active Substance: ADALIMUMAB
     Dosage: 1 DOSAGE FORM (1 UNIT) (ADALIMUMAB SOLUTION FOR INJECTION, SINGLE DOSE PEN)
     Route: 065
  109. ADALIMUMAB [Suspect]
     Active Substance: ADALIMUMAB
     Dosage: UNK, OTER (ADALIMUMAB SOLUTION FOR INJECTION, SINGLE DOSE PEN)
     Route: 065
  110. ADALIMUMAB [Suspect]
     Active Substance: ADALIMUMAB
     Dosage: 1 UNIT, SINGLE DOSE PEN, UNIT EQUAL TO SURE CLICK (ADALIMUMAB SOLUTION FOR INJECTION, SINGLE DOSE PE
     Route: 065
  111. ADALIMUMAB [Suspect]
     Active Substance: ADALIMUMAB
     Dosage: UNKUNK (SINGLE DOSE PEN, UNIT EQUAL TO SURE CLICK) (ADALIMUMAB SOLUTION FOR INJECTION, SINGLE DOSE P
     Route: 065
  112. ADALIMUMAB [Suspect]
     Active Substance: ADALIMUMAB
     Dosage: 1 DOSAGE FORM (DOSAGE1: UNIT, SURECLICK) (ADALIMUMAB SOLUTION FOR INJECTION, SINGLE DOSE PEN)
     Route: 065
  113. ADALIMUMAB [Suspect]
     Active Substance: ADALIMUMAB
     Dosage: UNK, ( 1UNIT, OTHER) (ADALIMUMAB SOLUTION FOR INJECTION, SINGLE DOSE PEN)
     Route: 065
  114. ADALIMUMAB [Suspect]
     Active Substance: ADALIMUMAB
     Dosage: UNK (SINGLE DOSE PEN) (ADALIMUMAB SOLUTION FOR INJECTION, SINGLE DOSE PEN)
     Route: 065
  115. ADALIMUMAB [Suspect]
     Active Substance: ADALIMUMAB
     Indication: Crohn^s disease
     Dosage: ADALIMUMAB SOLUTION FOR INJECTION, SINGLE DOSE PEN UNIT=SURECLICK
     Route: 065
  116. ADALIMUMAB [Suspect]
     Active Substance: ADALIMUMAB
     Dosage: ADALIMUMAB SOLUTION FOR INJECTION, SINGLE DOSE PEN UNIT=SURECLICK
     Route: 065
  117. ADALIMUMAB [Suspect]
     Active Substance: ADALIMUMAB
     Dosage: ADALIMUMAB SOLUTION FOR INJECTION, SINGLE DOSE PEN UNIT=SURECLICK
     Route: 065
  118. ADALIMUMAB [Suspect]
     Active Substance: ADALIMUMAB
     Dosage: ADALIMUMAB SOLUTION FOR INJECTION, SINGLE DOSE PEN UNIT=SURECLICK
     Route: 065
  119. ADALIMUMAB [Suspect]
     Active Substance: ADALIMUMAB
     Dosage: ADALIMUMAB SOLUTION FOR INJECTION, SINGLE DOSE PEN UNIT=SURECLICK
     Route: 065
  120. ADALIMUMAB [Suspect]
     Active Substance: ADALIMUMAB
     Dosage: ADALIMUMAB SOLUTION FOR INJECTION, SINGLE DOSE PEN UNIT=SURECLICK
     Route: 065
  121. ADALIMUMAB [Suspect]
     Active Substance: ADALIMUMAB
     Dosage: ADALIMUMAB SOLUTION FOR INJECTION, SINGLE DOSE PEN UNIT=SURECLICK
     Route: 065
  122. ADALIMUMAB [Suspect]
     Active Substance: ADALIMUMAB
     Dosage: ADALIMUMAB SOLUTION FOR INJECTION, SINGLE DOSE PEN UNIT=SURECLICK
     Route: 065
  123. ADALIMUMAB [Suspect]
     Active Substance: ADALIMUMAB
     Dosage: ADALIMUMAB SOLUTION FOR INJECTION, SINGLE DOSE PEN UNIT=SURECLICK
     Route: 065
  124. ADALIMUMAB [Suspect]
     Active Substance: ADALIMUMAB
     Dosage: ADALIMUMAB SOLUTION FOR INJECTION, SINGLE DOSE PEN UNIT=SURECLICK
     Route: 065
  125. ADALIMUMAB [Suspect]
     Active Substance: ADALIMUMAB
     Dosage: ADALIMUMAB SOLUTION FOR INJECTION, SINGLE DOSE PEN UNIT=SURECLICK
     Route: 065
  126. ADALIMUMAB [Suspect]
     Active Substance: ADALIMUMAB
     Dosage: ADALIMUMAB SOLUTION FOR INJECTION, SINGLE DOSE PEN UNIT=SURECLICK
     Route: 065
  127. ADALIMUMAB [Suspect]
     Active Substance: ADALIMUMAB
     Dosage: ADALIMUMAB SOLUTION FOR INJECTION, SINGLE DOSE PEN UNIT=SURECLICK
     Route: 065
  128. ADALIMUMAB [Suspect]
     Active Substance: ADALIMUMAB
     Dosage: ADALIMUMAB SOLUTION FOR INJECTION, SINGLE DOSE PEN UNIT=SURECLICK
     Route: 065
  129. ADALIMUMAB [Suspect]
     Active Substance: ADALIMUMAB
     Dosage: ADALIMUMAB SOLUTION FOR INJECTION, SINGLE DOSE PEN UNIT=SURECLICK
     Route: 065
  130. ADALIMUMAB [Suspect]
     Active Substance: ADALIMUMAB
     Dosage: ADALIMUMAB SOLUTION FOR INJECTION, SINGLE DOSE PEN UNIT=SURECLICK
     Route: 065
  131. ADALIMUMAB [Suspect]
     Active Substance: ADALIMUMAB
     Dosage: ADALIMUMAB SOLUTION FOR INJECTION, SINGLE DOSE PEN UNIT=SURECLICK
     Route: 065
  132. ADALIMUMAB [Suspect]
     Active Substance: ADALIMUMAB
     Dosage: ADALIMUMAB SOLUTION FOR INJECTION, SINGLE DOSE PEN UNIT=SURECLICK
     Route: 065
  133. ADALIMUMAB [Suspect]
     Active Substance: ADALIMUMAB
     Dosage: ADALIMUMAB SOLUTION FOR INJECTION, SINGLE DOSE PEN UNIT=SURECLICK
     Route: 065
  134. ADALIMUMAB [Suspect]
     Active Substance: ADALIMUMAB
     Dosage: ADALIMUMAB SOLUTION FOR INJECTION, SINGLE DOSE PEN UNIT=SURECLICK
     Route: 065
  135. ADALIMUMAB [Suspect]
     Active Substance: ADALIMUMAB
     Dosage: ADALIMUMAB SOLUTION FOR INJECTION, SINGLE DOSE PEN UNIT=SURECLICK
     Route: 065
  136. ADALIMUMAB [Suspect]
     Active Substance: ADALIMUMAB
     Dosage: ADALIMUMAB SOLUTION FOR INJECTION, SINGLE DOSE PEN UNIT=SURECLICK
     Route: 065
  137. ADALIMUMAB [Suspect]
     Active Substance: ADALIMUMAB
     Dosage: ADALIMUMAB SOLUTION FOR INJECTION, SINGLE DOSE PEN UNIT=SURECLICK
     Route: 065
  138. ADALIMUMAB [Suspect]
     Active Substance: ADALIMUMAB
     Dosage: ADALIMUMAB SOLUTION FOR INJECTION, SINGLE DOSE PEN UNIT=SURECLICK
     Route: 050
  139. ADALIMUMAB [Suspect]
     Active Substance: ADALIMUMAB
     Dosage: ADALIMUMAB SOLUTION FOR INJECTION, SINGLE DOSE PEN UNIT=SURECLICK
     Route: 050
  140. ADALIMUMAB [Suspect]
     Active Substance: ADALIMUMAB
     Dosage: ADALIMUMAB SOLUTION FOR INJECTION, SINGLE DOSE PEN UNIT=SURECLICK
     Route: 050
  141. ADALIMUMAB [Suspect]
     Active Substance: ADALIMUMAB
     Dosage: ADALIMUMAB SOLUTION FOR INJECTION, SINGLE DOSE PEN UNIT=SURECLICK
     Route: 050
  142. ADALIMUMAB [Suspect]
     Active Substance: ADALIMUMAB
     Dosage: ADALIMUMAB SOLUTION FOR INJECTION, SINGLE DOSE PEN UNIT=SURECLICK
     Route: 050
  143. ADALIMUMAB [Suspect]
     Active Substance: ADALIMUMAB
     Dosage: ADALIMUMAB SOLUTION FOR INJECTION, SINGLE DOSE PEN UNIT=SURECLICK
     Route: 050
  144. ADALIMUMAB [Suspect]
     Active Substance: ADALIMUMAB
     Dosage: ADALIMUMAB SOLUTION FOR INJECTION, SINGLE DOSE PEN UNIT=SURECLICK
     Route: 050
  145. ADALIMUMAB [Suspect]
     Active Substance: ADALIMUMAB
     Dosage: ADALIMUMAB SOLUTION FOR INJECTION, SINGLE DOSE PEN UNIT=SURECLICK
     Route: 050
  146. ADALIMUMAB [Suspect]
     Active Substance: ADALIMUMAB
     Dosage: ADALIMUMAB SOLUTION FOR INJECTION, SINGLE DOSE PEN UNIT=SURECLICK
     Route: 050
  147. ADALIMUMAB [Suspect]
     Active Substance: ADALIMUMAB
     Dosage: ADALIMUMAB SOLUTION FOR INJECTION, SINGLE DOSE PEN UNIT=SURECLICK
     Route: 050
  148. ADALIMUMAB [Suspect]
     Active Substance: ADALIMUMAB
     Dosage: ADALIMUMAB SOLUTION FOR INJECTION, SINGLE DOSE PEN UNIT=SURECLICK
     Route: 050
  149. ADALIMUMAB [Suspect]
     Active Substance: ADALIMUMAB
     Dosage: ADALIMUMAB SOLUTION FOR INJECTION, SINGLE DOSE PEN UNIT=SURECLICK
     Route: 050
  150. ADALIMUMAB [Suspect]
     Active Substance: ADALIMUMAB
     Dosage: ADALIMUMAB SOLUTION FOR INJECTION, SINGLE DOSE PEN UNIT=SURECLICK
     Route: 050
  151. ADALIMUMAB [Suspect]
     Active Substance: ADALIMUMAB
     Dosage: ADALIMUMAB SOLUTION FOR INJECTION, SINGLE DOSE PEN UNIT=SURECLICK
     Route: 050
  152. ADALIMUMAB [Suspect]
     Active Substance: ADALIMUMAB
     Dosage: ADALIMUMAB SOLUTION FOR INJECTION, SINGLE DOSE PEN UNIT=SURECLICK
     Route: 050
  153. ADALIMUMAB [Suspect]
     Active Substance: ADALIMUMAB
     Dosage: ADALIMUMAB SOLUTION FOR INJECTION, SINGLE DOSE PEN UNIT=SURECLICK
     Route: 050
  154. ADALIMUMAB [Suspect]
     Active Substance: ADALIMUMAB
     Dosage: ADALIMUMAB SOLUTION FOR INJECTION, SINGLE DOSE PEN UNIT=SURECLICK
     Route: 050
  155. ADALIMUMAB [Suspect]
     Active Substance: ADALIMUMAB
     Dosage: ADALIMUMAB SOLUTION FOR INJECTION, SINGLE DOSE PEN UNIT=SURECLICK
     Route: 050
  156. ADALIMUMAB [Suspect]
     Active Substance: ADALIMUMAB
     Dosage: ADALIMUMAB SOLUTION FOR INJECTION, SINGLE DOSE PEN UNIT=SURECLICK
     Route: 050
  157. ADALIMUMAB [Suspect]
     Active Substance: ADALIMUMAB
     Dosage: ADALIMUMAB SOLUTION FOR INJECTION, SINGLE DOSE PEN UNIT=SURECLICK
     Route: 050
  158. ADALIMUMAB [Suspect]
     Active Substance: ADALIMUMAB
     Dosage: ADALIMUMAB SOLUTION FOR INJECTION, SINGLE DOSE PEN UNIT=SURECLICK
     Route: 050
  159. ADALIMUMAB [Suspect]
     Active Substance: ADALIMUMAB
     Dosage: ADALIMUMAB SOLUTION FOR INJECTION, SINGLE DOSE PEN UNIT=SURECLICK
     Route: 050
  160. ADALIMUMAB [Suspect]
     Active Substance: ADALIMUMAB
     Dosage: ADALIMUMAB SOLUTION FOR INJECTION, SINGLE DOSE PEN UNIT=SURECLICK
     Route: 050
  161. ADALIMUMAB [Suspect]
     Active Substance: ADALIMUMAB
     Dosage: ADALIMUMAB SOLUTION FOR INJECTION, SINGLE DOSE PEN UNIT=SURECLICK
     Route: 050
  162. ADALIMUMAB [Suspect]
     Active Substance: ADALIMUMAB
     Dosage: ADALIMUMAB SOLUTION FOR INJECTION, SINGLE DOSE PEN UNIT=SURECLICK
     Route: 050
  163. ADALIMUMAB [Suspect]
     Active Substance: ADALIMUMAB
     Dosage: ADALIMUMAB SOLUTION FOR INJECTION, SINGLE DOSE PEN UNIT=SURECLICK
     Route: 050
  164. ADALIMUMAB [Suspect]
     Active Substance: ADALIMUMAB
     Dosage: ADALIMUMAB SOLUTION FOR INJECTION, SINGLE DOSE PEN UNIT=SURECLICK
     Route: 050
  165. ADALIMUMAB [Suspect]
     Active Substance: ADALIMUMAB
     Indication: Crohn^s disease
     Dosage: ADALIMUMAB SOLUTION FOR INJECTION, SINGLE DOSE PEN UNIT=SURECLICK
     Route: 050
  166. ADALIMUMAB [Suspect]
     Active Substance: ADALIMUMAB
     Dosage: ADALIMUMAB SOLUTION FOR INJECTION, SINGLE DOSE PEN UNIT=SURECLICK
     Route: 050
  167. ADALIMUMAB [Suspect]
     Active Substance: ADALIMUMAB
     Dosage: ADALIMUMAB SOLUTION FOR INJECTION, SINGLE DOSE PEN UNIT=SURECLICK
     Route: 050
  168. ADALIMUMAB [Suspect]
     Active Substance: ADALIMUMAB
     Dosage: ADALIMUMAB SOLUTION FOR INJECTION, SINGLE DOSE PEN UNIT=SURECLICK
     Route: 050
  169. ADALIMUMAB [Suspect]
     Active Substance: ADALIMUMAB
     Dosage: ADALIMUMAB SOLUTION FOR INJECTION, SINGLE DOSE PEN UNIT=SURECLICK
     Route: 050
  170. ADALIMUMAB [Suspect]
     Active Substance: ADALIMUMAB
     Dosage: ADALIMUMAB SOLUTION FOR INJECTION, SINGLE DOSE PEN UNIT=SURECLICK
     Route: 050
  171. ADALIMUMAB [Suspect]
     Active Substance: ADALIMUMAB
     Dosage: 1 DOSAGE FORM (1 UNIT)/UNK (1 UNIT, SINGLE DOSE PEN, UNIT EQUAL TO SURE CLICK)
     Route: 050
  172. ADALIMUMAB [Suspect]
     Active Substance: ADALIMUMAB
     Dosage: UNK (1 UNIT, SINGLE DOSE PEN, UNIT EQUAL TO SURE CLICK), ADDITIONAL INFORMATION ON DRUG (FREE TEXT):
     Route: 050
  173. ADALIMUMAB [Suspect]
     Active Substance: ADALIMUMAB
     Dosage: UNK (1 UNIT, SINGLE DOSE PEN, UNIT EQUAL TO SURE CLICK), ADDITIONAL INFORMATION ON DRUG (FREE TEXT):
     Route: 050
  174. ADALIMUMAB [Suspect]
     Active Substance: ADALIMUMAB
     Dosage: UNK (1 UNIT, SINGLE DOSE PEN, UNIT EQUAL TO SURE CLICK), ADDITIONAL INFORMATION ON DRUG (FREE TEXT):
     Route: 050
  175. ADALIMUMAB [Suspect]
     Active Substance: ADALIMUMAB
     Dosage: UNK (1 UNIT, SINGLE DOSE PEN, UNIT EQUAL TO SURE CLICK), ADDITIONAL INFORMATION ON DRUG (FREE TEXT):
     Route: 050
  176. ADALIMUMAB [Suspect]
     Active Substance: ADALIMUMAB
     Dosage: 1 UNIT, ADDITIONAL INFORMATION ON DRUG (FREE TEXT): ADALIMUMAB SOLUTION FOR INJECTION, SINGLE DOSE P
     Route: 050
  177. ADALIMUMAB [Suspect]
     Active Substance: ADALIMUMAB
     Dosage: UNK (1 UNIT, SINGLE DOSE PEN, UNIT EQUAL TO SURE CLICK), ADDITIONAL INFORMATION ON DRUG (FREE TEXT):
     Route: 050
  178. ADALIMUMAB [Suspect]
     Active Substance: ADALIMUMAB
     Dosage: UNK (1 UNIT, SINGLE DOSE PEN, UNIT EQUAL TO SURE CLICK)
     Route: 065
  179. ADALIMUMAB [Suspect]
     Active Substance: ADALIMUMAB
     Dosage: UNK (SINGLE DOSE PEN)
     Route: 050
  180. ADALIMUMAB [Suspect]
     Active Substance: ADALIMUMAB
     Dosage: UNK (1 UNIT, SINGLE DOSE PEN, UNIT EQUAL TO SURE CLICK)
     Route: 065
  181. ADALIMUMAB [Suspect]
     Active Substance: ADALIMUMAB
     Dosage: UNK (1 UNIT, SINGLE DOSE PEN, UNIT EQUAL TO SURE CLICK)
     Route: 065
  182. ADALIMUMAB [Suspect]
     Active Substance: ADALIMUMAB
     Dosage: UNK (1 UNIT, SINGLE DOSE PEN, UNIT EQUAL TO SURE CLICK)
     Route: 065
  183. ADALIMUMAB [Suspect]
     Active Substance: ADALIMUMAB
     Dosage: UNK (SINGLE DOSE PEN, UNIT EQUAL TO SURE CLICK), ADDITIONAL INFORMATION ON DRUG (FREE TEXT): ADALIMU
     Route: 050
  184. ADALIMUMAB [Suspect]
     Active Substance: ADALIMUMAB
     Dosage: UNK (SINGLE DOSE PEN, UNIT EQUAL TO SURE CLICK), ADDITIONAL INFORMATION ON DRUG (FREE TEXT): ADALIMU
     Route: 050
  185. ADALIMUMAB [Suspect]
     Active Substance: ADALIMUMAB
     Dosage: UNK (SINGLE DOSE PEN, UNIT EQUAL TO SURE CLICK), ADDITIONAL INFORMATION ON DRUG (FREE TEXT): ADALIMU
     Route: 050
  186. ADALIMUMAB [Suspect]
     Active Substance: ADALIMUMAB
     Dosage: UNK (SINGLE DOSE PEN, UNIT EQUAL TO SURE CLICK), ADDITIONAL INFORMATION ON DRUG (FREE TEXT): ADALIMU
     Route: 050
  187. ADALIMUMAB [Suspect]
     Active Substance: ADALIMUMAB
     Dosage: UNK, ADDITIONAL INFORMATION ON DRUG (FREE TEXT): ADALIMUMAB SOLUTION FOR INJECTION, SINGLE DOSE PEN
     Route: 050
  188. ADALIMUMAB [Suspect]
     Active Substance: ADALIMUMAB
     Dosage: UNK
     Route: 065
  189. ADALIMUMAB [Suspect]
     Active Substance: ADALIMUMAB
     Dosage: 1 DOSAGE FORM (1 UNIT), ADDITIONAL INFORMATION ON DRUG (FREE TEXT): ADALIMUMAB SOLUTION FOR INJECTIO
     Route: 050
  190. ADALIMUMAB [Suspect]
     Active Substance: ADALIMUMAB
     Dosage: (1 UNIT, SINGLE DOSE PEN)
     Route: 065
  191. ADALIMUMAB [Suspect]
     Active Substance: ADALIMUMAB
     Dosage: UNK, OTHER
     Route: 050
  192. ADALIMUMAB [Suspect]
     Active Substance: ADALIMUMAB
     Dosage: UNK, ( 1UNIT, OTHER
     Route: 050
  193. ADALIMUMAB [Suspect]
     Active Substance: ADALIMUMAB
     Dosage: UNK, ADDITIONAL INFORMATION ON DRUG (FREE TEXT): ADALIMUMAB SOLUTION FOR INJECTION, SINGLE DOSE PEN
     Route: 050
  194. ADALIMUMAB [Suspect]
     Active Substance: ADALIMUMAB
     Dosage: UNK, ADDITIONAL INFORMATION ON DRUG (FREE TEXT): ADALIMUMAB SOLUTION FOR INJECTION, SINGLE DOSE PEN
     Route: 050
  195. ADALIMUMAB [Suspect]
     Active Substance: ADALIMUMAB
     Dosage: UNK, ADDITIONAL INFORMATION ON DRUG (FREE TEXT): ADALIMUMAB SOLUTION FOR INJECTION, SINGLE DOSE PEN
     Route: 050
  196. ADALIMUMAB [Suspect]
     Active Substance: ADALIMUMAB
     Dosage: UNK, ADDITIONAL INFORMATION ON DRUG (FREE TEXT): ADALIMUMAB SOLUTION FOR INJECTION, SINGLE DOSE PEN
     Route: 050
  197. ADALIMUMAB [Suspect]
     Active Substance: ADALIMUMAB
     Dosage: UNK, ADDITIONAL INFORMATION ON DRUG (FREE TEXT): ADALIMUMAB SOLUTION FOR INJECTION, SINGLE DOSE PEN
     Route: 050
  198. ADALIMUMAB [Suspect]
     Active Substance: ADALIMUMAB
     Dosage: UNK, ( 1UNIT, OTHER
     Route: 050
  199. ADALIMUMAB [Suspect]
     Active Substance: ADALIMUMAB
     Dosage: UNK, ( 1UNIT, OTHER
     Route: 050
  200. ADALIMUMAB [Suspect]
     Active Substance: ADALIMUMAB
     Dosage: UNK, ( 1UNIT, OTHER
     Route: 050
  201. ADALIMUMAB [Suspect]
     Active Substance: ADALIMUMAB
     Dosage: UNK, ( 1UNIT, OTHER
     Route: 050
  202. ADALIMUMAB [Suspect]
     Active Substance: ADALIMUMAB
     Dosage: UNK, ( 1UNIT, OTHER
     Route: 050
  203. ADALIMUMAB [Suspect]
     Active Substance: ADALIMUMAB
     Dosage: 1 DOSAGE FORM (1 UNIT)
     Route: 050
  204. ADALIMUMAB [Suspect]
     Active Substance: ADALIMUMAB
     Dosage: 1 DOSAGE FORM (1 UNIT)
     Route: 050
  205. ADALIMUMAB [Suspect]
     Active Substance: ADALIMUMAB
     Dosage: 1 DOSAGE FORM (1 UNIT)
     Route: 050
  206. ADALIMUMAB [Suspect]
     Active Substance: ADALIMUMAB
     Dosage: 1 DOSAGE FORM (1 UNIT)
     Route: 050
  207. ADALIMUMAB [Suspect]
     Active Substance: ADALIMUMAB
     Dosage: 1 DOSAGE FORM (1 UNIT)
     Route: 050
  208. ADALIMUMAB [Suspect]
     Active Substance: ADALIMUMAB
     Dosage: 1 DOSAGE FORM (1 UNIT)
     Route: 050
  209. ADALIMUMAB [Suspect]
     Active Substance: ADALIMUMAB
     Dosage: 1 DOSAGE FORM (1 UNIT)
     Route: 050
  210. ADALIMUMAB [Suspect]
     Active Substance: ADALIMUMAB
     Dosage: 1 DOSAGE FORM (1 UNIT)
     Route: 050
  211. ADALIMUMAB [Suspect]
     Active Substance: ADALIMUMAB
     Dosage: 1 UNIT, SINGLE DOSE PEN, UNIT EQUAL TO SURE CLICK, ADDITIONAL INFORMATION ON DRUG (FREE TEXT):ADALIM
  212. ADALIMUMAB [Suspect]
     Active Substance: ADALIMUMAB
     Dosage: UNK (SINGLE DOSE PEN), ADDITIONAL INFORMATION ON DRUG (FREE TEXT): ADALIMUMAB SOLUTION FOR INJECTION
     Route: 050
  213. ADALIMUMAB [Suspect]
     Active Substance: ADALIMUMAB
     Indication: Crohn^s disease
     Dosage: UNK (1 UNIT, SINGLE DOSE PEN, UNIT EQUAL TO SURE CLICK)
     Route: 050
  214. ADALIMUMAB [Suspect]
     Active Substance: ADALIMUMAB
     Indication: Crohn^s disease
     Dosage: UNK
     Route: 050
  215. ADALIMUMAB [Suspect]
     Active Substance: ADALIMUMAB
     Dosage: UNK
     Route: 050
  216. ADALIMUMAB [Suspect]
     Active Substance: ADALIMUMAB
     Dosage: UNK
     Route: 050
  217. ADALIMUMAB [Suspect]
     Active Substance: ADALIMUMAB
     Dosage: UNK (1 UNIT, SINGLE DOSE PEN, UNIT EQUAL TO SURE CLICK)
     Route: 050
  218. ADALIMUMAB [Suspect]
     Active Substance: ADALIMUMAB
     Dosage: 1 UNIT SOLUTION FOR INJECTION
     Route: 050
  219. ADALIMUMAB [Suspect]
     Active Substance: ADALIMUMAB
     Dosage: UNK
     Route: 050
  220. ADALIMUMAB [Suspect]
     Active Substance: ADALIMUMAB
     Dosage: UNK
     Route: 050
  221. ADALIMUMAB [Suspect]
     Active Substance: ADALIMUMAB
     Dosage: UNK (1 UNIT, SINGLE DOSE PEN, UNIT EQUAL TO SURE CLICK)
     Route: 050
  222. ADALIMUMAB [Suspect]
     Active Substance: ADALIMUMAB
     Dosage: UNK (1 UNIT, SINGLE DOSE PEN, UNIT EQUAL TO SURE CLICK)
     Route: 050
  223. ADALIMUMAB [Suspect]
     Active Substance: ADALIMUMAB
     Dosage: UNK
     Route: 050
  224. ADALIMUMAB [Suspect]
     Active Substance: ADALIMUMAB
     Dosage: UNK
     Route: 050
  225. ADALIMUMAB [Suspect]
     Active Substance: ADALIMUMAB
     Dosage: UNK
     Route: 050
  226. ADALIMUMAB [Suspect]
     Active Substance: ADALIMUMAB
     Dosage: UNK (1 UNIT, SINGLE DOSE PEN, UNIT EQUAL TO SURE CLICK)
     Route: 050
  227. ADALIMUMAB [Suspect]
     Active Substance: ADALIMUMAB
     Dosage: UNK (1 UNIT, SINGLE DOSE PEN, UNIT EQUAL TO SURE CLICK)
     Route: 050
  228. ADALIMUMAB [Suspect]
     Active Substance: ADALIMUMAB
     Dosage: UNK
     Route: 050
  229. ADALIMUMAB [Suspect]
     Active Substance: ADALIMUMAB
     Dosage: UNK (1 UNIT, SINGLE DOSE PEN, UNIT EQUAL TO SURE CLICK)
     Route: 050
  230. ADALIMUMAB [Suspect]
     Active Substance: ADALIMUMAB
     Dosage: UNK
     Route: 065
  231. ADALIMUMAB [Suspect]
     Active Substance: ADALIMUMAB
     Dosage: 1 DOSAGE FORM, 1 UNIT, SINGLE DOSE PEN, UNIT EQUAL TO SURE CLICK
     Route: 050
  232. ADALIMUMAB [Suspect]
     Active Substance: ADALIMUMAB
     Dosage: 1 DOSAGE FORM (1 UNITSOLUTION FOR INJECTION)
     Route: 050
  233. ENTYVIO [Suspect]
     Active Substance: VEDOLIZUMAB
     Indication: Crohn^s disease
     Dosage: UNK (ADALIMUMAB SOLUTION FOR INJECTION, SINGLE DOSE PEN)
     Route: 065
  234. ENTYVIO [Suspect]
     Active Substance: VEDOLIZUMAB
     Indication: Product used for unknown indication
     Dosage: UNKNOWN
     Route: 050
  235. ENTYVIO [Suspect]
     Active Substance: VEDOLIZUMAB
     Indication: Crohn^s disease
     Dosage: UNK (ADALIMUMAB SOLUTION FOR INJECTION, SINGLE DOSE PEN)
     Route: 050
  236. ENTYVIO [Suspect]
     Active Substance: VEDOLIZUMAB
     Dosage: UNKNOWN
     Route: 050
  237. ENTYVIO [Suspect]
     Active Substance: VEDOLIZUMAB
     Dosage: ADDITIONAL INFO: ROUTE:OTHER
     Route: 050
  238. ENTYVIO [Suspect]
     Active Substance: VEDOLIZUMAB
     Dosage: UNK
     Route: 050
  239. ENTYVIO [Suspect]
     Active Substance: VEDOLIZUMAB
     Dosage: UNK
     Route: 050
  240. ENTYVIO [Suspect]
     Active Substance: VEDOLIZUMAB
     Dosage: UNKNOWN
     Route: 050
  241. ENTYVIO [Suspect]
     Active Substance: VEDOLIZUMAB
     Dosage: UNKNOWN
     Route: 050
  242. ENTYVIO [Suspect]
     Active Substance: VEDOLIZUMAB
     Dosage: UNKNOWN
     Route: 050
  243. ENTYVIO [Suspect]
     Active Substance: VEDOLIZUMAB
     Dosage: UNK
     Route: 050
  244. ENTYVIO [Suspect]
     Active Substance: VEDOLIZUMAB
     Dosage: UNK
     Route: 050
  245. ENTYVIO [Suspect]
     Active Substance: VEDOLIZUMAB
     Dosage: UNK
     Route: 050
  246. ENTYVIO [Suspect]
     Active Substance: VEDOLIZUMAB
     Dosage: UNK
     Route: 050
  247. ENTYVIO [Suspect]
     Active Substance: VEDOLIZUMAB
     Dosage: UNK
     Route: 050
  248. ENTYVIO [Suspect]
     Active Substance: VEDOLIZUMAB
     Dosage: UNK
     Route: 050
  249. ENTYVIO [Suspect]
     Active Substance: VEDOLIZUMAB
     Dosage: UNK
     Route: 050
  250. ENTYVIO [Suspect]
     Active Substance: VEDOLIZUMAB
     Dosage: UNK
     Route: 050
  251. ENTYVIO [Suspect]
     Active Substance: VEDOLIZUMAB
     Dosage: UNK
     Route: 050
  252. ENTYVIO [Suspect]
     Active Substance: VEDOLIZUMAB
     Dosage: UNK
     Route: 050
  253. ENTYVIO [Suspect]
     Active Substance: VEDOLIZUMAB
     Dosage: UNK
     Route: 050
  254. ENTYVIO [Suspect]
     Active Substance: VEDOLIZUMAB
     Dosage: DOSE FORM: 231
  255. ENTYVIO [Suspect]
     Active Substance: VEDOLIZUMAB
     Dosage: UNK (ADALIMUMAB SOLUTION FOR INJECTION, SINGLE DOSE PEN)
  256. ENTYVIO [Suspect]
     Active Substance: VEDOLIZUMAB
     Dosage: DOSE FORM: 231
  257. ENTYVIO [Suspect]
     Active Substance: VEDOLIZUMAB
     Dosage: SOLUTION FOR INJECTION (ADALIMUMAB SOLUTION FOR INJECTION, SINGLE DOSE PEN)
     Route: 065
  258. ENTYVIO [Suspect]
     Active Substance: VEDOLIZUMAB
     Dosage: SOLUTION FOR INJECTION (ADALIMUMAB SOLUTION FOR INJECTION, SINGLE DOSE PEN)
     Route: 065
  259. ENTYVIO [Suspect]
     Active Substance: VEDOLIZUMAB
     Dosage: SOLUTION FOR INJECTION
     Route: 065
  260. ENTYVIO [Suspect]
     Active Substance: VEDOLIZUMAB
     Dosage: SOLUTION FOR INJECTION
     Route: 065
  261. ENTYVIO [Suspect]
     Active Substance: VEDOLIZUMAB
     Dosage: SOLUTION FOR INJECTION
     Route: 065
  262. ENTYVIO [Suspect]
     Active Substance: VEDOLIZUMAB
     Dosage: SOLUTION FOR INJECTION
     Route: 065
  263. ENTYVIO [Suspect]
     Active Substance: VEDOLIZUMAB
     Dosage: SOLUTION FOR INJECTION
     Route: 065
  264. ENTYVIO [Suspect]
     Active Substance: VEDOLIZUMAB
     Dosage: SOLUTION FOR INJECTION
     Route: 065
  265. ENTYVIO [Suspect]
     Active Substance: VEDOLIZUMAB
     Dosage: SOLUTION FOR INJECTION
     Route: 065
  266. ENTYVIO [Suspect]
     Active Substance: VEDOLIZUMAB
     Dosage: SOLUTION FOR INJECTION
     Route: 065
  267. ENTYVIO [Suspect]
     Active Substance: VEDOLIZUMAB
     Dosage: SOLUTION FOR INJECTION
     Route: 065
  268. ENTYVIO [Suspect]
     Active Substance: VEDOLIZUMAB
     Dosage: SOLUTION FOR INJECTION
     Route: 050
  269. ENTYVIO [Suspect]
     Active Substance: VEDOLIZUMAB
     Dosage: SOLUTION FOR INJECTION
     Route: 050
  270. ENTYVIO [Suspect]
     Active Substance: VEDOLIZUMAB
     Dosage: SOLUTION FOR INJECTION
     Route: 050
  271. ENTYVIO [Suspect]
     Active Substance: VEDOLIZUMAB
     Dosage: SOLUTION FOR INJECTION
     Route: 050
  272. ENTYVIO [Suspect]
     Active Substance: VEDOLIZUMAB
     Dosage: SOLUTION FOR INJECTION
     Route: 050
  273. ENTYVIO [Suspect]
     Active Substance: VEDOLIZUMAB
     Dosage: SOLUTION FOR INJECTION
     Route: 050
  274. ENTYVIO [Suspect]
     Active Substance: VEDOLIZUMAB
     Dosage: SOLUTION FOR INJECTION
     Route: 050
  275. ENTYVIO [Suspect]
     Active Substance: VEDOLIZUMAB
     Dosage: SOLUTION FOR INJECTION
     Route: 050
  276. ENTYVIO [Suspect]
     Active Substance: VEDOLIZUMAB
     Dosage: SOLUTION FOR INJECTION
     Route: 050
  277. ENTYVIO [Suspect]
     Active Substance: VEDOLIZUMAB
     Dosage: SOLUTION FOR INJECTION
     Route: 050
  278. ENTYVIO [Suspect]
     Active Substance: VEDOLIZUMAB
     Dosage: SOLUTION FOR INJECTION
     Route: 050
  279. ENTYVIO [Suspect]
     Active Substance: VEDOLIZUMAB
     Dosage: SOLUTION FOR INJECTION
     Route: 050
  280. ENTYVIO [Suspect]
     Active Substance: VEDOLIZUMAB
     Dosage: UNK, SINGLE DOSE PEN
     Route: 050
  281. ENTYVIO [Suspect]
     Active Substance: VEDOLIZUMAB
     Dosage: UNK
  282. ENTYVIO [Suspect]
     Active Substance: VEDOLIZUMAB
     Dosage: UNK
  283. ENTYVIO [Suspect]
     Active Substance: VEDOLIZUMAB
     Dosage: UNK (SINGLE DOSE PEN)
     Route: 050
  284. ENTYVIO [Suspect]
     Active Substance: VEDOLIZUMAB
     Dosage: UNK
     Route: 065
  285. ENTYVIO [Suspect]
     Active Substance: VEDOLIZUMAB
     Dosage: SOLUTION FOR INJECTION
     Route: 065
  286. ENTYVIO [Suspect]
     Active Substance: VEDOLIZUMAB
     Dosage: UNK (SINGLE DOSE PEN)
  287. ENTYVIO [Suspect]
     Active Substance: VEDOLIZUMAB
     Dosage: UNK
  288. ENTYVIO [Suspect]
     Active Substance: VEDOLIZUMAB
     Dosage: SOLUTION FOR INJECTION
  289. ENTYVIO [Suspect]
     Active Substance: VEDOLIZUMAB
     Dosage: UNK (SINGLE DOSE PEN)
  290. ENTYVIO [Suspect]
     Active Substance: VEDOLIZUMAB
     Dosage: UNK
  291. ENTYVIO [Suspect]
     Active Substance: VEDOLIZUMAB
     Dosage: SOLUTION FOR INJECTION
  292. ENTYVIO [Suspect]
     Active Substance: VEDOLIZUMAB
     Indication: Crohn^s disease
     Dosage: UNK
  293. ENTYVIO [Suspect]
     Active Substance: VEDOLIZUMAB
     Dosage: UNK
  294. ENTYVIO [Suspect]
     Active Substance: VEDOLIZUMAB
     Dosage: UNK
  295. ENTYVIO [Suspect]
     Active Substance: VEDOLIZUMAB
     Dosage: UNK
  296. ENTYVIO [Suspect]
     Active Substance: VEDOLIZUMAB
     Indication: Crohn^s disease
     Dosage: UNK, SINGLE DOSE PEN (OROMUCOSAL SUSPENSION)
     Route: 050
  297. ENTYVIO [Suspect]
     Active Substance: VEDOLIZUMAB
     Indication: Crohn^s disease
     Dosage: UNK, SINGLE DOSE PEN (OROMUCOSAL SUSPENSION)
     Route: 050
  298. ENTYVIO [Suspect]
     Active Substance: VEDOLIZUMAB
     Dosage: UNK, SINGLE DOSE PEN (OROMUCOSAL SUSPENSION)
     Route: 050
  299. ENTYVIO [Suspect]
     Active Substance: VEDOLIZUMAB
     Dosage: UNK, SINGLE DOSE PEN (OROMUCOSAL SUSPENSION)
     Route: 050
  300. ENTYVIO [Suspect]
     Active Substance: VEDOLIZUMAB
     Dosage: UNK, SINGLE DOSE PEN (OROMUCOSAL SUSPENSION)
     Route: 050
  301. ENTYVIO [Suspect]
     Active Substance: VEDOLIZUMAB
     Dosage: UNK, SINGLE DOSE PEN (OROMUCOSAL SUSPENSION)
     Route: 050
  302. ENTYVIO [Suspect]
     Active Substance: VEDOLIZUMAB
     Dosage: UNK, SINGLE DOSE PEN (OROMUCOSAL SUSPENSION)
     Route: 050
  303. ENTYVIO [Suspect]
     Active Substance: VEDOLIZUMAB
     Dosage: UNK, SINGLE DOSE PEN (OROMUCOSAL SUSPENSION)
     Route: 050
  304. ENTYVIO [Suspect]
     Active Substance: VEDOLIZUMAB
     Dosage: UNK, SINGLE DOSE PEN (OROMUCOSAL SUSPENSION)
     Route: 050
  305. ENTYVIO [Suspect]
     Active Substance: VEDOLIZUMAB
     Dosage: UNK, SINGLE DOSE PEN (OROMUCOSAL SUSPENSION)
     Route: 050
  306. ENTYVIO [Suspect]
     Active Substance: VEDOLIZUMAB
     Dosage: DOSE FORM: 231
  307. ENTYVIO [Suspect]
     Active Substance: VEDOLIZUMAB
     Dosage: UNK; ADDITIONAL INFO: ROUTE:OTHER
     Route: 050
  308. ENTYVIO [Suspect]
     Active Substance: VEDOLIZUMAB
     Dosage: SOLUTION FOR INJECTION (ADALIMUMAB SOLUTION FOR INJECTION, SINGLE DOSE PEN)
     Route: 065
  309. ENTYVIO [Suspect]
     Active Substance: VEDOLIZUMAB
     Dosage: SOLUTION FOR INJECTION (ADALIMUMAB SOLUTION FOR INJECTION, SINGLE DOSE PEN)
     Route: 065
  310. ENTYVIO [Suspect]
     Active Substance: VEDOLIZUMAB
     Dosage: SOLUTION FOR INJECTION (ADALIMUMAB SOLUTION FOR INJECTION, SINGLE DOSE PEN)
     Route: 065
  311. ENTYVIO [Suspect]
     Active Substance: VEDOLIZUMAB
     Dosage: SOLUTION FOR INJECTION (ADALIMUMAB SOLUTION FOR INJECTION, SINGLE DOSE PEN)
     Route: 065
  312. ENTYVIO [Suspect]
     Active Substance: VEDOLIZUMAB
     Dosage: SOLUTION FOR INJECTION (ADALIMUMAB SOLUTION FOR INJECTION, SINGLE DOSE PEN)
     Route: 065
  313. ENTYVIO [Suspect]
     Active Substance: VEDOLIZUMAB
     Dosage: SOLUTION FOR INJECTION (ADALIMUMAB SOLUTION FOR INJECTION, SINGLE DOSE PEN)
     Route: 065
  314. ENTYVIO [Suspect]
     Active Substance: VEDOLIZUMAB
     Dosage: SOLUTION FOR INJECTION (ADALIMUMAB SOLUTION FOR INJECTION, SINGLE DOSE PEN)
     Route: 065
  315. ENTYVIO [Suspect]
     Active Substance: VEDOLIZUMAB
     Dosage: SOLUTION FOR INJECTION (ADALIMUMAB SOLUTION FOR INJECTION, SINGLE DOSE PEN)
     Route: 065
  316. ENTYVIO [Suspect]
     Active Substance: VEDOLIZUMAB
     Dosage: SOLUTION FOR INJECTION (ADALIMUMAB SOLUTION FOR INJECTION, SINGLE DOSE PEN)
     Route: 065
  317. ENTYVIO [Suspect]
     Active Substance: VEDOLIZUMAB
     Dosage: SOLUTION FOR INJECTION (ADALIMUMAB SOLUTION FOR INJECTION, SINGLE DOSE PEN)
     Route: 065
  318. ENTYVIO [Suspect]
     Active Substance: VEDOLIZUMAB
     Dosage: SOLUTION FOR INJECTION (ADALIMUMAB SOLUTION FOR INJECTION, SINGLE DOSE PEN)
     Route: 065
  319. ENTYVIO [Suspect]
     Active Substance: VEDOLIZUMAB
     Dosage: SOLUTION FOR INJECTION (ADALIMUMAB SOLUTION FOR INJECTION, SINGLE DOSE PEN)
     Route: 065
  320. ENTYVIO [Suspect]
     Active Substance: VEDOLIZUMAB
     Dosage: SOLUTION FOR INJECTION
     Route: 065
  321. ENTYVIO [Suspect]
     Active Substance: VEDOLIZUMAB
     Dosage: UNK, SINGLE DOSE PEN (OROMUCOSAL SUSPENSION)
     Route: 050
  322. ENTYVIO [Suspect]
     Active Substance: VEDOLIZUMAB
     Dosage: UNK, SINGLE DOSE PEN (OROMUCOSAL SUSPENSION)
     Route: 050
  323. ENTYVIO [Suspect]
     Active Substance: VEDOLIZUMAB
     Dosage: UNK, SINGLE DOSE PEN (OROMUCOSAL SUSPENSION)
     Route: 050
  324. ENTYVIO [Suspect]
     Active Substance: VEDOLIZUMAB
     Dosage: UNK, SINGLE DOSE PEN (OROMUCOSAL SUSPENSION)
     Route: 050
  325. ENTYVIO [Suspect]
     Active Substance: VEDOLIZUMAB
     Dosage: UNK, SINGLE DOSE PEN (OROMUCOSAL SUSPENSION)
     Route: 050
  326. ENTYVIO [Suspect]
     Active Substance: VEDOLIZUMAB
     Dosage: UNK, SINGLE DOSE PEN (OROMUCOSAL SUSPENSION)
     Route: 050
  327. ENTYVIO [Suspect]
     Active Substance: VEDOLIZUMAB
     Dosage: UNK, SINGLE DOSE PEN (OROMUCOSAL SUSPENSION)
     Route: 050
  328. ENTYVIO [Suspect]
     Active Substance: VEDOLIZUMAB
     Dosage: UNK, SINGLE DOSE PEN (OROMUCOSAL SUSPENSION)
     Route: 050
  329. ENTYVIO [Suspect]
     Active Substance: VEDOLIZUMAB
     Dosage: UNK, SINGLE DOSE PEN (OROMUCOSAL SUSPENSION)
     Route: 050
  330. ENTYVIO [Suspect]
     Active Substance: VEDOLIZUMAB
     Dosage: UNK, SINGLE DOSE PEN (OROMUCOSAL SUSPENSION)
     Route: 050
  331. ENTYVIO [Suspect]
     Active Substance: VEDOLIZUMAB
     Dosage: UNK, SINGLE DOSE PEN (OROMUCOSAL SUSPENSION)
     Route: 050
  332. ENTYVIO [Suspect]
     Active Substance: VEDOLIZUMAB
     Dosage: UNK, SINGLE DOSE PEN (OROMUCOSAL SUSPENSION)
     Route: 050
  333. ENTYVIO [Suspect]
     Active Substance: VEDOLIZUMAB
     Dosage: UNK, SINGLE DOSE PEN (OROMUCOSAL SUSPENSION)
     Route: 050
  334. ENTYVIO [Suspect]
     Active Substance: VEDOLIZUMAB
     Dosage: UNK, SINGLE DOSE PEN (OROMUCOSAL SUSPENSION)
     Route: 050
  335. ENTYVIO [Suspect]
     Active Substance: VEDOLIZUMAB
     Dosage: UNK, SINGLE DOSE PEN (OROMUCOSAL SUSPENSION)
     Route: 050
  336. ENTYVIO [Suspect]
     Active Substance: VEDOLIZUMAB
     Dosage: UNK (ADALIMUMAB SOLUTION FOR INJECTION, SINGLE DOSE PEN)
     Route: 050
  337. ENTYVIO [Suspect]
     Active Substance: VEDOLIZUMAB
     Dosage: UNK (ADALIMUMAB SOLUTION FOR INJECTION, SINGLE DOSE PEN)
     Route: 050
  338. ENTYVIO [Suspect]
     Active Substance: VEDOLIZUMAB
     Dosage: UNK (ADALIMUMAB SOLUTION FOR INJECTION, SINGLE DOSE PEN)
     Route: 050
  339. ENTYVIO [Suspect]
     Active Substance: VEDOLIZUMAB
     Dosage: UNK (ADALIMUMAB SOLUTION FOR INJECTION, SINGLE DOSE PEN)
     Route: 050
  340. ENTYVIO [Suspect]
     Active Substance: VEDOLIZUMAB
     Dosage: UNK (ADALIMUMAB SOLUTION FOR INJECTION, SINGLE DOSE PEN)
     Route: 050
  341. ENTYVIO [Suspect]
     Active Substance: VEDOLIZUMAB
     Dosage: UNK (ADALIMUMAB SOLUTION FOR INJECTION, SINGLE DOSE PEN)
     Route: 050
  342. ENTYVIO [Suspect]
     Active Substance: VEDOLIZUMAB
     Dosage: UNK (SINGLE DOSE PEN) (ADALIMUMAB SOLUTION FOR INJECTION, SINGLE DOSE PEN)
     Route: 065
  343. ENTYVIO [Suspect]
     Active Substance: VEDOLIZUMAB
     Dosage: UNK OTHER (ADALIMUMAB SOLUTION FOR INJECTION, SINGLE DOSE PEN)
     Route: 065
  344. ENTYVIO [Suspect]
     Active Substance: VEDOLIZUMAB
     Indication: Crohn^s disease
     Dosage: UNK OTHER
     Route: 065
  345. ENTYVIO [Suspect]
     Active Substance: VEDOLIZUMAB
     Indication: Crohn^s disease
     Dosage: UNK OTHER
     Route: 065
  346. ENTYVIO [Suspect]
     Active Substance: VEDOLIZUMAB
     Dosage: UNK OTHER
     Route: 065
  347. ENTYVIO [Suspect]
     Active Substance: VEDOLIZUMAB
     Dosage: UNK OTHER
     Route: 065
  348. ENTYVIO [Suspect]
     Active Substance: VEDOLIZUMAB
     Dosage: UNK (SINGLE DOSE PEN)
     Route: 065
  349. ENTYVIO [Suspect]
     Active Substance: VEDOLIZUMAB
     Dosage: UNK
     Route: 050
  350. ENTYVIO [Suspect]
     Active Substance: VEDOLIZUMAB
     Dosage: UNK
     Route: 050
  351. ENTYVIO [Suspect]
     Active Substance: VEDOLIZUMAB
     Dosage: UNK
     Route: 050
  352. ENTYVIO [Suspect]
     Active Substance: VEDOLIZUMAB
     Dosage: UNK
     Route: 050
  353. ENTYVIO [Suspect]
     Active Substance: VEDOLIZUMAB
     Dosage: UNK
     Route: 050
  354. ENTYVIO [Suspect]
     Active Substance: VEDOLIZUMAB
     Dosage: UNK
     Route: 050
  355. ENTYVIO [Suspect]
     Active Substance: VEDOLIZUMAB
     Dosage: SINGLE DOSE PEN; ;
     Route: 050
  356. ENTYVIO [Suspect]
     Active Substance: VEDOLIZUMAB
     Dosage: UNK
     Route: 050
  357. ENTYVIO [Suspect]
     Active Substance: VEDOLIZUMAB
     Dosage: UNK, SINGLE DOSE PEN
     Route: 065
  358. ENTYVIO [Suspect]
     Active Substance: VEDOLIZUMAB
     Dosage: UNK
     Route: 065
  359. ENTYVIO [Suspect]
     Active Substance: VEDOLIZUMAB
     Dosage: UNK
     Route: 065
  360. ENTYVIO [Suspect]
     Active Substance: VEDOLIZUMAB
     Dosage: UNK
     Route: 065
  361. ENTYVIO [Suspect]
     Active Substance: VEDOLIZUMAB
     Dosage: UNK
     Route: 065
  362. ENTYVIO [Suspect]
     Active Substance: VEDOLIZUMAB
     Dosage: UNK
     Route: 065
  363. ENTYVIO [Suspect]
     Active Substance: VEDOLIZUMAB
     Dosage: UNK
     Route: 065
  364. ENTYVIO [Suspect]
     Active Substance: VEDOLIZUMAB
     Dosage: UNK
     Route: 065
  365. ENTYVIO [Suspect]
     Active Substance: VEDOLIZUMAB
     Dosage: UNK
     Route: 065
  366. ENTYVIO [Suspect]
     Active Substance: VEDOLIZUMAB
     Dosage: UNK, SINGLE DOSE PEN
     Route: 050
  367. ENTYVIO [Suspect]
     Active Substance: VEDOLIZUMAB
     Dosage: UNK, SINGLE DOSE PEN
     Route: 050
  368. ENTYVIO [Suspect]
     Active Substance: VEDOLIZUMAB
     Dosage: UNK, SINGLE DOSE PEN
     Route: 050
  369. ENTYVIO [Suspect]
     Active Substance: VEDOLIZUMAB
     Dosage: UNK, SINGLE DOSE PEN
     Route: 050
  370. ENTYVIO [Suspect]
     Active Substance: VEDOLIZUMAB
     Dosage: UNK
  371. ENTYVIO [Suspect]
     Active Substance: VEDOLIZUMAB
     Dosage: UNK, SINGLE DOSE PEN
     Route: 050
  372. ENTYVIO [Suspect]
     Active Substance: VEDOLIZUMAB
     Dosage: UNK, SINGLE DOSE PEN
     Route: 050
  373. ENTYVIO [Suspect]
     Active Substance: VEDOLIZUMAB
     Dosage: UNK, SINGLE DOSE PEN
     Route: 050
  374. ENTYVIO [Suspect]
     Active Substance: VEDOLIZUMAB
     Dosage: UNK, SINGLE DOSE PEN
     Route: 050
  375. ENTYVIO [Suspect]
     Active Substance: VEDOLIZUMAB
     Dosage: UNK, SINGLE DOSE PEN
     Route: 050
  376. ENTYVIO [Suspect]
     Active Substance: VEDOLIZUMAB
     Dosage: UNK, SINGLE DOSE PEN
     Route: 050
  377. ENTYVIO [Suspect]
     Active Substance: VEDOLIZUMAB
     Dosage: UNK, SINGLE DOSE PEN
     Route: 050
  378. ENTYVIO [Suspect]
     Active Substance: VEDOLIZUMAB
     Dosage: UNK, SINGLE DOSE PEN
     Route: 050
  379. ENTYVIO [Suspect]
     Active Substance: VEDOLIZUMAB
     Dosage: UNK, SINGLE DOSE PEN
     Route: 050
  380. ENTYVIO [Suspect]
     Active Substance: VEDOLIZUMAB
     Dosage: UNK, SINGLE DOSE PEN
     Route: 050
  381. ENTYVIO [Suspect]
     Active Substance: VEDOLIZUMAB
     Dosage: UNK, SINGLE DOSE PEN
     Route: 050
  382. ENTYVIO [Suspect]
     Active Substance: VEDOLIZUMAB
     Dosage: UNK, SINGLE DOSE PEN
     Route: 050
  383. ENTYVIO [Suspect]
     Active Substance: VEDOLIZUMAB
     Dosage: UNK, SINGLE DOSE PEN
     Route: 050
  384. ENTYVIO [Suspect]
     Active Substance: VEDOLIZUMAB
     Dosage: UNK, SINGLE DOSE PEN
     Route: 050
  385. ENTYVIO [Suspect]
     Active Substance: VEDOLIZUMAB
     Dosage: UNK, SINGLE DOSE PEN
     Route: 050
  386. ENTYVIO [Suspect]
     Active Substance: VEDOLIZUMAB
     Dosage: UNK, SINGLE DOSE PEN
     Route: 050
  387. ENTYVIO [Suspect]
     Active Substance: VEDOLIZUMAB
     Dosage: UNK, SINGLE DOSE PEN
     Route: 050
  388. ENTYVIO [Suspect]
     Active Substance: VEDOLIZUMAB
     Dosage: UNK, SINGLE DOSE PEN
     Route: 050
  389. ENTYVIO [Suspect]
     Active Substance: VEDOLIZUMAB
     Dosage: UNKNOWN
     Route: 065
  390. ENTYVIO [Suspect]
     Active Substance: VEDOLIZUMAB
     Dosage: UNKNOWN
     Route: 065
  391. ENTYVIO [Suspect]
     Active Substance: VEDOLIZUMAB
     Dosage: UNKNOWN
     Route: 065
  392. ENTYVIO [Suspect]
     Active Substance: VEDOLIZUMAB
     Dosage: UNKNOWN
     Route: 065
  393. ENTYVIO [Suspect]
     Active Substance: VEDOLIZUMAB
     Dosage: UNKNOWN
     Route: 065
  394. ENTYVIO [Suspect]
     Active Substance: VEDOLIZUMAB
     Indication: Crohn^s disease
     Dosage: UNKNOWN, UNK, SINGLE DOSE PEN
     Route: 065
  395. ENTYVIO [Suspect]
     Active Substance: VEDOLIZUMAB
     Indication: Crohn^s disease
     Dosage: UNKNOWN, UNK, SINGLE DOSE PEN
     Route: 065
  396. ENTYVIO [Suspect]
     Active Substance: VEDOLIZUMAB
     Dosage: UNKNOWN, UNK, SINGLE DOSE PEN
     Route: 065
  397. ENTYVIO [Suspect]
     Active Substance: VEDOLIZUMAB
     Dosage: UNKNOWN, UNK, SINGLE DOSE PEN
     Route: 065
  398. ENTYVIO [Suspect]
     Active Substance: VEDOLIZUMAB
     Dosage: UNKNOWN, UNK, SINGLE DOSE PEN
     Route: 065
  399. ENTYVIO [Suspect]
     Active Substance: VEDOLIZUMAB
     Dosage: UNKNOWN, UNK, SINGLE DOSE PEN
     Route: 065
  400. ENTYVIO [Suspect]
     Active Substance: VEDOLIZUMAB
     Dosage: UNKNOWN, UNK, SINGLE DOSE PEN
     Route: 065
  401. ENTYVIO [Suspect]
     Active Substance: VEDOLIZUMAB
     Dosage: UNKNOWN, UNK, SINGLE DOSE PEN
     Route: 065
  402. ENTYVIO [Suspect]
     Active Substance: VEDOLIZUMAB
     Dosage: UNKNOWN, UNK, SINGLE DOSE PEN
     Route: 065
  403. ENTYVIO [Suspect]
     Active Substance: VEDOLIZUMAB
     Dosage: UNKNOWN, UNK, SINGLE DOSE PEN
     Route: 065
  404. ENTYVIO [Suspect]
     Active Substance: VEDOLIZUMAB
     Dosage: UNKNOWN, UNK, SINGLE DOSE PEN
     Route: 065
  405. ENTYVIO [Suspect]
     Active Substance: VEDOLIZUMAB
     Dosage: UNKNOWN, UNK, SINGLE DOSE PEN
     Route: 065
  406. ENTYVIO [Suspect]
     Active Substance: VEDOLIZUMAB
     Dosage: UNKNOWN, UNK, SINGLE DOSE PEN
     Route: 065
  407. ENTYVIO [Suspect]
     Active Substance: VEDOLIZUMAB
     Dosage: UNKNOWN, UNK, SINGLE DOSE PEN
     Route: 065
  408. ENTYVIO [Suspect]
     Active Substance: VEDOLIZUMAB
     Dosage: UNKNOWN, UNK, SINGLE DOSE PEN
     Route: 065
  409. ENTYVIO [Suspect]
     Active Substance: VEDOLIZUMAB
     Dosage: UNKNOWN, UNK, SINGLE DOSE PEN
     Route: 065
  410. ENTYVIO [Suspect]
     Active Substance: VEDOLIZUMAB
     Dosage: UNKNOWN, UNK, SINGLE DOSE PEN
     Route: 065
  411. ENTYVIO [Suspect]
     Active Substance: VEDOLIZUMAB
     Dosage: UNKNOWN, UNK, SINGLE DOSE PEN
     Route: 065
  412. ENTYVIO [Suspect]
     Active Substance: VEDOLIZUMAB
     Dosage: UNKNOWN, UNK, SINGLE DOSE PEN
     Route: 065
  413. ENTYVIO [Suspect]
     Active Substance: VEDOLIZUMAB
     Dosage: UNKNOWN, UNK, SINGLE DOSE PEN
     Route: 065
  414. ENTYVIO [Suspect]
     Active Substance: VEDOLIZUMAB
     Dosage: UNKNOWN, UNK, SINGLE DOSE PEN
     Route: 065
  415. ENTYVIO [Suspect]
     Active Substance: VEDOLIZUMAB
     Dosage: UNKNOWN, UNK, SINGLE DOSE PEN
     Route: 065
  416. ENTYVIO [Suspect]
     Active Substance: VEDOLIZUMAB
     Dosage: UNKNOWN, UNK, SINGLE DOSE PEN
     Route: 065
  417. ENTYVIO [Suspect]
     Active Substance: VEDOLIZUMAB
     Dosage: UNKNOWN, UNK, SINGLE DOSE PEN
     Route: 065
  418. ENTYVIO [Suspect]
     Active Substance: VEDOLIZUMAB
     Dosage: UNKNOWN, UNK, SINGLE DOSE PEN, ADDITIONAL INFORMATION ON DRUG (FREE TEXT): OROMUCOSAL SUSPENSION ADA
     Route: 050
  419. ENTYVIO [Suspect]
     Active Substance: VEDOLIZUMAB
     Dosage: UNKNOWN, UNK, SINGLE DOSE PEN, ADDITIONAL INFORMATION ON DRUG (FREE TEXT): OROMUCOSAL SUSPENSION ADA
     Route: 050
  420. ENTYVIO [Suspect]
     Active Substance: VEDOLIZUMAB
     Dosage: UNKNOWN, UNK, SINGLE DOSE PEN, ADDITIONAL INFORMATION ON DRUG (FREE TEXT): OROMUCOSAL SUSPENSION ADA
     Route: 050
  421. ENTYVIO [Suspect]
     Active Substance: VEDOLIZUMAB
     Dosage: UNKNOWN, UNK, SINGLE DOSE PEN, ADDITIONAL INFORMATION ON DRUG (FREE TEXT): OROMUCOSAL SUSPENSION ADA
     Route: 050
  422. ENTYVIO [Suspect]
     Active Substance: VEDOLIZUMAB
     Dosage: UNKNOWN, UNK, SINGLE DOSE PEN, ADDITIONAL INFORMATION ON DRUG (FREE TEXT): OROMUCOSAL SUSPENSION ADA
     Route: 050
  423. ENTYVIO [Suspect]
     Active Substance: VEDOLIZUMAB
     Dosage: UNKNOWN, UNK, SINGLE DOSE PEN, ADDITIONAL INFORMATION ON DRUG (FREE TEXT): OROMUCOSAL SUSPENSION ADA
     Route: 050
  424. ENTYVIO [Suspect]
     Active Substance: VEDOLIZUMAB
     Dosage: UNKNOWN, UNK, SINGLE DOSE PEN, ADDITIONAL INFORMATION ON DRUG (FREE TEXT): OROMUCOSAL SUSPENSION ADA
     Route: 050
  425. ENTYVIO [Suspect]
     Active Substance: VEDOLIZUMAB
     Dosage: UNKNOWN, UNK, SINGLE DOSE PEN, ADDITIONAL INFORMATION ON DRUG (FREE TEXT): OROMUCOSAL SUSPENSION ADA
     Route: 050
  426. ENTYVIO [Suspect]
     Active Substance: VEDOLIZUMAB
     Dosage: UNKNOWN, UNK, SINGLE DOSE PEN, ADDITIONAL INFORMATION ON DRUG (FREE TEXT): OROMUCOSAL SUSPENSION ADA
     Route: 050
  427. ENTYVIO [Suspect]
     Active Substance: VEDOLIZUMAB
     Dosage: UNKNOWN, UNK, SINGLE DOSE PEN, ADDITIONAL INFORMATION ON DRUG (FREE TEXT): OROMUCOSAL SUSPENSION ADA
     Route: 050
  428. ENTYVIO [Suspect]
     Active Substance: VEDOLIZUMAB
     Dosage: UNKNOWN, UNK, SINGLE DOSE PEN, ADDITIONAL INFORMATION ON DRUG (FREE TEXT): OROMUCOSAL SUSPENSION ADA
     Route: 050
  429. ENTYVIO [Suspect]
     Active Substance: VEDOLIZUMAB
     Dosage: UNKNOWN, UNK, SINGLE DOSE PEN, ADDITIONAL INFORMATION ON DRUG (FREE TEXT): OROMUCOSAL SUSPENSION ADA
     Route: 050
  430. ENTYVIO [Suspect]
     Active Substance: VEDOLIZUMAB
     Dosage: UNK, SINGLE DOSE PEN, ADDITIONAL INFORMATION ON DRUG (FREE TEXT): OROMUCOSAL SUSPENSION ADALIMUMAB S
     Route: 050
  431. ENTYVIO [Suspect]
     Active Substance: VEDOLIZUMAB
     Dosage: UNK, SINGLE DOSE PEN, ADDITIONAL INFORMATION ON DRUG (FREE TEXT): OROMUCOSAL SUSPENSION ADALIMUMAB S
     Route: 050
  432. ENTYVIO [Suspect]
     Active Substance: VEDOLIZUMAB
     Dosage: UNK, SINGLE DOSE PEN, ADDITIONAL INFORMATION ON DRUG (FREE TEXT): OROMUCOSAL SUSPENSION ADALIMUMAB S
     Route: 050
  433. ENTYVIO [Suspect]
     Active Substance: VEDOLIZUMAB
     Dosage: UNK, SINGLE DOSE PEN, ADDITIONAL INFORMATION ON DRUG (FREE TEXT): OROMUCOSAL SUSPENSION ADALIMUMAB S
     Route: 050
  434. ENTYVIO [Suspect]
     Active Substance: VEDOLIZUMAB
     Dosage: UNK, SINGLE DOSE PEN, ADDITIONAL INFORMATION ON DRUG (FREE TEXT): OROMUCOSAL SUSPENSION ADALIMUMAB S
     Route: 050
  435. ENTYVIO [Suspect]
     Active Substance: VEDOLIZUMAB
     Dosage: UNK, SINGLE DOSE PEN, ADDITIONAL INFORMATION ON DRUG (FREE TEXT): OROMUCOSAL SUSPENSION ADALIMUMAB S
     Route: 050
  436. ENTYVIO [Suspect]
     Active Substance: VEDOLIZUMAB
     Dosage: UNK, SINGLE DOSE PEN, ADDITIONAL INFORMATION ON DRUG (FREE TEXT): OROMUCOSAL SUSPENSION ADALIMUMAB S
     Route: 050
  437. ENTYVIO [Suspect]
     Active Substance: VEDOLIZUMAB
     Dosage: UNK, SINGLE DOSE PEN, ADDITIONAL INFORMATION ON DRUG (FREE TEXT): OROMUCOSAL SUSPENSION ADALIMUMAB S
     Route: 050
  438. ENTYVIO [Suspect]
     Active Substance: VEDOLIZUMAB
     Dosage: UNK, SINGLE DOSE PEN, ADDITIONAL INFORMATION ON DRUG (FREE TEXT): OROMUCOSAL SUSPENSION ADALIMUMAB S
     Route: 050
  439. ENTYVIO [Suspect]
     Active Substance: VEDOLIZUMAB
     Dosage: UNK, SINGLE DOSE PEN, ADDITIONAL INFORMATION ON DRUG (FREE TEXT): OROMUCOSAL SUSPENSION ADALIMUMAB S
     Route: 050
  440. ENTYVIO [Suspect]
     Active Substance: VEDOLIZUMAB
     Dosage: UNK, SINGLE DOSE PEN, ADDITIONAL INFORMATION ON DRUG (FREE TEXT): OROMUCOSAL SUSPENSION ADALIMUMAB S
     Route: 050
  441. ENTYVIO [Suspect]
     Active Substance: VEDOLIZUMAB
     Dosage: UNK, SINGLE DOSE PEN, ADDITIONAL INFORMATION ON DRUG (FREE TEXT): OROMUCOSAL SUSPENSION ADALIMUMAB S
     Route: 050
  442. ENTYVIO [Suspect]
     Active Substance: VEDOLIZUMAB
     Dosage: UNK, SINGLE DOSE PEN, ADDITIONAL INFORMATION ON DRUG (FREE TEXT): OROMUCOSAL SUSPENSION ADALIMUMAB S
     Route: 050
  443. ENTYVIO [Suspect]
     Active Substance: VEDOLIZUMAB
     Indication: Crohn^s disease
     Dosage: UNKNOWN, UNK, SINGLE DOSE PEN
     Route: 065
  444. ENTYVIO [Suspect]
     Active Substance: VEDOLIZUMAB
     Indication: Crohn^s disease
     Dosage: UNKNOWN, UNK, SINGLE DOSE PEN
     Route: 065
  445. ENTYVIO [Suspect]
     Active Substance: VEDOLIZUMAB
     Dosage: UNKNOWN, UNK, SINGLE DOSE PEN
     Route: 065
  446. ENTYVIO [Suspect]
     Active Substance: VEDOLIZUMAB
     Dosage: UNKNOWN, UNK, SINGLE DOSE PEN
     Route: 065
  447. ENTYVIO [Suspect]
     Active Substance: VEDOLIZUMAB
     Dosage: UNKNOWN, UNK, SINGLE DOSE PEN
     Route: 065
  448. ENTYVIO [Suspect]
     Active Substance: VEDOLIZUMAB
     Dosage: UNKNOWN, UNK, SINGLE DOSE PEN
     Route: 065
  449. ENTYVIO [Suspect]
     Active Substance: VEDOLIZUMAB
     Dosage: UNKNOWN, UNK, SINGLE DOSE PEN
     Route: 065
  450. ENTYVIO [Suspect]
     Active Substance: VEDOLIZUMAB
     Dosage: UNKNOWN, UNK, SINGLE DOSE PEN
     Route: 065
  451. ENTYVIO [Suspect]
     Active Substance: VEDOLIZUMAB
     Dosage: UNKNOWN, UNK, SINGLE DOSE PEN
     Route: 065
  452. ENTYVIO [Suspect]
     Active Substance: VEDOLIZUMAB
     Dosage: UNKNOWN, UNK, SINGLE DOSE PEN
     Route: 065
  453. ENTYVIO [Suspect]
     Active Substance: VEDOLIZUMAB
     Dosage: UNKNOWN, UNK, SINGLE DOSE PEN
     Route: 065
  454. ENTYVIO [Suspect]
     Active Substance: VEDOLIZUMAB
     Dosage: UNKNOWN, UNK, SINGLE DOSE PEN
     Route: 065
  455. ENTYVIO [Suspect]
     Active Substance: VEDOLIZUMAB
     Dosage: UNKNOWN, UNK, SINGLE DOSE PEN
     Route: 065
  456. ENTYVIO [Suspect]
     Active Substance: VEDOLIZUMAB
     Dosage: UNKNOWN, UNK, SINGLE DOSE PEN
     Route: 065
  457. ENTYVIO [Suspect]
     Active Substance: VEDOLIZUMAB
     Dosage: UNKNOWN, UNK, SINGLE DOSE PEN
     Route: 065
  458. ENTYVIO [Suspect]
     Active Substance: VEDOLIZUMAB
     Dosage: UNKNOWN, UNK, SINGLE DOSE PEN
     Route: 065
  459. ENTYVIO [Suspect]
     Active Substance: VEDOLIZUMAB
     Dosage: UNKNOWN, UNK, SINGLE DOSE PEN
     Route: 065
  460. ENTYVIO [Suspect]
     Active Substance: VEDOLIZUMAB
     Dosage: UNKNOWN, UNK, SINGLE DOSE PEN
     Route: 065
  461. ENTYVIO [Suspect]
     Active Substance: VEDOLIZUMAB
     Dosage: UNKNOWN, UNK, SINGLE DOSE PEN
     Route: 065
  462. ENTYVIO [Suspect]
     Active Substance: VEDOLIZUMAB
     Dosage: UNKNOWN, UNK, SINGLE DOSE PEN
     Route: 065
  463. ENTYVIO [Suspect]
     Active Substance: VEDOLIZUMAB
     Dosage: UNKNOWN, UNK, SINGLE DOSE PEN
     Route: 065
  464. ENTYVIO [Suspect]
     Active Substance: VEDOLIZUMAB
     Dosage: UNKNOWN, UNK, SINGLE DOSE PEN
     Route: 065
  465. ENTYVIO [Suspect]
     Active Substance: VEDOLIZUMAB
     Dosage: UNKNOWN, UNK, SINGLE DOSE PEN
     Route: 065
  466. ENTYVIO [Suspect]
     Active Substance: VEDOLIZUMAB
     Dosage: UNK, ADDITIONAL INFORMATION ON DRUG (FREE TEXT):ADALIMUMAB SOLUTION FOR INJECTION, SINGLE DOSE PEN
  467. RIFAXIMIN [Suspect]
     Active Substance: RIFAXIMIN
     Indication: Product used for unknown indication
     Dosage: UNK
  468. RIFAXIMIN [Suspect]
     Active Substance: RIFAXIMIN
     Dosage: FILM COATED TABLET
  469. INFLIXIMAB [Suspect]
     Active Substance: INFLIXIMAB
     Indication: Crohn^s disease
     Dosage: UNK
     Route: 050
  470. INFLIXIMAB [Suspect]
     Active Substance: INFLIXIMAB
     Dosage: UNK
     Route: 050
  471. INFLIXIMAB [Suspect]
     Active Substance: INFLIXIMAB
     Dosage: UNK
     Route: 050
  472. INFLIXIMAB [Suspect]
     Active Substance: INFLIXIMAB
     Dosage: UNK
     Route: 050
  473. INFLIXIMAB [Suspect]
     Active Substance: INFLIXIMAB
     Dosage: UNK
     Route: 050
  474. INFLIXIMAB [Suspect]
     Active Substance: INFLIXIMAB
     Dosage: UNK
     Route: 050
  475. INFLIXIMAB [Suspect]
     Active Substance: INFLIXIMAB
     Dosage: UNK
     Route: 042
  476. INFLIXIMAB [Suspect]
     Active Substance: INFLIXIMAB
     Dosage: UNK
     Route: 042
  477. INFLIXIMAB [Suspect]
     Active Substance: INFLIXIMAB
     Dosage: UNK
     Route: 042
  478. INFLIXIMAB [Suspect]
     Active Substance: INFLIXIMAB
     Dosage: UNK
     Route: 042
  479. INFLIXIMAB [Suspect]
     Active Substance: INFLIXIMAB
     Dosage: UNK
     Route: 042
  480. INFLIXIMAB [Suspect]
     Active Substance: INFLIXIMAB
     Dosage: UNK
     Route: 042
  481. INFLIXIMAB [Suspect]
     Active Substance: INFLIXIMAB
     Dosage: UNK
     Route: 042
  482. INFLIXIMAB [Suspect]
     Active Substance: INFLIXIMAB
     Dosage: UNK
     Route: 042
  483. INFLIXIMAB [Suspect]
     Active Substance: INFLIXIMAB
     Dosage: UNK
     Route: 042
  484. INFLIXIMAB [Suspect]
     Active Substance: INFLIXIMAB
     Dosage: UNK
     Route: 042
  485. INFLIXIMAB [Suspect]
     Active Substance: INFLIXIMAB
     Dosage: UNK
     Route: 042
  486. INFLIXIMAB [Suspect]
     Active Substance: INFLIXIMAB
     Dosage: UNK
     Route: 042
  487. INFLIXIMAB [Suspect]
     Active Substance: INFLIXIMAB
     Dosage: UNK
     Route: 042
  488. INFLIXIMAB [Suspect]
     Active Substance: INFLIXIMAB
     Dosage: UNK
     Route: 042
  489. INFLIXIMAB [Suspect]
     Active Substance: INFLIXIMAB
     Dosage: UNK
     Route: 042
  490. INFLIXIMAB [Suspect]
     Active Substance: INFLIXIMAB
     Dosage: UNK
     Route: 042
  491. INFLIXIMAB [Suspect]
     Active Substance: INFLIXIMAB
     Dosage: UNK, OROMUCOSAL SPRAY
     Route: 042
  492. INFLIXIMAB [Suspect]
     Active Substance: INFLIXIMAB
     Dosage: UNK, OROMUCOSAL SPRAY
     Route: 042
  493. INFLIXIMAB [Suspect]
     Active Substance: INFLIXIMAB
     Dosage: UNK, OROMUCOSAL SPRAY
     Route: 042
  494. INFLIXIMAB [Suspect]
     Active Substance: INFLIXIMAB
     Indication: Crohn^s disease
     Dosage: UNK (ADDITIONAL INFORMATION ON DRUG (FREE TEXT): ADALIMUMAB SOLUTION FOR INJECTION, SINGLE DOSE PEN)
     Route: 042
  495. INFLIXIMAB [Suspect]
     Active Substance: INFLIXIMAB
     Dosage: UNK (ADDITIONAL INFORMATION ON DRUG (FREE TEXT): ADALIMUMAB SOLUTION FOR INJECTION, SINGLE DOSE PEN
     Route: 042
  496. INFLIXIMAB [Suspect]
     Active Substance: INFLIXIMAB
     Dosage: UNK (ADDITIONAL INFORMATION ON DRUG (FREE TEXT): ADALIMUMAB SOLUTION FOR INJECTION, SINGLE DOSE PEN)
     Route: 065
  497. INFLIXIMAB [Suspect]
     Active Substance: INFLIXIMAB
     Dosage: UNK (ADDITIONAL INFORMATION ON DRUG (FREE TEXT): ADALIMUMAB SOLUTION FOR INJECTION, SINGLE DOSE PEN
     Route: 042
  498. INFLIXIMAB [Suspect]
     Active Substance: INFLIXIMAB
     Dosage: UNK (ADDITIONAL INFORMATION ON DRUG (FREE TEXT): ADALIMUMAB SOLUTION FOR INJECTION, SINGLE DOSE PEN)
     Route: 065
  499. INFLIXIMAB [Suspect]
     Active Substance: INFLIXIMAB
     Dosage: UNK (ADDITIONAL INFORMATION ON DRUG (FREE TEXT): ADALIMUMAB SOLUTION FOR INJECTION, SINGLE DOSE PEN
     Route: 042
  500. INFLIXIMAB [Suspect]
     Active Substance: INFLIXIMAB
     Dosage: UNK (ADDITIONAL INFORMATION ON DRUG (FREE TEXT): ADALIMUMAB SOLUTION FOR INJECTION, SINGLE DOSE PEN)
     Route: 065
  501. INFLIXIMAB [Suspect]
     Active Substance: INFLIXIMAB
     Dosage: UNK (ADDITIONAL INFORMATION ON DRUG (FREE TEXT): ADALIMUMAB SOLUTION FOR INJECTION, SINGLE DOSE PEN)
     Route: 065
  502. INFLIXIMAB [Suspect]
     Active Substance: INFLIXIMAB
     Dosage: UNK (ADDITIONAL INFORMATION ON DRUG (FREE TEXT): ADALIMUMAB SOLUTION FOR INJECTION, SINGLE DOSE PEN)
     Route: 065
  503. INFLIXIMAB [Suspect]
     Active Substance: INFLIXIMAB
     Dosage: UNK (ADDITIONAL INFORMATION ON DRUG (FREE TEXT): ADALIMUMAB SOLUTION FOR INJECTION, SINGLE DOSE PEN)
     Route: 065
  504. INFLIXIMAB [Suspect]
     Active Substance: INFLIXIMAB
     Dosage: UNK (ADDITIONAL INFORMATION ON DRUG (FREE TEXT): ADALIMUMAB SOLUTION FOR INJECTION, SINGLE DOSE PEN)
     Route: 065
  505. INFLIXIMAB [Suspect]
     Active Substance: INFLIXIMAB
     Dosage: UNK (ADDITIONAL INFORMATION ON DRUG (FREE TEXT): ADALIMUMAB SOLUTION FOR INJECTION, SINGLE DOSE PEN)
     Route: 065
  506. INFLIXIMAB [Suspect]
     Active Substance: INFLIXIMAB
     Dosage: UNK (ADDITIONAL INFORMATION ON DRUG (FREE TEXT): ADALIMUMAB SOLUTION FOR INJECTION, SINGLE DOSE PEN)
     Route: 065
  507. INFLIXIMAB [Suspect]
     Active Substance: INFLIXIMAB
     Dosage: UNK (ADDITIONAL INFORMATION ON DRUG (FREE TEXT): ADALIMUMAB SOLUTION FOR INJECTION, SINGLE DOSE PEN)
     Route: 065
  508. INFLIXIMAB [Suspect]
     Active Substance: INFLIXIMAB
     Dosage: UNK (ADDITIONAL INFORMATION ON DRUG (FREE TEXT): ADALIMUMAB SOLUTION FOR INJECTION, SINGLE DOSE PEN)
     Route: 065
  509. INFLIXIMAB [Suspect]
     Active Substance: INFLIXIMAB
     Dosage: UNK (ADDITIONAL INFORMATION ON DRUG (FREE TEXT): ADALIMUMAB SOLUTION FOR INJECTION, SINGLE DOSE PEN)
     Route: 065
  510. INFLIXIMAB [Suspect]
     Active Substance: INFLIXIMAB
     Dosage: UNK (ADDITIONAL INFORMATION ON DRUG (FREE TEXT): ADALIMUMAB SOLUTION FOR INJECTION, SINGLE DOSE PEN)
     Route: 065
  511. INFLIXIMAB [Suspect]
     Active Substance: INFLIXIMAB
     Dosage: UNK (ADDITIONAL INFORMATION ON DRUG (FREE TEXT): ADALIMUMAB SOLUTION FOR INJECTION, SINGLE DOSE PEN)
     Route: 065
  512. INFLIXIMAB [Suspect]
     Active Substance: INFLIXIMAB
     Dosage: UNK (ADDITIONAL INFORMATION ON DRUG (FREE TEXT): ADALIMUMAB SOLUTION FOR INJECTION, SINGLE DOSE PEN)
     Route: 065
  513. INFLIXIMAB [Suspect]
     Active Substance: INFLIXIMAB
     Dosage: UNK (ADDITIONAL INFORMATION ON DRUG (FREE TEXT): ADALIMUMAB SOLUTION FOR INJECTION, SINGLE DOSE PEN)
     Route: 065
  514. INFLIXIMAB [Suspect]
     Active Substance: INFLIXIMAB
     Dosage: UNK (ADDITIONAL INFORMATION ON DRUG (FREE TEXT): ADALIMUMAB SOLUTION FOR INJECTION, SINGLE DOSE PEN)
     Route: 065
  515. INFLIXIMAB [Suspect]
     Active Substance: INFLIXIMAB
     Dosage: UNK (ADDITIONAL INFORMATION ON DRUG (FREE TEXT): ADALIMUMAB SOLUTION FOR INJECTION, SINGLE DOSE PEN)
     Route: 065
  516. INFLIXIMAB [Suspect]
     Active Substance: INFLIXIMAB
     Dosage: UNK (ADDITIONAL INFORMATION ON DRUG (FREE TEXT): ADALIMUMAB SOLUTION FOR INJECTION, SINGLE DOSE PEN)
     Route: 065
  517. INFLIXIMAB [Suspect]
     Active Substance: INFLIXIMAB
     Dosage: UNK (ADDITIONAL INFORMATION ON DRUG (FREE TEXT): ADALIMUMAB SOLUTION FOR INJECTION, SINGLE DOSE PEN)
     Route: 065
  518. INFLIXIMAB [Suspect]
     Active Substance: INFLIXIMAB
     Dosage: UNK (ADDITIONAL INFORMATION ON DRUG (FREE TEXT): ADALIMUMAB SOLUTION FOR INJECTION, SINGLE DOSE PEN)
     Route: 065
  519. INFLIXIMAB [Suspect]
     Active Substance: INFLIXIMAB
     Dosage: UNK (ADDITIONAL INFORMATION ON DRUG (FREE TEXT): ADALIMUMAB SOLUTION FOR INJECTION, SINGLE DOSE PEN)
     Route: 065
  520. INFLIXIMAB [Suspect]
     Active Substance: INFLIXIMAB
     Dosage: UNK (ADDITIONAL INFORMATION ON DRUG (FREE TEXT): ADALIMUMAB SOLUTION FOR INJECTION, SINGLE DOSE PEN)
     Route: 065
  521. METHOTREXATE SODIUM [Suspect]
     Active Substance: METHOTREXATE SODIUM
     Indication: Product used for unknown indication
     Dosage: UNK; ;ADDITIONAL INFO: ROUTE:OTHER, UNK; ;
     Route: 065
  522. METHOTREXATE SODIUM [Suspect]
     Active Substance: METHOTREXATE SODIUM
     Dosage: UNK; ;ADDITIONAL INFO: ROUTE:OTHER, UNK; ;
     Route: 065
  523. METHOTREXATE SODIUM [Suspect]
     Active Substance: METHOTREXATE SODIUM
     Dosage: UNK; ADDITIONAL INFO: ROUTE:OTHER, UNK; ;
     Route: 065
  524. METHOTREXATE SODIUM [Suspect]
     Active Substance: METHOTREXATE SODIUM
     Dosage: UNK UNK, UNK
     Route: 065
  525. METHOTREXATE SODIUM [Suspect]
     Active Substance: METHOTREXATE SODIUM
     Dosage: UNKNOWN; OTHER
     Route: 050
  526. METHOTREXATE SODIUM [Suspect]
     Active Substance: METHOTREXATE SODIUM
     Dosage: UNKNOWN; OTHER
     Route: 050
  527. METHOTREXATE SODIUM [Suspect]
     Active Substance: METHOTREXATE SODIUM
     Dosage: UNKNOWN; OTHER
     Route: 050
  528. METHOTREXATE SODIUM [Suspect]
     Active Substance: METHOTREXATE SODIUM
     Dosage: UNK
     Route: 050
     Dates: start: 20211112
  529. METHOTREXATE SODIUM [Suspect]
     Active Substance: METHOTREXATE SODIUM
     Dosage: UNK UNK, UNK
     Route: 065
  530. METHOTREXATE SODIUM [Suspect]
     Active Substance: METHOTREXATE SODIUM
     Dosage: UNKNOWN (ADALIMUMAB SOLUTION FOR INJECTION, SINGLE DOSE PEN)
     Route: 050
  531. METHOTREXATE SODIUM [Suspect]
     Active Substance: METHOTREXATE SODIUM
     Dosage: UNKNOWN (ADALIMUMAB SOLUTION FOR INJECTION, SINGLE DOSE PEN)
     Route: 050
  532. METHOTREXATE SODIUM [Suspect]
     Active Substance: METHOTREXATE SODIUM
     Dosage: UNK, ADALIMUMAB SOLUTION FOR INJECTION, SINGLE DOSE PEN
     Route: 050
  533. METHOTREXATE SODIUM [Suspect]
     Active Substance: METHOTREXATE SODIUM
     Dosage: UNK
     Route: 065
     Dates: start: 20211211
  534. METHOTREXATE SODIUM [Suspect]
     Active Substance: METHOTREXATE SODIUM
     Dosage: UNK (ADALIMUMAB SOLUTION FOR INJECTION, SINGLE DOSE PEN)
     Route: 050
  535. METHOTREXATE SODIUM [Suspect]
     Active Substance: METHOTREXATE SODIUM
     Dosage: UNK UNK, UNK
     Route: 065
  536. METHOTREXATE SODIUM [Suspect]
     Active Substance: METHOTREXATE SODIUM
     Dosage: UNK UNK, UNK
     Route: 065
  537. METHOTREXATE SODIUM [Suspect]
     Active Substance: METHOTREXATE SODIUM
     Dosage: UNK UNK, UNK
     Route: 065
  538. METHOTREXATE SODIUM [Suspect]
     Active Substance: METHOTREXATE SODIUM
     Dosage: UNK UNK, UNK
     Route: 065
  539. METHOTREXATE SODIUM [Suspect]
     Active Substance: METHOTREXATE SODIUM
     Dosage: UNKNOWN (ADALIMUMAB SOLUTION FOR INJECTION, SINGLE DOSE PEN)
     Route: 050
  540. METHOTREXATE SODIUM [Suspect]
     Active Substance: METHOTREXATE SODIUM
     Dosage: UNKNOWN (ADALIMUMAB SOLUTION FOR INJECTION, SINGLE DOSE PEN)
     Route: 050
  541. METHOTREXATE SODIUM [Suspect]
     Active Substance: METHOTREXATE SODIUM
     Dosage: UNK
     Route: 050
  542. METHOTREXATE SODIUM [Suspect]
     Active Substance: METHOTREXATE SODIUM
     Dosage: UNK
     Route: 050
  543. METHOTREXATE SODIUM [Suspect]
     Active Substance: METHOTREXATE SODIUM
     Dosage: UNK
     Route: 050
     Dates: start: 20211112
  544. METHOTREXATE SODIUM [Suspect]
     Active Substance: METHOTREXATE SODIUM
     Dosage: UNK
     Route: 050
  545. METHOTREXATE SODIUM [Suspect]
     Active Substance: METHOTREXATE SODIUM
     Dosage: UNK
     Route: 050
  546. METHOTREXATE SODIUM [Suspect]
     Active Substance: METHOTREXATE SODIUM
     Dosage: UNK
     Route: 050
  547. METHOTREXATE SODIUM [Suspect]
     Active Substance: METHOTREXATE SODIUM
     Dosage: UNK
     Route: 050
  548. METHOTREXATE SODIUM [Suspect]
     Active Substance: METHOTREXATE SODIUM
     Dosage: UNK
     Route: 050
  549. METHOTREXATE SODIUM [Suspect]
     Active Substance: METHOTREXATE SODIUM
     Dosage: UNK
     Route: 050
  550. METHOTREXATE SODIUM [Suspect]
     Active Substance: METHOTREXATE SODIUM
     Dosage: UNK
     Route: 050
  551. METHOTREXATE SODIUM [Suspect]
     Active Substance: METHOTREXATE SODIUM
     Dosage: UNKNOWN (ADALIMUMAB SOLUTION FOR INJECTION, SINGLE DOSE PEN)
     Route: 050
  552. METHOTREXATE SODIUM [Suspect]
     Active Substance: METHOTREXATE SODIUM
     Dosage: UNK; ;
     Route: 050
  553. METHOTREXATE SODIUM [Suspect]
     Active Substance: METHOTREXATE SODIUM
     Dosage: UNK
     Route: 050
  554. METHOTREXATE SODIUM [Suspect]
     Active Substance: METHOTREXATE SODIUM
     Dosage: UNK
     Route: 050
  555. METHOTREXATE SODIUM [Suspect]
     Active Substance: METHOTREXATE SODIUM
     Dosage: UNK
     Route: 050
  556. METHOTREXATE SODIUM [Suspect]
     Active Substance: METHOTREXATE SODIUM
     Dosage: UNK
     Route: 050
  557. METHOTREXATE SODIUM [Suspect]
     Active Substance: METHOTREXATE SODIUM
     Dosage: UNK
     Route: 050
  558. METHOTREXATE SODIUM [Suspect]
     Active Substance: METHOTREXATE SODIUM
     Dosage: UNK
     Route: 050
  559. METHOTREXATE SODIUM [Suspect]
     Active Substance: METHOTREXATE SODIUM
     Dosage: UNKNOWN (ADALIMUMAB SOLUTION FOR INJECTION, SINGLE DOSE PEN)
     Route: 050
  560. METHOTREXATE SODIUM [Suspect]
     Active Substance: METHOTREXATE SODIUM
     Dosage: UNKNOWN (ADALIMUMAB SOLUTION FOR INJECTION, SINGLE DOSE PEN)
     Route: 050
  561. METHOTREXATE SODIUM [Suspect]
     Active Substance: METHOTREXATE SODIUM
     Dosage: UNK UNK, UNK
     Route: 065
  562. METHOTREXATE SODIUM [Suspect]
     Active Substance: METHOTREXATE SODIUM
     Dosage: UNK UNK, UNK
     Route: 065
  563. METHOTREXATE SODIUM [Suspect]
     Active Substance: METHOTREXATE SODIUM
     Dosage: UNK UNK, UNK
     Route: 065
  564. METHOTREXATE SODIUM [Suspect]
     Active Substance: METHOTREXATE SODIUM
     Dosage: UNK UNK, UNK
     Route: 065
  565. METHOTREXATE SODIUM [Suspect]
     Active Substance: METHOTREXATE SODIUM
     Dosage: UNK UNK, UNK
     Route: 065
  566. METHOTREXATE SODIUM [Suspect]
     Active Substance: METHOTREXATE SODIUM
     Dosage: UNK UNK, UNK
     Route: 065
  567. METHOTREXATE SODIUM [Suspect]
     Active Substance: METHOTREXATE SODIUM
     Dosage: UNKNOWN (ADALIMUMAB SOLUTION FOR INJECTION, SINGLE DOSE PEN)
     Route: 050
  568. METHOTREXATE SODIUM [Suspect]
     Active Substance: METHOTREXATE SODIUM
     Dosage: UNKNOWN (ADALIMUMAB SOLUTION FOR INJECTION, SINGLE DOSE PEN)
     Route: 050
  569. METHOTREXATE SODIUM [Suspect]
     Active Substance: METHOTREXATE SODIUM
     Dosage: UNKNOWN (ADALIMUMAB SOLUTION FOR INJECTION, SINGLE DOSE PEN)
     Route: 050
  570. METHOTREXATE SODIUM [Suspect]
     Active Substance: METHOTREXATE SODIUM
     Dosage: UNKNOWN (ADALIMUMAB SOLUTION FOR INJECTION, SINGLE DOSE PEN)
     Route: 050
  571. METHOTREXATE SODIUM [Suspect]
     Active Substance: METHOTREXATE SODIUM
     Indication: Product used for unknown indication
     Dosage: UNK
     Route: 050
  572. METHOTREXATE SODIUM [Suspect]
     Active Substance: METHOTREXATE SODIUM
     Dosage: UNK
     Route: 050
  573. METHOTREXATE SODIUM [Suspect]
     Active Substance: METHOTREXATE SODIUM
     Dosage: UNK
     Route: 050
  574. METHOTREXATE SODIUM [Suspect]
     Active Substance: METHOTREXATE SODIUM
     Dosage: UNK, UNK, UNK
     Route: 050
  575. METHOTREXATE SODIUM [Suspect]
     Active Substance: METHOTREXATE SODIUM
     Dosage: UNK
     Route: 050
  576. METHOTREXATE SODIUM [Suspect]
     Active Substance: METHOTREXATE SODIUM
     Dosage: UNK
     Route: 050
  577. METHOTREXATE SODIUM [Suspect]
     Active Substance: METHOTREXATE SODIUM
     Dosage: UNK
     Route: 050
  578. METHOTREXATE SODIUM [Suspect]
     Active Substance: METHOTREXATE SODIUM
     Dosage: UNK
     Route: 050
  579. METHOTREXATE SODIUM [Suspect]
     Active Substance: METHOTREXATE SODIUM
     Dosage: UNK
     Route: 050
  580. METHOTREXATE SODIUM [Suspect]
     Active Substance: METHOTREXATE SODIUM
     Dosage: UNK
     Route: 050
  581. METHOTREXATE SODIUM [Suspect]
     Active Substance: METHOTREXATE SODIUM
     Dosage: UNK
     Route: 050
  582. METHOTREXATE SODIUM [Suspect]
     Active Substance: METHOTREXATE SODIUM
     Dosage: UNK
     Route: 050
  583. METHOTREXATE SODIUM [Suspect]
     Active Substance: METHOTREXATE SODIUM
     Dosage: UNK
     Route: 050
  584. METHOTREXATE SODIUM [Suspect]
     Active Substance: METHOTREXATE SODIUM
     Dosage: UNK
     Route: 050
  585. METHOTREXATE SODIUM [Suspect]
     Active Substance: METHOTREXATE SODIUM
     Dosage: UNK
     Route: 050
  586. METHOTREXATE SODIUM [Suspect]
     Active Substance: METHOTREXATE SODIUM
     Dosage: UNK
     Route: 050
  587. METHOTREXATE SODIUM [Suspect]
     Active Substance: METHOTREXATE SODIUM
     Dosage: UNK
     Route: 050
  588. METHOTREXATE SODIUM [Suspect]
     Active Substance: METHOTREXATE SODIUM
     Dosage: UNK UNK, UNK PHARMACEUTICAL DOSE FORM (FREE TEXT): 98
     Route: 050
  589. METHOTREXATE SODIUM [Suspect]
     Active Substance: METHOTREXATE SODIUM
     Dosage: UNK
     Route: 050
  590. METHOTREXATE SODIUM [Suspect]
     Active Substance: METHOTREXATE SODIUM
     Dosage: UNK
     Route: 050
  591. METHOTREXATE SODIUM [Suspect]
     Active Substance: METHOTREXATE SODIUM
     Dosage: UNK
     Route: 065
  592. METHOTREXATE SODIUM [Suspect]
     Active Substance: METHOTREXATE SODIUM
     Dosage: UNK
     Route: 050
  593. METHOTREXATE SODIUM [Suspect]
     Active Substance: METHOTREXATE SODIUM
     Dosage: UNK
     Route: 050
  594. METHOTREXATE SODIUM [Suspect]
     Active Substance: METHOTREXATE SODIUM
     Dosage: UNK
     Route: 065
  595. METHOTREXATE SODIUM [Suspect]
     Active Substance: METHOTREXATE SODIUM
     Dosage: UNK; ADDITIONAL INFORMATION ON DRUG (FREE TEXT): ADALIMUMAB SOLUTION FOR INJECTION, SINGLE DOSE PEN
     Route: 050
     Dates: start: 20211112
  596. METHOTREXATE SODIUM [Suspect]
     Active Substance: METHOTREXATE SODIUM
     Dosage: UNK; ADDITIONAL INFORMATION ON DRUG (FREE TEXT): ADALIMUMAB SOLUTION FOR INJECTION, SINGLE DOSE PEN
     Route: 050
  597. METHOTREXATE SODIUM [Suspect]
     Active Substance: METHOTREXATE SODIUM
     Dosage: UNK; ADDITIONAL INFORMATION ON DRUG (FREE TEXT): ADALIMUMAB SOLUTION FOR INJECTION, SINGLE DOSE PEN
     Route: 050
     Dates: start: 20211211
  598. METHOTREXATE SODIUM [Suspect]
     Active Substance: METHOTREXATE SODIUM
     Dosage: UNK UNK, UNK
     Route: 050
     Dates: start: 20211112
  599. METHOTREXATE SODIUM [Suspect]
     Active Substance: METHOTREXATE SODIUM
     Indication: Product used for unknown indication
     Dosage: UNK UNK, UNK
     Route: 065
  600. METHOTREXATE SODIUM [Suspect]
     Active Substance: METHOTREXATE SODIUM
     Dosage: UNK UNK, UNK
     Route: 065
  601. METHOTREXATE SODIUM [Suspect]
     Active Substance: METHOTREXATE SODIUM
     Dosage: UNK UNK, UNK
     Route: 065
  602. METHOTREXATE SODIUM [Suspect]
     Active Substance: METHOTREXATE SODIUM
     Dosage: UNK UNK, UNK
     Route: 065
  603. METHOTREXATE SODIUM [Suspect]
     Active Substance: METHOTREXATE SODIUM
     Dosage: UNK UNK, UNK
     Route: 065
  604. METHOTREXATE SODIUM [Suspect]
     Active Substance: METHOTREXATE SODIUM
     Dosage: UNK UNK, UNK
     Route: 065
  605. METHOTREXATE SODIUM [Suspect]
     Active Substance: METHOTREXATE SODIUM
     Dosage: UNKNOWN; ;
     Route: 050
     Dates: start: 20211211
  606. METHOTREXATE SODIUM [Suspect]
     Active Substance: METHOTREXATE SODIUM
     Dosage: UNKNOWN; ;
     Route: 050
  607. METHOTREXATE SODIUM [Suspect]
     Active Substance: METHOTREXATE SODIUM
     Dosage: UNKNOWN; ;
     Route: 050
  608. METHOTREXATE SODIUM [Suspect]
     Active Substance: METHOTREXATE SODIUM
     Dosage: UNKNOWN; ;
     Route: 050
  609. METHOTREXATE SODIUM [Suspect]
     Active Substance: METHOTREXATE SODIUM
     Dosage: UNKNOWN; ;
     Route: 050
  610. METHOTREXATE SODIUM [Suspect]
     Active Substance: METHOTREXATE SODIUM
     Dosage: UNKNOWN; ;
     Route: 050
  611. METHOTREXATE SODIUM [Suspect]
     Active Substance: METHOTREXATE SODIUM
     Dosage: UNKNOWN; ;
     Route: 050
  612. METHOTREXATE SODIUM [Suspect]
     Active Substance: METHOTREXATE SODIUM
     Dosage: UNKNOWN; ;
     Route: 050
  613. METHOTREXATE SODIUM [Suspect]
     Active Substance: METHOTREXATE SODIUM
     Dosage: UNKNOWN; ;
     Route: 050
  614. METHOTREXATE SODIUM [Suspect]
     Active Substance: METHOTREXATE SODIUM
     Dosage: UNKNOWN; ;
     Route: 050
  615. METHOTREXATE SODIUM [Suspect]
     Active Substance: METHOTREXATE SODIUM
     Dosage: UNKNOWN; ;
     Route: 050
  616. METHOTREXATE SODIUM [Suspect]
     Active Substance: METHOTREXATE SODIUM
     Dosage: UNKNOWN; ;
     Route: 050
  617. METHOTREXATE SODIUM [Suspect]
     Active Substance: METHOTREXATE SODIUM
     Dosage: UNKNOWN; ;
     Route: 050
  618. METHOTREXATE SODIUM [Suspect]
     Active Substance: METHOTREXATE SODIUM
     Dosage: UNKNOWN; ;
     Route: 050
  619. METHOTREXATE SODIUM [Suspect]
     Active Substance: METHOTREXATE SODIUM
     Dosage: UNKNOWN; ;
     Route: 050
  620. METHOTREXATE SODIUM [Suspect]
     Active Substance: METHOTREXATE SODIUM
     Dosage: UNK, UNK
     Route: 050
  621. METHOTREXATE SODIUM [Suspect]
     Active Substance: METHOTREXATE SODIUM
     Dosage: UNK
     Route: 050
  622. METHOTREXATE SODIUM [Suspect]
     Active Substance: METHOTREXATE SODIUM
     Dosage: UNK
     Route: 050
  623. METHOTREXATE SODIUM [Suspect]
     Active Substance: METHOTREXATE SODIUM
     Dosage: UNK, UNK
     Route: 050
  624. METHOTREXATE SODIUM [Suspect]
     Active Substance: METHOTREXATE SODIUM
     Dosage: UNK
     Route: 050
  625. METHOTREXATE SODIUM [Suspect]
     Active Substance: METHOTREXATE SODIUM
     Dosage: UNK, UNK
     Route: 050
  626. METHOTREXATE SODIUM [Suspect]
     Active Substance: METHOTREXATE SODIUM
     Dosage: UNK, UNK
     Route: 050
  627. METHOTREXATE SODIUM [Suspect]
     Active Substance: METHOTREXATE SODIUM
     Dosage: UNK
     Route: 050
  628. METHOTREXATE SODIUM [Suspect]
     Active Substance: METHOTREXATE SODIUM
     Dosage: UNK, UNK
     Route: 050
  629. METHOTREXATE SODIUM [Suspect]
     Active Substance: METHOTREXATE SODIUM
     Dosage: UNK
     Route: 050
  630. METHOTREXATE SODIUM [Suspect]
     Active Substance: METHOTREXATE SODIUM
     Dosage: UNK
     Route: 050
  631. METHOTREXATE SODIUM [Suspect]
     Active Substance: METHOTREXATE SODIUM
     Dosage: UNK
     Route: 050
  632. METHOTREXATE SODIUM [Suspect]
     Active Substance: METHOTREXATE SODIUM
     Dosage: UNK, UNK
     Route: 050
  633. METHOTREXATE SODIUM [Suspect]
     Active Substance: METHOTREXATE SODIUM
     Dosage: UNK
     Route: 065
  634. METHOTREXATE SODIUM [Suspect]
     Active Substance: METHOTREXATE SODIUM
     Dosage: UNK
     Route: 050
     Dates: start: 20211211
  635. METHOTREXATE SODIUM [Suspect]
     Active Substance: METHOTREXATE SODIUM
     Dosage: UNKNOWN
     Route: 050
     Dates: start: 20211112
  636. METHOTREXATE SODIUM [Suspect]
     Active Substance: METHOTREXATE SODIUM
     Dosage: UNK
     Route: 065
  637. METHOTREXATE SODIUM [Suspect]
     Active Substance: METHOTREXATE SODIUM
     Dosage: UNK
     Route: 065
  638. METHOTREXATE SODIUM [Suspect]
     Active Substance: METHOTREXATE SODIUM
     Dosage: UNK
     Route: 065
  639. METHOTREXATE SODIUM [Suspect]
     Active Substance: METHOTREXATE SODIUM
     Dosage: UNK
     Route: 065
  640. METHOTREXATE SODIUM [Suspect]
     Active Substance: METHOTREXATE SODIUM
     Dosage: UNK
     Route: 065
  641. METHOTREXATE SODIUM [Suspect]
     Active Substance: METHOTREXATE SODIUM
     Dosage: UNK
     Route: 065
  642. METHOTREXATE SODIUM [Suspect]
     Active Substance: METHOTREXATE SODIUM
     Dosage: UNK
     Route: 065
  643. METHOTREXATE SODIUM [Suspect]
     Active Substance: METHOTREXATE SODIUM
     Dosage: UNK
     Route: 065
  644. METHOTREXATE SODIUM [Suspect]
     Active Substance: METHOTREXATE SODIUM
     Dosage: UNK
     Route: 065
  645. METHOTREXATE SODIUM [Suspect]
     Active Substance: METHOTREXATE SODIUM
     Dosage: UNK
     Route: 065
  646. METHOTREXATE SODIUM [Suspect]
     Active Substance: METHOTREXATE SODIUM
     Dosage: UNK
     Route: 065
  647. METHOTREXATE SODIUM [Suspect]
     Active Substance: METHOTREXATE SODIUM
     Dosage: UNK
     Route: 065
  648. METHOTREXATE SODIUM [Suspect]
     Active Substance: METHOTREXATE SODIUM
     Dosage: UNK
     Route: 065
  649. METHOTREXATE SODIUM [Suspect]
     Active Substance: METHOTREXATE SODIUM
     Indication: Product used for unknown indication
     Dosage: UNK
     Route: 065
  650. METHOTREXATE SODIUM [Suspect]
     Active Substance: METHOTREXATE SODIUM
     Dosage: UNK
     Route: 065
  651. METHOTREXATE SODIUM [Suspect]
     Active Substance: METHOTREXATE SODIUM
     Dosage: UNK
     Route: 065
  652. METHOTREXATE SODIUM [Suspect]
     Active Substance: METHOTREXATE SODIUM
     Dosage: UNK
     Route: 065
  653. METHOTREXATE SODIUM [Suspect]
     Active Substance: METHOTREXATE SODIUM
     Dosage: UNK
     Route: 065
  654. METHOTREXATE SODIUM [Suspect]
     Active Substance: METHOTREXATE SODIUM
     Dosage: UNK
     Route: 065
  655. METHOTREXATE SODIUM [Suspect]
     Active Substance: METHOTREXATE SODIUM
     Dosage: UNK
     Route: 065
  656. METHOTREXATE SODIUM [Suspect]
     Active Substance: METHOTREXATE SODIUM
     Dosage: UNK
     Route: 065
  657. METHOTREXATE SODIUM [Suspect]
     Active Substance: METHOTREXATE SODIUM
     Dosage: UNK
     Route: 065
  658. METHOTREXATE SODIUM [Suspect]
     Active Substance: METHOTREXATE SODIUM
     Dosage: UNK
     Route: 065
  659. METHOTREXATE SODIUM [Suspect]
     Active Substance: METHOTREXATE SODIUM
     Dosage: UNK
     Route: 065
  660. METHOTREXATE SODIUM [Suspect]
     Active Substance: METHOTREXATE SODIUM
     Dosage: UNK
     Route: 065
  661. METHOTREXATE SODIUM [Suspect]
     Active Substance: METHOTREXATE SODIUM
     Dosage: UNK
     Route: 065
  662. METHOTREXATE SODIUM [Suspect]
     Active Substance: METHOTREXATE SODIUM
     Dosage: UNK
     Route: 050
  663. METHOTREXATE SODIUM [Suspect]
     Active Substance: METHOTREXATE SODIUM
     Route: 050
  664. METHOTREXATE SODIUM [Suspect]
     Active Substance: METHOTREXATE SODIUM
     Route: 050
  665. METHOTREXATE SODIUM [Suspect]
     Active Substance: METHOTREXATE SODIUM
     Route: 050
  666. METHOTREXATE SODIUM [Suspect]
     Active Substance: METHOTREXATE SODIUM
     Route: 050
  667. METHOTREXATE SODIUM [Suspect]
     Active Substance: METHOTREXATE SODIUM
     Dosage: UNK
     Route: 050
  668. METHOTREXATE SODIUM [Suspect]
     Active Substance: METHOTREXATE SODIUM
     Dosage: UNKNOWN (ADALIMUMAB SOLUTION FOR INJECTION, SINGLE DOSE PEN)
     Route: 050
  669. METHOTREXATE SODIUM [Suspect]
     Active Substance: METHOTREXATE SODIUM
     Dosage: UNKNOWN (ADALIMUMAB SOLUTION FOR INJECTION, SINGLE DOSE PEN)
     Route: 050
  670. METHOTREXATE SODIUM [Suspect]
     Active Substance: METHOTREXATE SODIUM
     Dosage: UNK
     Route: 050
     Dates: start: 20211112
  671. METHOTREXATE SODIUM [Suspect]
     Active Substance: METHOTREXATE SODIUM
     Dosage: UNKNOWN
     Route: 050
  672. METHOTREXATE SODIUM [Suspect]
     Active Substance: METHOTREXATE SODIUM
     Dosage: UNKNOWN
     Route: 050
  673. METHOTREXATE SODIUM [Suspect]
     Active Substance: METHOTREXATE SODIUM
     Dosage: UNKNOWN
     Route: 050
  674. METHOTREXATE SODIUM [Suspect]
     Active Substance: METHOTREXATE SODIUM
     Dosage: UNKNOWN
     Route: 050
  675. METHOTREXATE SODIUM [Suspect]
     Active Substance: METHOTREXATE SODIUM
     Dosage: UNKNOWN
     Route: 050
  676. METHOTREXATE SODIUM [Suspect]
     Active Substance: METHOTREXATE SODIUM
     Dosage: UNKNOWN
     Route: 050
  677. METHOTREXATE SODIUM [Suspect]
     Active Substance: METHOTREXATE SODIUM
     Dosage: UNKNOWN
     Route: 050
  678. METHOTREXATE SODIUM [Suspect]
     Active Substance: METHOTREXATE SODIUM
     Dosage: UNKNOWN
     Route: 050
  679. METHOTREXATE SODIUM [Suspect]
     Active Substance: METHOTREXATE SODIUM
     Dosage: UNKNOWN
     Route: 050
  680. METHOTREXATE SODIUM [Suspect]
     Active Substance: METHOTREXATE SODIUM
     Dosage: UNKNOWN
     Route: 050
  681. METHOTREXATE SODIUM [Suspect]
     Active Substance: METHOTREXATE SODIUM
     Dosage: UNKNOWN
     Route: 050
  682. METHOTREXATE SODIUM [Suspect]
     Active Substance: METHOTREXATE SODIUM
     Dosage: UNKNOWN
     Route: 050
  683. METHOTREXATE SODIUM [Suspect]
     Active Substance: METHOTREXATE SODIUM
     Dosage: UNKNOWN
     Route: 050
  684. METHOTREXATE SODIUM [Suspect]
     Active Substance: METHOTREXATE SODIUM
     Dosage: UNKNOWN
     Route: 050
  685. METHOTREXATE SODIUM [Suspect]
     Active Substance: METHOTREXATE SODIUM
     Dosage: UNKNOWN
     Route: 050
  686. METHOTREXATE SODIUM [Suspect]
     Active Substance: METHOTREXATE SODIUM
     Dosage: UNKNOWN
     Route: 050
  687. REMICADE [Suspect]
     Active Substance: INFLIXIMAB
     Indication: Crohn^s disease
     Dosage: UNK (ADALIMUMAB SOLUTION FOR INJECTION, SINGLE DOSE PEN)
     Route: 050
  688. REMICADE [Suspect]
     Active Substance: INFLIXIMAB
     Indication: Product used for unknown indication
     Dosage: UNK
     Route: 050
  689. REMICADE [Suspect]
     Active Substance: INFLIXIMAB
     Dosage: UNK; ; ADDITIONAL INFO: ROUTE:OTHER ROUTE:OTHER
  690. REMICADE [Suspect]
     Active Substance: INFLIXIMAB
     Dosage: UNK; ;ADDITIONAL INFO: ROUTE:OTHER ROUTE:OTHER
  691. REMICADE [Suspect]
     Active Substance: INFLIXIMAB
     Dosage: UNKNOWN; OTHER
     Route: 050
  692. REMICADE [Suspect]
     Active Substance: INFLIXIMAB
     Dosage: UNKNOWN; OTHER
     Route: 050
  693. REMICADE [Suspect]
     Active Substance: INFLIXIMAB
     Dosage: UNKNOWN
     Route: 050
  694. REMICADE [Suspect]
     Active Substance: INFLIXIMAB
     Dosage: UNK; ; ADDITIONAL INFO: ROUTE:OTHER
     Route: 050
  695. REMICADE [Suspect]
     Active Substance: INFLIXIMAB
     Dosage: UNKNOWN
     Route: 050
  696. REMICADE [Suspect]
     Active Substance: INFLIXIMAB
     Dosage: UNK
     Route: 050
  697. REMICADE [Suspect]
     Active Substance: INFLIXIMAB
     Dosage: PHARMACEUTICAL DOSE FORM (FREE TEXT): 230
     Route: 050
  698. REMICADE [Suspect]
     Active Substance: INFLIXIMAB
     Dosage: UNKNOWN; PHARMACEUTICAL DOSE FORM (FREE TEXT): 230
     Route: 050
  699. REMICADE [Suspect]
     Active Substance: INFLIXIMAB
     Dosage: UNK
     Route: 042
  700. REMICADE [Suspect]
     Active Substance: INFLIXIMAB
     Dosage: UNK
     Route: 042
  701. REMICADE [Suspect]
     Active Substance: INFLIXIMAB
     Dosage: UNK
     Route: 042
  702. REMICADE [Suspect]
     Active Substance: INFLIXIMAB
     Dosage: UNK
     Route: 042
  703. REMICADE [Suspect]
     Active Substance: INFLIXIMAB
     Dosage: UNK
     Route: 050
  704. REMICADE [Suspect]
     Active Substance: INFLIXIMAB
     Dosage: UNKNOWN
     Route: 050
  705. REMICADE [Suspect]
     Active Substance: INFLIXIMAB
     Dosage: UNK
     Route: 050
  706. REMICADE [Suspect]
     Active Substance: INFLIXIMAB
     Dosage: UNKNOWN
     Route: 050
  707. REMICADE [Suspect]
     Active Substance: INFLIXIMAB
     Dosage: UNK
     Route: 050
  708. REMICADE [Suspect]
     Active Substance: INFLIXIMAB
     Dosage: UNK
     Route: 042
  709. REMICADE [Suspect]
     Active Substance: INFLIXIMAB
     Dosage: UNK
     Route: 050
  710. REMICADE [Suspect]
     Active Substance: INFLIXIMAB
     Dosage: UNK
     Route: 050
  711. REMICADE [Suspect]
     Active Substance: INFLIXIMAB
     Dosage: UNK
     Route: 065
  712. REMICADE [Suspect]
     Active Substance: INFLIXIMAB
     Dosage: UNK
     Route: 042
  713. REMICADE [Suspect]
     Active Substance: INFLIXIMAB
     Dosage: UNK
     Route: 042
  714. REMICADE [Suspect]
     Active Substance: INFLIXIMAB
     Dosage: UNK
     Route: 042
  715. REMICADE [Suspect]
     Active Substance: INFLIXIMAB
     Dosage: UNK
     Route: 042
  716. REMICADE [Suspect]
     Active Substance: INFLIXIMAB
     Dosage: UNK
     Route: 042
  717. REMICADE [Suspect]
     Active Substance: INFLIXIMAB
     Dosage: UNK
     Route: 042
  718. REMICADE [Suspect]
     Active Substance: INFLIXIMAB
     Dosage: UNK
     Route: 042
  719. REMICADE [Suspect]
     Active Substance: INFLIXIMAB
     Dosage: UNKNOWN
     Route: 042
  720. REMICADE [Suspect]
     Active Substance: INFLIXIMAB
     Dosage: UNKNOWN
     Route: 042
  721. REMICADE [Suspect]
     Active Substance: INFLIXIMAB
     Dosage: UNK; ;
     Route: 050
  722. REMICADE [Suspect]
     Active Substance: INFLIXIMAB
     Dosage: UNK
     Route: 042
  723. REMICADE [Suspect]
     Active Substance: INFLIXIMAB
     Dosage: UNK
     Route: 042
  724. REMICADE [Suspect]
     Active Substance: INFLIXIMAB
     Dosage: UNK
     Route: 042
  725. REMICADE [Suspect]
     Active Substance: INFLIXIMAB
     Dosage: UNK
     Route: 042
  726. REMICADE [Suspect]
     Active Substance: INFLIXIMAB
     Dosage: UNK
     Route: 042
  727. REMICADE [Suspect]
     Active Substance: INFLIXIMAB
     Dosage: UNK
     Route: 042
  728. REMICADE [Suspect]
     Active Substance: INFLIXIMAB
     Dosage: UNK
     Route: 042
  729. REMICADE [Suspect]
     Active Substance: INFLIXIMAB
     Dosage: UNK
     Route: 042
  730. REMICADE [Suspect]
     Active Substance: INFLIXIMAB
     Dosage: UNK
     Route: 042
  731. REMICADE [Suspect]
     Active Substance: INFLIXIMAB
     Dosage: UNK
     Route: 042
  732. REMICADE [Suspect]
     Active Substance: INFLIXIMAB
     Dosage: UNK
     Route: 042
  733. REMICADE [Suspect]
     Active Substance: INFLIXIMAB
     Dosage: UNK
     Route: 042
  734. REMICADE [Suspect]
     Active Substance: INFLIXIMAB
     Dosage: UNK
     Route: 042
  735. REMICADE [Suspect]
     Active Substance: INFLIXIMAB
     Dosage: UNK
     Route: 042
  736. REMICADE [Suspect]
     Active Substance: INFLIXIMAB
     Dosage: UNK
     Route: 042
  737. REMICADE [Suspect]
     Active Substance: INFLIXIMAB
     Dosage: UNK
     Route: 050
  738. REMICADE [Suspect]
     Active Substance: INFLIXIMAB
     Dosage: UNK (OROMUCOSAL SUSPENSION) (1 UNIT, SINGLE DOSE PEN, UNIT EQUAL TO SURE CLICK)
     Route: 042
  739. REMICADE [Suspect]
     Active Substance: INFLIXIMAB
     Dosage: UNK
     Route: 065
  740. REMICADE [Suspect]
     Active Substance: INFLIXIMAB
     Dosage: UNK
  741. REMICADE [Suspect]
     Active Substance: INFLIXIMAB
     Dosage: UNK (OROMUCOSAL SUSPENSION) (1 UNIT, SINGLE DOSE PEN, UNIT EQUAL TO SURE CLICK)
     Route: 042
  742. REMICADE [Suspect]
     Active Substance: INFLIXIMAB
     Dosage: UNK
  743. REMICADE [Suspect]
     Active Substance: INFLIXIMAB
     Dosage: UNK
  744. REMICADE [Suspect]
     Active Substance: INFLIXIMAB
     Dosage: UNK (OROMUCOSAL SUSPENSION) (1 UNIT, SINGLE DOSE PEN, UNIT EQUAL TO SURE CLICK)
     Route: 042
  745. REMICADE [Suspect]
     Active Substance: INFLIXIMAB
     Dosage: UNK
  746. REMICADE [Suspect]
     Active Substance: INFLIXIMAB
     Indication: Crohn^s disease
     Dosage: UNK
     Route: 065
  747. REMICADE [Suspect]
     Active Substance: INFLIXIMAB
     Dosage: UNKNOWN
     Route: 042
  748. REMICADE [Suspect]
     Active Substance: INFLIXIMAB
     Dosage: UNK (ADALIMUMAB SOLUTION FOR INJECTION, SINGLE DOSE PEN)
     Route: 050
  749. REMICADE [Suspect]
     Active Substance: INFLIXIMAB
     Dosage: UNK
     Route: 042
  750. REMICADE [Suspect]
     Active Substance: INFLIXIMAB
     Dosage: UNK
     Route: 042
  751. REMICADE [Suspect]
     Active Substance: INFLIXIMAB
     Dosage: UNKNOWN
     Route: 042
  752. REMICADE [Suspect]
     Active Substance: INFLIXIMAB
     Dosage: UNK (ADALIMUMAB SOLUTION FOR INJECTION, SINGLE DOSE PEN)
     Route: 065
  753. REMICADE [Suspect]
     Active Substance: INFLIXIMAB
     Dosage: UNK
     Route: 042
  754. REMICADE [Suspect]
     Active Substance: INFLIXIMAB
     Dosage: UNK
     Route: 050
  755. REMICADE [Suspect]
     Active Substance: INFLIXIMAB
     Dosage: UNK
     Route: 050
  756. REMICADE [Suspect]
     Active Substance: INFLIXIMAB
     Dosage: UNK, OTHER (ADALIMUMAB SOLUTION FOR INJECTION, SINGLE DOSE PEN)
     Route: 065
  757. REMICADE [Suspect]
     Active Substance: INFLIXIMAB
     Dosage: UNK, OTHER
     Route: 065
  758. REMICADE [Suspect]
     Active Substance: INFLIXIMAB
     Dosage: UNK, OTHER
     Route: 042
  759. REMICADE [Suspect]
     Active Substance: INFLIXIMAB
     Dosage: UNK, OTHER
     Route: 042
  760. REMICADE [Suspect]
     Active Substance: INFLIXIMAB
     Dosage: UNK
     Route: 042
  761. REMICADE [Suspect]
     Active Substance: INFLIXIMAB
     Dosage: UNK, OTHER
     Route: 065
  762. REMICADE [Suspect]
     Active Substance: INFLIXIMAB
     Dosage: UNKNOWN; ;
     Route: 050
  763. REMICADE [Suspect]
     Active Substance: INFLIXIMAB
     Dosage: UNKNOWN; ;
     Route: 050
  764. REMICADE [Suspect]
     Active Substance: INFLIXIMAB
     Dosage: UNKNOWN; ;
     Route: 050
  765. REMICADE [Suspect]
     Active Substance: INFLIXIMAB
     Dosage: UNKNOWN; ;
     Route: 050
  766. REMICADE [Suspect]
     Active Substance: INFLIXIMAB
     Dosage: UNKNOWN; ;
     Route: 050
  767. REMICADE [Suspect]
     Active Substance: INFLIXIMAB
     Dosage: UNKNOWN; ;
     Route: 050
  768. REMICADE [Suspect]
     Active Substance: INFLIXIMAB
     Dosage: UNKNOWN; ;
     Route: 050
  769. REMICADE [Suspect]
     Active Substance: INFLIXIMAB
     Dosage: UNK; ;
     Route: 050
  770. REMICADE [Suspect]
     Active Substance: INFLIXIMAB
     Dosage: UNK; ;
     Route: 050
  771. REMICADE [Suspect]
     Active Substance: INFLIXIMAB
     Dosage: UNK; ;
     Route: 050
  772. REMICADE [Suspect]
     Active Substance: INFLIXIMAB
     Dosage: UNK; ;
     Route: 050
  773. REMICADE [Suspect]
     Active Substance: INFLIXIMAB
     Dosage: UNK
     Route: 065
  774. REMICADE [Suspect]
     Active Substance: INFLIXIMAB
     Dosage: UNK
     Route: 065
  775. REMICADE [Suspect]
     Active Substance: INFLIXIMAB
     Dosage: UNK, OTHER
     Route: 042
  776. REMICADE [Suspect]
     Active Substance: INFLIXIMAB
     Dosage: UNK
     Route: 065
  777. REMICADE [Suspect]
     Active Substance: INFLIXIMAB
     Dosage: UNK
     Route: 065
  778. REMICADE [Suspect]
     Active Substance: INFLIXIMAB
     Dosage: UNK, OTHER
     Route: 042
  779. REMICADE [Suspect]
     Active Substance: INFLIXIMAB
     Dosage: UNK, OTHER
     Route: 042
  780. REMICADE [Suspect]
     Active Substance: INFLIXIMAB
     Dosage: UNK
     Route: 065
  781. REMICADE [Suspect]
     Active Substance: INFLIXIMAB
     Dosage: UNK, OTHER
     Route: 042
  782. REMICADE [Suspect]
     Active Substance: INFLIXIMAB
     Dosage: UNK, OTHER
     Route: 042
  783. REMICADE [Suspect]
     Active Substance: INFLIXIMAB
     Dosage: UNK, OTHER
     Route: 042
  784. REMICADE [Suspect]
     Active Substance: INFLIXIMAB
     Dosage: UNK, OTHER
     Route: 042
  785. REMICADE [Suspect]
     Active Substance: INFLIXIMAB
     Dosage: UNK, OTHER
     Route: 042
  786. REMICADE [Suspect]
     Active Substance: INFLIXIMAB
     Dosage: UNK, OTHER
     Route: 042
  787. REMICADE [Suspect]
     Active Substance: INFLIXIMAB
     Dosage: UNK
     Route: 065
  788. REMICADE [Suspect]
     Active Substance: INFLIXIMAB
     Dosage: UNK
     Route: 065
  789. REMICADE [Suspect]
     Active Substance: INFLIXIMAB
     Dosage: UNK
     Route: 065
  790. REMICADE [Suspect]
     Active Substance: INFLIXIMAB
     Dosage: UNK
     Route: 065
  791. REMICADE [Suspect]
     Active Substance: INFLIXIMAB
     Dosage: UNK
     Route: 065
  792. REMICADE [Suspect]
     Active Substance: INFLIXIMAB
     Dosage: UNK
     Route: 065
  793. REMICADE [Suspect]
     Active Substance: INFLIXIMAB
     Dosage: UNK
     Route: 065
  794. REMICADE [Suspect]
     Active Substance: INFLIXIMAB
     Dosage: UNK
     Route: 065
  795. REMICADE [Suspect]
     Active Substance: INFLIXIMAB
     Dosage: UNK
     Route: 065
  796. REMICADE [Suspect]
     Active Substance: INFLIXIMAB
     Indication: Crohn^s disease
     Dosage: UNK, ADALIMUMAB SOLUTION FOR INJECTION, SINGLE DOSE PEN
     Route: 042
  797. REMICADE [Suspect]
     Active Substance: INFLIXIMAB
     Dosage: UNK, ADDITIONAL INFORMATION ON DRUG (FREE TEXT): ADALIMUMAB SOLUTION FOR INJECTION, SINGLE DOSE PEN
     Route: 042
  798. REMICADE [Suspect]
     Active Substance: INFLIXIMAB
     Dosage: UNK, ADDITIONAL INFORMATION ON DRUG (FREE TEXT): ADALIMUMAB SOLUTION FOR INJECTION, SINGLE DOSE PEN
     Route: 042
  799. REMICADE [Suspect]
     Active Substance: INFLIXIMAB
     Dosage: UNK, ADDITIONAL INFORMATION ON DRUG (FREE TEXT): ADALIMUMAB SOLUTION FOR INJECTION, SINGLE DOSE PEN
     Route: 042
  800. REMICADE [Suspect]
     Active Substance: INFLIXIMAB
     Dosage: UNK, ADDITIONAL INFORMATION ON DRUG (FREE TEXT): ADALIMUMAB SOLUTION FOR INJECTION, SINGLE DOSE PEN
     Route: 065
  801. REMICADE [Suspect]
     Active Substance: INFLIXIMAB
     Dosage: UNK, ADDITIONAL INFORMATION ON DRUG (FREE TEXT): ADALIMUMAB SOLUTION FOR INJECTION, SINGLE DOSE PEN
     Route: 065
  802. REMICADE [Suspect]
     Active Substance: INFLIXIMAB
     Dosage: UNK
     Route: 042
  803. REMICADE [Suspect]
     Active Substance: INFLIXIMAB
     Dosage: UNK, ADALIMUMAB SOLUTION FOR INJECTION, SINGLE DOSE PEN
     Route: 050
  804. REMICADE [Suspect]
     Active Substance: INFLIXIMAB
     Dosage: UNK
     Route: 042
  805. REMICADE [Suspect]
     Active Substance: INFLIXIMAB
     Dosage: UNK
     Route: 042
  806. REMICADE [Suspect]
     Active Substance: INFLIXIMAB
     Dosage: UNK
     Route: 042
  807. REMICADE [Suspect]
     Active Substance: INFLIXIMAB
     Dosage: UNK, ADALIMUMAB SOLUTION FOR INJECTION, SINGLE DOSE PEN
     Route: 050
  808. REMICADE [Suspect]
     Active Substance: INFLIXIMAB
     Dosage: UNK
     Route: 042
  809. REMICADE [Suspect]
     Active Substance: INFLIXIMAB
     Dosage: UNK
     Route: 042
  810. REMICADE [Suspect]
     Active Substance: INFLIXIMAB
     Dosage: UNK, ADDITIONAL INFORMATION ON DRUG (FREE TEXT): ADALIMUMAB SOLUTION FOR INJECTION, SINGLE DOSE PEN
     Route: 050
  811. REMICADE [Suspect]
     Active Substance: INFLIXIMAB
     Dosage: UNK
     Route: 042
  812. REMICADE [Suspect]
     Active Substance: INFLIXIMAB
     Dosage: UNK
  813. REMICADE [Suspect]
     Active Substance: INFLIXIMAB
     Dosage: UNK
  814. REMICADE [Suspect]
     Active Substance: INFLIXIMAB
     Dosage: UNK, ADDITIONAL INFORMATION ON DRUG (FREE TEXT): ADALIMUMAB SOLUTION FOR INJECTION, SINGLE DOSE PEN
     Route: 050
  815. REMICADE [Suspect]
     Active Substance: INFLIXIMAB
     Dosage: UNKNOWN, ADDITIONAL INFORMATION ON DRUG (FREE TEXT): ADALIMUMAB SOLUTION FOR INJECTION, SINGLE DOSE
     Route: 042
  816. REMICADE [Suspect]
     Active Substance: INFLIXIMAB
     Dosage: UNKNOWN, ADDITIONAL INFORMATION ON DRUG (FREE TEXT): ADALIMUMAB SOLUTION FOR INJECTION, SINGLE DOSE
     Route: 042
  817. REMICADE [Suspect]
     Active Substance: INFLIXIMAB
     Dosage: UNK, ADDITIONAL INFORMATION ON DRUG (FREE TEXT): ADALIMUMAB SOLUTION FOR INJECTION, SINGLE DOSE PEN
     Route: 050
  818. REMICADE [Suspect]
     Active Substance: INFLIXIMAB
     Dosage: UNK, ADDITIONAL INFORMATION ON DRUG (FREE TEXT): ADALIMUMAB SOLUTION FOR INJECTION, SINGLE DOSE PEN
     Route: 050
  819. REMICADE [Suspect]
     Active Substance: INFLIXIMAB
     Dosage: UNK, ADDITIONAL INFORMATION ON DRUG (FREE TEXT): ADALIMUMAB SOLUTION FOR INJECTION, SINGLE DOSE PEN
     Route: 050
  820. REMICADE [Suspect]
     Active Substance: INFLIXIMAB
     Dosage: UNK, ADDITIONAL INFORMATION ON DRUG (FREE TEXT): ADALIMUMAB SOLUTION FOR INJECTION, SINGLE DOSE PEN
     Route: 050
  821. REMICADE [Suspect]
     Active Substance: INFLIXIMAB
     Dosage: UNK
     Route: 042
  822. REMICADE [Suspect]
     Active Substance: INFLIXIMAB
     Dosage: UNK (OROMUCOSAL SUSPENSION) (1 UNIT, SINGLE DOSE PEN, UNIT EQUAL TO SURE CLICK)
     Route: 042
  823. REMICADE [Suspect]
     Active Substance: INFLIXIMAB
     Dosage: UNK, ADDITIONAL INFORMATION ON DRUG (FREE TEXT): ADALIMUMAB SOLUTION FOR INJECTION, SINGLE DOSE PEN
     Route: 050
  824. REMICADE [Suspect]
     Active Substance: INFLIXIMAB
     Dosage: UNK, ADDITIONAL INFORMATION ON DRUG (FREE TEXT): ADALIMUMAB SOLUTION FOR INJECTION, SINGLE DOSE PEN
     Route: 050
  825. REMICADE [Suspect]
     Active Substance: INFLIXIMAB
     Dosage: UNK, ADDITIONAL INFORMATION ON DRUG (FREE TEXT): ADALIMUMAB SOLUTION FOR INJECTION, SINGLE DOSE PEN
     Route: 050
  826. REMICADE [Suspect]
     Active Substance: INFLIXIMAB
     Dosage: UNK
     Route: 050
  827. REMICADE [Suspect]
     Active Substance: INFLIXIMAB
     Dosage: UNK, ADDITIONAL INFORMATION ON DRUG (FREE TEXT): ADALIMUMAB SOLUTION FOR INJECTION, SINGLE DOSE PEN
     Route: 065
  828. REMICADE [Suspect]
     Active Substance: INFLIXIMAB
     Dosage: UNK, ADDITIONAL INFORMATION ON DRUG (FREE TEXT): ADALIMUMAB SOLUTION FOR INJECTION, SINGLE DOSE PEN
     Route: 065
  829. REMICADE [Suspect]
     Active Substance: INFLIXIMAB
     Dosage: UNK
     Route: 050
  830. REMICADE [Suspect]
     Active Substance: INFLIXIMAB
     Dosage: UNK
     Route: 050
  831. REMICADE [Suspect]
     Active Substance: INFLIXIMAB
     Dosage: UNK
     Route: 050
  832. REMICADE [Suspect]
     Active Substance: INFLIXIMAB
     Dosage: UNK
     Route: 050
  833. REMICADE [Suspect]
     Active Substance: INFLIXIMAB
     Dosage: UNK
     Route: 050
  834. REMICADE [Suspect]
     Active Substance: INFLIXIMAB
     Dosage: UNK
     Route: 050
  835. REMICADE [Suspect]
     Active Substance: INFLIXIMAB
     Dosage: UNK
     Route: 050
  836. REMICADE [Suspect]
     Active Substance: INFLIXIMAB
     Dosage: UNK
     Route: 050
  837. REMICADE [Suspect]
     Active Substance: INFLIXIMAB
     Dosage: UNK, ADDITIONAL INFORMATION ON DRUG (FREE TEXT): ADALIMUMAB SOLUTION FOR INJECTION, SINGLE DOSE PEN
     Route: 065
  838. REMICADE [Suspect]
     Active Substance: INFLIXIMAB
     Dosage: UNK, ADDITIONAL INFORMATION ON DRUG (FREE TEXT): ADALIMUMAB SOLUTION FOR INJECTION, SINGLE DOSE PEN
     Route: 065
  839. REMICADE [Suspect]
     Active Substance: INFLIXIMAB
     Dosage: UNK, ADDITIONAL INFORMATION ON DRUG (FREE TEXT): ADALIMUMAB SOLUTION FOR INJECTION, SINGLE DOSE PEN
     Route: 065
  840. REMICADE [Suspect]
     Active Substance: INFLIXIMAB
     Dosage: UNK, ADDITIONAL INFORMATION ON DRUG (FREE TEXT): ADALIMUMAB SOLUTION FOR INJECTION, SINGLE DOSE PEN
     Route: 065
  841. REMICADE [Suspect]
     Active Substance: INFLIXIMAB
     Dosage: UNK, ADDITIONAL INFORMATION ON DRUG (FREE TEXT): ADALIMUMAB SOLUTION FOR INJECTION, SINGLE DOSE PEN
     Route: 042
  842. REMICADE [Suspect]
     Active Substance: INFLIXIMAB
     Indication: Crohn^s disease
     Dosage: UNK
     Route: 042
  843. REMICADE [Suspect]
     Active Substance: INFLIXIMAB
     Dosage: UNK
     Route: 042
  844. REMICADE [Suspect]
     Active Substance: INFLIXIMAB
     Dosage: UNK
     Route: 042
  845. REMICADE [Suspect]
     Active Substance: INFLIXIMAB
     Dosage: UNK
     Route: 050
  846. REMICADE [Suspect]
     Active Substance: INFLIXIMAB
     Dosage: UNK
     Route: 050
  847. REMICADE [Suspect]
     Active Substance: INFLIXIMAB
     Dosage: UNK
     Route: 050
  848. REMICADE [Suspect]
     Active Substance: INFLIXIMAB
     Dosage: UNK
     Route: 050
  849. REMICADE [Suspect]
     Active Substance: INFLIXIMAB
     Dosage: UNK
     Route: 050
  850. REMICADE [Suspect]
     Active Substance: INFLIXIMAB
     Dosage: UNK
     Route: 050
  851. REMICADE [Suspect]
     Active Substance: INFLIXIMAB
     Dosage: UNK
     Route: 050
  852. REMICADE [Suspect]
     Active Substance: INFLIXIMAB
     Dosage: UNK
     Route: 050
  853. REMICADE [Suspect]
     Active Substance: INFLIXIMAB
     Dosage: UNK
     Route: 050
  854. REMICADE [Suspect]
     Active Substance: INFLIXIMAB
     Dosage: UNK
     Route: 050
  855. REMICADE [Suspect]
     Active Substance: INFLIXIMAB
     Dosage: UNK
     Route: 050
  856. REMICADE [Suspect]
     Active Substance: INFLIXIMAB
     Dosage: UNK
     Route: 050
  857. REMICADE [Suspect]
     Active Substance: INFLIXIMAB
     Dosage: UNK
     Route: 050
  858. REMICADE [Suspect]
     Active Substance: INFLIXIMAB
     Dosage: UNK
     Route: 050
  859. REMICADE [Suspect]
     Active Substance: INFLIXIMAB
     Dosage: UNK
     Route: 050
  860. REMICADE [Suspect]
     Active Substance: INFLIXIMAB
     Dosage: UNK
     Route: 050
  861. REMICADE [Suspect]
     Active Substance: INFLIXIMAB
     Dosage: UNK
     Route: 050
  862. REMICADE [Suspect]
     Active Substance: INFLIXIMAB
     Dosage: UNK
     Route: 050
  863. REMICADE [Suspect]
     Active Substance: INFLIXIMAB
     Dosage: UNK
     Route: 050
  864. REMICADE [Suspect]
     Active Substance: INFLIXIMAB
     Dosage: UNK
     Route: 050
  865. REMICADE [Suspect]
     Active Substance: INFLIXIMAB
     Dosage: UNK
     Route: 050
  866. REMICADE [Suspect]
     Active Substance: INFLIXIMAB
     Dosage: UNK
     Route: 050
  867. REMICADE [Suspect]
     Active Substance: INFLIXIMAB
     Dosage: UNK
     Route: 050
  868. REMICADE [Suspect]
     Active Substance: INFLIXIMAB
     Dosage: UNK
     Route: 065
  869. REMICADE [Suspect]
     Active Substance: INFLIXIMAB
     Dosage: UNK
     Route: 065
  870. REMICADE [Suspect]
     Active Substance: INFLIXIMAB
     Dosage: UNK
     Route: 065
  871. REMICADE [Suspect]
     Active Substance: INFLIXIMAB
     Dosage: UNK
     Route: 065
  872. REMICADE [Suspect]
     Active Substance: INFLIXIMAB
     Dosage: UNK
     Route: 065
  873. REMICADE [Suspect]
     Active Substance: INFLIXIMAB
     Dosage: UNK
     Route: 065
  874. REMICADE [Suspect]
     Active Substance: INFLIXIMAB
     Dosage: UNK
     Route: 065
  875. REMICADE [Suspect]
     Active Substance: INFLIXIMAB
     Dosage: UNK
     Route: 065
  876. REMICADE [Suspect]
     Active Substance: INFLIXIMAB
     Dosage: UNK
     Route: 065
  877. REMICADE [Suspect]
     Active Substance: INFLIXIMAB
     Dosage: UNK
     Route: 065
  878. REMICADE [Suspect]
     Active Substance: INFLIXIMAB
     Dosage: UNK
     Route: 065
  879. REMICADE [Suspect]
     Active Substance: INFLIXIMAB
     Dosage: UNK
     Route: 065
  880. REMICADE [Suspect]
     Active Substance: INFLIXIMAB
     Dosage: UNK
     Route: 065
  881. REMICADE [Suspect]
     Active Substance: INFLIXIMAB
     Dosage: UNK
     Route: 065
  882. REMICADE [Suspect]
     Active Substance: INFLIXIMAB
     Dosage: UNK
     Route: 065
  883. REMICADE [Suspect]
     Active Substance: INFLIXIMAB
     Dosage: UNK
     Route: 065
  884. REMICADE [Suspect]
     Active Substance: INFLIXIMAB
     Dosage: UNK
     Route: 065
  885. REMICADE [Suspect]
     Active Substance: INFLIXIMAB
     Dosage: UNK
     Route: 065
  886. REMICADE [Suspect]
     Active Substance: INFLIXIMAB
     Dosage: UNK
     Route: 065
  887. REMICADE [Suspect]
     Active Substance: INFLIXIMAB
     Dosage: UNK
     Route: 065
  888. REMICADE [Suspect]
     Active Substance: INFLIXIMAB
     Dosage: UNK
     Route: 065
  889. REMICADE [Suspect]
     Active Substance: INFLIXIMAB
     Dosage: UNK
     Route: 065
  890. REMICADE [Suspect]
     Active Substance: INFLIXIMAB
     Dosage: UNK
     Route: 065
  891. REMICADE [Suspect]
     Active Substance: INFLIXIMAB
     Dosage: UNK
     Route: 065
  892. REMICADE [Suspect]
     Active Substance: INFLIXIMAB
     Indication: Crohn^s disease
     Dosage: UNK
     Route: 065
  893. REMICADE [Suspect]
     Active Substance: INFLIXIMAB
     Dosage: UNK
     Route: 065
  894. REMICADE [Suspect]
     Active Substance: INFLIXIMAB
     Dosage: UNK
     Route: 065
  895. REMICADE [Suspect]
     Active Substance: INFLIXIMAB
     Indication: Crohn^s disease
     Dosage: UNK, OTHER
     Route: 042
  896. REMICADE [Suspect]
     Active Substance: INFLIXIMAB
     Dosage: UNK
     Route: 065
  897. REMICADE [Suspect]
     Active Substance: INFLIXIMAB
     Dosage: UNK, OTHER
     Route: 042
  898. REMICADE [Suspect]
     Active Substance: INFLIXIMAB
     Dosage: UNK, OTHER
     Route: 042
  899. REMICADE [Suspect]
     Active Substance: INFLIXIMAB
     Dosage: UNK
     Route: 065
  900. REMICADE [Suspect]
     Active Substance: INFLIXIMAB
     Dosage: UNK, OTHER
     Route: 050
  901. REMICADE [Suspect]
     Active Substance: INFLIXIMAB
     Dosage: UNK
     Route: 050
  902. REMICADE [Suspect]
     Active Substance: INFLIXIMAB
     Dosage: UNK, OTHER
     Route: 042
  903. REMICADE [Suspect]
     Active Substance: INFLIXIMAB
     Dosage: UNK, OTHER
     Route: 042
  904. REMICADE [Suspect]
     Active Substance: INFLIXIMAB
     Dosage: UNK, OTHER
     Route: 042
  905. REMICADE [Suspect]
     Active Substance: INFLIXIMAB
     Dosage: UNK, OTHER
     Route: 042
  906. REMICADE [Suspect]
     Active Substance: INFLIXIMAB
     Dosage: UNK, OTHER
     Route: 042
  907. REMICADE [Suspect]
     Active Substance: INFLIXIMAB
     Dosage: UNK
     Route: 065
  908. REMICADE [Suspect]
     Active Substance: INFLIXIMAB
     Dosage: UNK, OTHER
     Route: 065
  909. REMICADE [Suspect]
     Active Substance: INFLIXIMAB
     Dosage: UNK, OTHER
     Route: 050
  910. REMICADE [Suspect]
     Active Substance: INFLIXIMAB
     Dosage: UNK
     Route: 065
  911. REMICADE [Suspect]
     Active Substance: INFLIXIMAB
     Dosage: UNK
     Route: 050
  912. REMICADE [Suspect]
     Active Substance: INFLIXIMAB
     Dosage: UNK
     Route: 065
  913. REMICADE [Suspect]
     Active Substance: INFLIXIMAB
     Dosage: UNK
     Route: 065
  914. REMICADE [Suspect]
     Active Substance: INFLIXIMAB
     Dosage: UNK, OTHER
     Route: 042
  915. REMICADE [Suspect]
     Active Substance: INFLIXIMAB
     Dosage: UNK
     Route: 065
  916. REMICADE [Suspect]
     Active Substance: INFLIXIMAB
     Dosage: UNK, OTHER
     Route: 042
  917. REMICADE [Suspect]
     Active Substance: INFLIXIMAB
     Dosage: UNK, OTHER
     Route: 042
  918. REMICADE [Suspect]
     Active Substance: INFLIXIMAB
     Dosage: UNKNOWN
     Route: 042
  919. REMICADE [Suspect]
     Active Substance: INFLIXIMAB
     Dosage: UNK
     Route: 050
  920. REMICADE [Suspect]
     Active Substance: INFLIXIMAB
     Dosage: UNK
     Route: 065
  921. REMICADE [Suspect]
     Active Substance: INFLIXIMAB
     Dosage: UNK
     Route: 050
  922. REMICADE [Suspect]
     Active Substance: INFLIXIMAB
     Dosage: UNK
     Route: 050
  923. REMICADE [Suspect]
     Active Substance: INFLIXIMAB
     Dosage: UNK
     Route: 050
  924. REMICADE [Suspect]
     Active Substance: INFLIXIMAB
     Dosage: UNK
     Route: 050
  925. REMICADE [Suspect]
     Active Substance: INFLIXIMAB
     Dosage: UNK, OTHER
     Route: 042
  926. REMICADE [Suspect]
     Active Substance: INFLIXIMAB
     Dosage: UNK, OTHER
     Route: 042
  927. REMICADE [Suspect]
     Active Substance: INFLIXIMAB
     Dosage: UNK
     Route: 065
  928. REMICADE [Suspect]
     Active Substance: INFLIXIMAB
     Dosage: UNK
     Route: 065
  929. REMICADE [Suspect]
     Active Substance: INFLIXIMAB
     Dosage: UNK, OTHER
     Route: 042
  930. REMICADE [Suspect]
     Active Substance: INFLIXIMAB
     Dosage: UNK, OTHER
     Route: 042
  931. REMICADE [Suspect]
     Active Substance: INFLIXIMAB
     Dosage: UNK, OTHER
     Route: 042
  932. REMICADE [Suspect]
     Active Substance: INFLIXIMAB
     Dosage: UNK, OTHER
     Route: 042
  933. REMICADE [Suspect]
     Active Substance: INFLIXIMAB
     Dosage: UNK, OTHER
     Route: 042
  934. REMICADE [Suspect]
     Active Substance: INFLIXIMAB
     Dosage: UNK
     Route: 065
  935. REMICADE [Suspect]
     Active Substance: INFLIXIMAB
     Dosage: UNK, OTHER
     Route: 065
  936. REMICADE [Suspect]
     Active Substance: INFLIXIMAB
     Dosage: UNK
     Route: 042
  937. REMICADE [Suspect]
     Active Substance: INFLIXIMAB
     Dosage: UNK
     Route: 042
  938. REMICADE [Suspect]
     Active Substance: INFLIXIMAB
     Dosage: UNK
     Route: 042
  939. REMICADE [Suspect]
     Active Substance: INFLIXIMAB
     Dosage: UNK
     Route: 042
  940. REMICADE [Suspect]
     Active Substance: INFLIXIMAB
     Indication: Crohn^s disease
     Dosage: UNK
     Route: 042
  941. REMICADE [Suspect]
     Active Substance: INFLIXIMAB
     Dosage: UNK
  942. REMICADE [Suspect]
     Active Substance: INFLIXIMAB
     Indication: Crohn^s disease
     Dosage: UNK
     Route: 042
  943. REMICADE [Suspect]
     Active Substance: INFLIXIMAB
     Dosage: UNK
     Route: 042
  944. REMICADE [Suspect]
     Active Substance: INFLIXIMAB
     Dosage: UNK
     Route: 042
  945. RIFAXIMIN [Suspect]
     Active Substance: RIFAXIMIN
     Indication: Product used for unknown indication
     Dosage: UNKNOWN (ADDITIONAL INFORMATION ON DRUG (FREE TEXT): DENTAL EMULSION)
     Route: 065
  946. RIFAXIMIN [Suspect]
     Active Substance: RIFAXIMIN
     Indication: Product used for unknown indication
     Dosage: UNK; ADDITIONAL INFO: ROUTE:OTHER, UNK; ;UNK
  947. RIFAXIMIN [Suspect]
     Active Substance: RIFAXIMIN
     Dosage: UNK; ADDITIONAL INFO: ROUTE:OTHER, UNK; ;UNK
  948. RIFAXIMIN [Suspect]
     Active Substance: RIFAXIMIN
     Dosage: UNK; ADDITIONAL INFO: ROUTE:OTHER, UNK; ;UNK
  949. RIFAXIMIN [Suspect]
     Active Substance: RIFAXIMIN
     Dosage: UNKNOWN (ADDITIONAL INFORMATION ON DRUG (FREE TEXT): DENTAL EMULSION)
     Route: 050
  950. RIFAXIMIN [Suspect]
     Active Substance: RIFAXIMIN
     Dosage: UNKNOWN (ADDITIONAL INFORMATION ON DRUG (FREE TEXT): DENTAL EMULSION)
     Route: 050
  951. RIFAXIMIN [Suspect]
     Active Substance: RIFAXIMIN
     Dosage: UNKNOWN (ADDITIONAL INFORMATION ON DRUG (FREE TEXT): DENTAL EMULSION)
     Route: 050
  952. RIFAXIMIN [Suspect]
     Active Substance: RIFAXIMIN
     Dosage: UNK; ADDITIONAL INFO: ROUTE:OTHER
     Route: 050
  953. RIFAXIMIN [Suspect]
     Active Substance: RIFAXIMIN
     Dosage: UNK, ADALIMUMAB SOLUTION FOR INJECTION, SINGLE DOSE PEN
     Route: 050
  954. RIFAXIMIN [Suspect]
     Active Substance: RIFAXIMIN
     Dosage: UNK (ADDITIONAL INFORMATION ON DRUG (FREE TEXT): DENTAL EMULSION)
     Route: 050
  955. RIFAXIMIN [Suspect]
     Active Substance: RIFAXIMIN
     Dosage: UNK (ADDITIONAL INFORMATION ON DRUG (FREE TEXT): DENTAL EMULSION)
     Route: 050
  956. RIFAXIMIN [Suspect]
     Active Substance: RIFAXIMIN
     Dosage: UNK (ADDITIONAL INFORMATION ON DRUG (FREE TEXT): DENTAL EMULSION)
     Route: 050
  957. RIFAXIMIN [Suspect]
     Active Substance: RIFAXIMIN
     Dosage: UNK (ADDITIONAL INFORMATION ON DRUG (FREE TEXT): DENTAL EMULSION, ADALIMUMAB SOLUTION FOR INJECTION,
     Route: 050
  958. RIFAXIMIN [Suspect]
     Active Substance: RIFAXIMIN
     Dosage: UNK (ADDITIONAL INFORMATION ON DRUG (FREE TEXT): DENTAL EMULSION, ADALIMUMAB SOLUTION FOR INJECTION,
     Route: 050
  959. RIFAXIMIN [Suspect]
     Active Substance: RIFAXIMIN
     Dosage: UNK (ADDITIONAL INFORMATION ON DRUG (FREE TEXT): DENTAL EMULSION, ADALIMUMAB SOLUTION FOR INJECTION,
     Route: 050
  960. RIFAXIMIN [Suspect]
     Active Substance: RIFAXIMIN
     Dosage: FILM COATED TABLET
     Route: 050
  961. RIFAXIMIN [Suspect]
     Active Substance: RIFAXIMIN
     Dosage: FILM COATED TABLET
     Route: 050
  962. RIFAXIMIN [Suspect]
     Active Substance: RIFAXIMIN
     Dosage: UNK UNK, UNK
     Route: 050
  963. RIFAXIMIN [Suspect]
     Active Substance: RIFAXIMIN
     Dosage: UNK (ADDITIONAL INFORMATION ON DRUG (FREE TEXT): DENTAL EMULSION, ADALIMUMAB SOLUTION FOR INJECTION,
     Route: 050
  964. RIFAXIMIN [Suspect]
     Active Substance: RIFAXIMIN
     Dosage: UNK (ADDITIONAL INFORMATION ON DRUG (FREE TEXT): DENTAL EMULSION, ADALIMUMAB SOLUTION FOR INJECTION,
     Route: 050
  965. RIFAXIMIN [Suspect]
     Active Substance: RIFAXIMIN
     Dosage: UNK (ADDITIONAL INFORMATION ON DRUG (FREE TEXT): DENTAL EMULSION)
     Route: 065
  966. RIFAXIMIN [Suspect]
     Active Substance: RIFAXIMIN
     Dosage: UNK (ADDITIONAL INFORMATION ON DRUG (FREE TEXT): DENTAL EMULSION)
     Route: 065
  967. RIFAXIMIN [Suspect]
     Active Substance: RIFAXIMIN
     Dosage: UNK (ADDITIONAL INFORMATION ON DRUG (FREE TEXT): DENTAL EMULSION)
     Route: 065
  968. RIFAXIMIN [Suspect]
     Active Substance: RIFAXIMIN
     Dosage: UNK (ADDITIONAL INFORMATION ON DRUG (FREE TEXT): DENTAL EMULSION)
     Route: 065
  969. RIFAXIMIN [Suspect]
     Active Substance: RIFAXIMIN
     Dosage: UNK (ADDITIONAL INFORMATION ON DRUG (FREE TEXT): DENTAL EMULSION)
     Route: 065
  970. RIFAXIMIN [Suspect]
     Active Substance: RIFAXIMIN
     Dosage: UNK (ADDITIONAL INFORMATION ON DRUG (FREE TEXT): DENTAL EMULSION)
     Route: 065
  971. RIFAXIMIN [Suspect]
     Active Substance: RIFAXIMIN
     Dosage: UNK (ADDITIONAL INFORMATION ON DRUG (FREE TEXT): DENTAL EMULSION)
     Route: 065
  972. RIFAXIMIN [Suspect]
     Active Substance: RIFAXIMIN
     Dosage: FILM COATED TABLET
     Route: 050
  973. RIFAXIMIN [Suspect]
     Active Substance: RIFAXIMIN
     Dosage: UNK
     Route: 065
  974. RIFAXIMIN [Suspect]
     Active Substance: RIFAXIMIN
     Dosage: UNK
     Route: 065
  975. RIFAXIMIN [Suspect]
     Active Substance: RIFAXIMIN
     Dosage: UNK
     Route: 065
  976. RIFAXIMIN [Suspect]
     Active Substance: RIFAXIMIN
     Dosage: UNK
     Route: 065
  977. RIFAXIMIN [Suspect]
     Active Substance: RIFAXIMIN
     Dosage: UNK
     Route: 065
  978. RIFAXIMIN [Suspect]
     Active Substance: RIFAXIMIN
     Dosage: UNK
     Route: 065
  979. RIFAXIMIN [Suspect]
     Active Substance: RIFAXIMIN
     Dosage: UNK
     Route: 065
  980. RIFAXIMIN [Suspect]
     Active Substance: RIFAXIMIN
     Dosage: UNK
     Route: 065
  981. RIFAXIMIN [Suspect]
     Active Substance: RIFAXIMIN
     Dosage: UNK
     Route: 065
  982. RIFAXIMIN [Suspect]
     Active Substance: RIFAXIMIN
     Dosage: UNK; ;
     Route: 050
  983. RIFAXIMIN [Suspect]
     Active Substance: RIFAXIMIN
     Dosage: UNK; ;
     Route: 050
  984. RIFAXIMIN [Suspect]
     Active Substance: RIFAXIMIN
     Dosage: UNKNOWN
     Route: 050
  985. RIFAXIMIN [Suspect]
     Active Substance: RIFAXIMIN
     Dosage: UNKNOWN
     Route: 050
  986. RIFAXIMIN [Suspect]
     Active Substance: RIFAXIMIN
     Dosage: UNKNOWN
     Route: 050
  987. RIFAXIMIN [Suspect]
     Active Substance: RIFAXIMIN
     Dosage: UNKNOWN
     Route: 050
  988. RIFAXIMIN [Suspect]
     Active Substance: RIFAXIMIN
     Dosage: UNKNOWN
     Route: 050
  989. RIFAXIMIN [Suspect]
     Active Substance: RIFAXIMIN
     Dosage: UNKNOWN
     Route: 050
  990. RIFAXIMIN [Suspect]
     Active Substance: RIFAXIMIN
     Dosage: UNKNOWN
     Route: 050
  991. RIFAXIMIN [Suspect]
     Active Substance: RIFAXIMIN
     Dosage: UNKNOWN
     Route: 050
  992. RIFAXIMIN [Suspect]
     Active Substance: RIFAXIMIN
     Dosage: UNKNOWN
     Route: 050
  993. RIFAXIMIN [Suspect]
     Active Substance: RIFAXIMIN
     Dosage: UNKNOWN
     Route: 050
  994. RIFAXIMIN [Suspect]
     Active Substance: RIFAXIMIN
     Dosage: UNKNOWN
     Route: 050
  995. RIFAXIMIN [Suspect]
     Active Substance: RIFAXIMIN
     Dosage: UNK
     Route: 065
  996. RIFAXIMIN [Suspect]
     Active Substance: RIFAXIMIN
     Dosage: FILM COATED TABLET
     Route: 065
  997. RIFAXIMIN [Suspect]
     Active Substance: RIFAXIMIN
     Dosage: UNK
  998. RIFAXIMIN [Suspect]
     Active Substance: RIFAXIMIN
     Dosage: FILM COATED TABLET
  999. RIFAXIMIN [Suspect]
     Active Substance: RIFAXIMIN
     Dosage: UNK
  1000. RIFAXIMIN [Suspect]
     Active Substance: RIFAXIMIN
     Dosage: FILM COATED TABLET
  1001. RIFAXIMIN [Suspect]
     Active Substance: RIFAXIMIN
     Indication: Product used for unknown indication
     Dosage: ADDITIONAL INFO: ROUTE:OTHER, UNK; ;
  1002. RIFAXIMIN [Suspect]
     Active Substance: RIFAXIMIN
     Dosage: UNKNOWN; OTHER
     Route: 050
  1003. RIFAXIMIN [Suspect]
     Active Substance: RIFAXIMIN
     Dosage: UNKNOWN; OTHER
  1004. RIFAXIMIN [Suspect]
     Active Substance: RIFAXIMIN
     Dosage: UNKNOWN; OTHER
  1005. RIFAXIMIN [Suspect]
     Active Substance: RIFAXIMIN
     Dosage: UNK, ADDITIONAL INFO: ADALIMUMAB SOLUTION FOR INJECTION, SINGLE DOSE PEN
     Route: 050
  1006. RIFAXIMIN [Suspect]
     Active Substance: RIFAXIMIN
     Dosage: UNK (ADDITIONAL INFORMATION ON DRUG (FREE TEXT): ADALIMUMAB SOLUTION FOR INJECTION, SINGLE DOSE PEN)
     Route: 050
  1007. RIFAXIMIN [Suspect]
     Active Substance: RIFAXIMIN
     Dosage: UNKNOWN
     Route: 050
  1008. RIFAXIMIN [Suspect]
     Active Substance: RIFAXIMIN
     Dosage: UNKNOWN
     Route: 050
  1009. RIFAXIMIN [Suspect]
     Active Substance: RIFAXIMIN
     Dosage: UNK UNK, UNK
     Route: 065
  1010. RIFAXIMIN [Suspect]
     Active Substance: RIFAXIMIN
     Dosage: UNK UNK, UNK
     Route: 065
  1011. RIFAXIMIN [Suspect]
     Active Substance: RIFAXIMIN
     Dosage: UNK UNK, UNK
     Route: 065
  1012. RIFAXIMIN [Suspect]
     Active Substance: RIFAXIMIN
     Dosage: UNK UNK, UNK
     Route: 065
  1013. RIFAXIMIN [Suspect]
     Active Substance: RIFAXIMIN
     Dosage: UNK UNK, UNK
     Route: 065
  1014. RIFAXIMIN [Suspect]
     Active Substance: RIFAXIMIN
     Dosage: UNK UNK, UNK
     Route: 065
  1015. RIFAXIMIN [Suspect]
     Active Substance: RIFAXIMIN
     Dosage: UNK UNK, UNK
     Route: 065
  1016. RIFAXIMIN [Suspect]
     Active Substance: RIFAXIMIN
     Dosage: UNK UNK, UNK
     Route: 065
  1017. RIFAXIMIN [Suspect]
     Active Substance: RIFAXIMIN
     Dosage: UNK (ADALIMUMAB SOLUTION FOR INJECTION, SINGLE DOSE PEN)
     Route: 065
  1018. RIFAXIMIN [Suspect]
     Active Substance: RIFAXIMIN
     Dosage: UNK
     Route: 065
  1019. RIFAXIMIN [Suspect]
     Active Substance: RIFAXIMIN
     Dosage: UNK
     Route: 065
  1020. RIFAXIMIN [Suspect]
     Active Substance: RIFAXIMIN
     Dosage: UNK
     Route: 065
  1021. RIFAXIMIN [Suspect]
     Active Substance: RIFAXIMIN
     Dosage: UNK
     Route: 065
  1022. RIFAXIMIN [Suspect]
     Active Substance: RIFAXIMIN
     Dosage: UNK
     Route: 065
  1023. RIFAXIMIN [Suspect]
     Active Substance: RIFAXIMIN
     Dosage: UNK
     Route: 065
  1024. RIFAXIMIN [Suspect]
     Active Substance: RIFAXIMIN
     Dosage: UNK
     Route: 050
  1025. RIFAXIMIN [Suspect]
     Active Substance: RIFAXIMIN
     Dosage: UNK
     Route: 050
  1026. RIFAXIMIN [Suspect]
     Active Substance: RIFAXIMIN
     Dosage: UNK
     Route: 050
  1027. RIFAXIMIN [Suspect]
     Active Substance: RIFAXIMIN
     Dosage: UNK
     Route: 050
  1028. RIFAXIMIN [Suspect]
     Active Substance: RIFAXIMIN
     Dosage: UNK
     Route: 050
  1029. RIFAXIMIN [Suspect]
     Active Substance: RIFAXIMIN
     Dosage: UNK
     Route: 050
  1030. RIFAXIMIN [Suspect]
     Active Substance: RIFAXIMIN
     Dosage: FILM COATED TABLET (ADDITIONAL INFORMATION ON DRUG (FREE TEXT): ADALIMUMAB SOLUTION FOR INJECTION, S
     Route: 065
  1031. RIFAXIMIN [Suspect]
     Active Substance: RIFAXIMIN
     Dosage: FILM COATED TABLET
     Route: 065
  1032. RIFAXIMIN [Suspect]
     Active Substance: RIFAXIMIN
     Dosage: FILM COATED TABLET
     Route: 065
  1033. RIFAXIMIN [Suspect]
     Active Substance: RIFAXIMIN
     Dosage: FILM COATED TABLET
     Route: 065
  1034. RIFAXIMIN [Suspect]
     Active Substance: RIFAXIMIN
     Dosage: FILM COATED TABLET
     Route: 065
  1035. RIFAXIMIN [Suspect]
     Active Substance: RIFAXIMIN
     Dosage: FILM COATED TABLET
     Route: 065
  1036. RIFAXIMIN [Suspect]
     Active Substance: RIFAXIMIN
     Dosage: FILM COATED TABLET (ADDITIONAL INFORMATION ON DRUG (FREE TEXT): ADALIMUMAB SOLUTION FOR INJECTION, S
     Route: 050
  1037. RIFAXIMIN [Suspect]
     Active Substance: RIFAXIMIN
     Dosage: FILM COATED TABLET
     Route: 065
  1038. RIFAXIMIN [Suspect]
     Active Substance: RIFAXIMIN
     Dosage: FILM COATED TABLET
     Route: 065
  1039. RIFAXIMIN [Suspect]
     Active Substance: RIFAXIMIN
     Dosage: UNK
     Route: 050
  1040. RIFAXIMIN [Suspect]
     Active Substance: RIFAXIMIN
     Dosage: UNK (ADALIMUMAB SOLUTION FOR INJECTION, SINGLE DOSE PEN)
     Route: 065
  1041. RIFAXIMIN [Suspect]
     Active Substance: RIFAXIMIN
     Dosage: UNK
     Route: 065
  1042. RIFAXIMIN [Suspect]
     Active Substance: RIFAXIMIN
     Dosage: UNK
     Route: 065
  1043. RIFAXIMIN [Suspect]
     Active Substance: RIFAXIMIN
     Dosage: UNK
     Route: 065
  1044. RIFAXIMIN [Suspect]
     Active Substance: RIFAXIMIN
     Dosage: UNK
     Route: 065
  1045. RIFAXIMIN [Suspect]
     Active Substance: RIFAXIMIN
     Dosage: UNK
     Route: 065
  1046. RIFAXIMIN [Suspect]
     Active Substance: RIFAXIMIN
     Dosage: UNK
     Route: 065
  1047. RIFAXIMIN [Suspect]
     Active Substance: RIFAXIMIN
     Dosage: UNK, OTHER (ADALIMUMAB SOLUTION FOR INJECTION, SINGLE DOSE PEN)
     Route: 065
  1048. RIFAXIMIN [Suspect]
     Active Substance: RIFAXIMIN
     Dosage: UNK, OTHER
     Route: 065
  1049. RIFAXIMIN [Suspect]
     Active Substance: RIFAXIMIN
     Dosage: UNK; ;
     Route: 050
  1050. RIFAXIMIN [Suspect]
     Active Substance: RIFAXIMIN
     Dosage: UNK; ;
     Route: 050
  1051. RIFAXIMIN [Suspect]
     Active Substance: RIFAXIMIN
     Indication: Product used for unknown indication
     Route: 050
  1052. RIFAXIMIN [Suspect]
     Active Substance: RIFAXIMIN
     Dosage: UNK, UNK, UNK
     Route: 050
  1053. RIFAXIMIN [Suspect]
     Active Substance: RIFAXIMIN
     Indication: Product used for unknown indication
     Dosage: UNK; ;
     Route: 050
  1054. RIFAXIMIN [Suspect]
     Active Substance: RIFAXIMIN
     Dosage: UNK; ;
     Route: 050
  1055. RIFAXIMIN [Suspect]
     Active Substance: RIFAXIMIN
     Dosage: UNK; ;
     Route: 050
  1056. RIFAXIMIN [Suspect]
     Active Substance: RIFAXIMIN
     Dosage: UNK; ;
     Route: 050
  1057. RIFAXIMIN [Suspect]
     Active Substance: RIFAXIMIN
     Dosage: UNK; ;
     Route: 050
  1058. RIFAXIMIN [Suspect]
     Active Substance: RIFAXIMIN
     Dosage: UNK; ;
     Route: 050
  1059. RIFAXIMIN [Suspect]
     Active Substance: RIFAXIMIN
     Dosage: UNK; ;
     Route: 050
  1060. RIFAXIMIN [Suspect]
     Active Substance: RIFAXIMIN
     Dosage: UNK; ;
     Route: 050
  1061. RIFAXIMIN [Suspect]
     Active Substance: RIFAXIMIN
     Dosage: FILM COATED TABLET
     Route: 050
  1062. RIFAXIMIN [Suspect]
     Active Substance: RIFAXIMIN
     Dosage: FILM COATED TABLET
     Route: 050
  1063. RIFAXIMIN [Suspect]
     Active Substance: RIFAXIMIN
     Dosage: FILM COATED TABLET
     Route: 050
  1064. RIFAXIMIN [Suspect]
     Active Substance: RIFAXIMIN
     Dosage: UNK
     Route: 065
  1065. RIFAXIMIN [Suspect]
     Active Substance: RIFAXIMIN
     Dosage: UNK
     Route: 065
  1066. RIFAXIMIN [Suspect]
     Active Substance: RIFAXIMIN
     Dosage: UNK
     Route: 065
  1067. RIFAXIMIN [Suspect]
     Active Substance: RIFAXIMIN
     Dosage: UNK
     Route: 065
  1068. RIFAXIMIN [Suspect]
     Active Substance: RIFAXIMIN
     Dosage: UNK
     Route: 065
  1069. RIFAXIMIN [Suspect]
     Active Substance: RIFAXIMIN
     Dosage: UNK
     Route: 065
  1070. RIFAXIMIN [Suspect]
     Active Substance: RIFAXIMIN
     Dosage: UNK
     Route: 065
  1071. RIFAXIMIN [Suspect]
     Active Substance: RIFAXIMIN
     Dosage: UNK
  1072. RIFAXIMIN [Suspect]
     Active Substance: RIFAXIMIN
     Dosage: UNK
  1073. RIFAXIMIN [Suspect]
     Active Substance: RIFAXIMIN
     Dosage: UNK
  1074. RIFAXIMIN [Suspect]
     Active Substance: RIFAXIMIN
     Dosage: UNK
  1075. RIFAXIMIN [Suspect]
     Active Substance: RIFAXIMIN
     Dosage: UNK
  1076. RIFAXIMIN [Suspect]
     Active Substance: RIFAXIMIN
     Dosage: UNK
  1077. RIFAXIMIN [Suspect]
     Active Substance: RIFAXIMIN
     Dosage: UNK
  1078. RIFAXIMIN [Suspect]
     Active Substance: RIFAXIMIN
     Dosage: UNK
  1079. RIFAXIMIN [Suspect]
     Active Substance: RIFAXIMIN
     Dosage: UNK
  1080. RIFAXIMIN [Suspect]
     Active Substance: RIFAXIMIN
     Indication: Product used for unknown indication
     Dosage: UNK; ;
     Route: 050
  1081. RIFAXIMIN [Suspect]
     Active Substance: RIFAXIMIN
     Indication: Product used for unknown indication
     Dosage: FILM COATED TABLET
     Route: 050
  1082. RIFAXIMIN [Suspect]
     Active Substance: RIFAXIMIN
     Dosage: UNK
     Route: 050
  1083. RIFAXIMIN [Suspect]
     Active Substance: RIFAXIMIN
     Dosage: FILM COATED TABLET
     Route: 050
  1084. RIFAXIMIN [Suspect]
     Active Substance: RIFAXIMIN
     Dosage: FILM COATED TABLET
     Route: 050
  1085. RIFAXIMIN [Suspect]
     Active Substance: RIFAXIMIN
     Dosage: UNK UNK, UNK
     Route: 050
  1086. RIFAXIMIN [Suspect]
     Active Substance: RIFAXIMIN
     Dosage: FILM COATED TABLET
     Route: 050
  1087. RIFAXIMIN [Suspect]
     Active Substance: RIFAXIMIN
     Dosage: FILM COATED TABLET
     Route: 050
  1088. RIFAXIMIN [Suspect]
     Active Substance: RIFAXIMIN
     Dosage: FILM COATED TABLET
     Route: 050
  1089. RIFAXIMIN [Suspect]
     Active Substance: RIFAXIMIN
     Dosage: FILM COATED TABLET
     Route: 050
  1090. RIFAXIMIN [Suspect]
     Active Substance: RIFAXIMIN
     Dosage: FILM COATED TABLET
     Route: 050
  1091. RIFAXIMIN [Suspect]
     Active Substance: RIFAXIMIN
     Dosage: FILM COATED TABLET
     Route: 050
  1092. RIFAXIMIN [Suspect]
     Active Substance: RIFAXIMIN
     Dosage: FILM COATED TABLET
     Route: 050
  1093. RIFAXIMIN [Suspect]
     Active Substance: RIFAXIMIN
     Dosage: FILM COATED TABLET
     Route: 050
  1094. RIFAXIMIN [Suspect]
     Active Substance: RIFAXIMIN
     Dosage: FILM COATED TABLET
     Route: 050
  1095. RIFAXIMIN [Suspect]
     Active Substance: RIFAXIMIN
     Dosage: FILM COATED TABLET
     Route: 050
  1096. RIFAXIMIN [Suspect]
     Active Substance: RIFAXIMIN
     Dosage: FILM COATED TABLET
     Route: 050
  1097. RIFAXIMIN [Suspect]
     Active Substance: RIFAXIMIN
     Dosage: FILM COATED TABLET
     Route: 050
  1098. RIFAXIMIN [Suspect]
     Active Substance: RIFAXIMIN
     Dosage: FILM COATED TABLET
     Route: 050
  1099. RIFAXIMIN [Suspect]
     Active Substance: RIFAXIMIN
     Dosage: FILM COATED TABLET
     Route: 050
  1100. RIFAXIMIN [Suspect]
     Active Substance: RIFAXIMIN
     Dosage: FILM COATED TABLET
     Route: 050
  1101. RIFAXIMIN [Suspect]
     Active Substance: RIFAXIMIN
     Dosage: FILM COATED TABLET
     Route: 050
  1102. RIFAXIMIN [Suspect]
     Active Substance: RIFAXIMIN
     Dosage: FILM COATED TABLET
     Route: 050
  1103. RIFAXIMIN [Suspect]
     Active Substance: RIFAXIMIN
     Indication: Product used for unknown indication
     Dosage: UNK
  1104. RIFAXIMIN [Suspect]
     Active Substance: RIFAXIMIN
     Indication: Product used for unknown indication
     Dosage: UNKNOWN
     Route: 050
  1105. RIFAXIMIN [Suspect]
     Active Substance: RIFAXIMIN
     Dosage: UNKNOWN
     Route: 050
  1106. RIFAXIMIN [Suspect]
     Active Substance: RIFAXIMIN
     Dosage: UNKNOWN
     Route: 050
  1107. RIFAXIMIN [Suspect]
     Active Substance: RIFAXIMIN
     Dosage: UNKNOWN
     Route: 050
  1108. RIFAXIMIN [Suspect]
     Active Substance: RIFAXIMIN
     Dosage: UNK; ADDITIONAL INFORMATION ON DRUG (FREE TEXT): ADALIMUMAB SOLUTION FOR INJECTION, SINGLE DOSE PEN
     Route: 050
  1109. RIFAXIMIN [Suspect]
     Active Substance: RIFAXIMIN
     Dosage: UNK
     Route: 050
  1110. RIFAXIMIN [Suspect]
     Active Substance: RIFAXIMIN
     Dosage: UNK
     Route: 050
  1111. RIFAXIMIN [Suspect]
     Active Substance: RIFAXIMIN
     Dosage: FILM COATED TABLET
     Route: 065
  1112. RIFAXIMIN [Suspect]
     Active Substance: RIFAXIMIN
     Dosage: UNK, ADDITIONAL INFORMATION ON DRUG (FREE TEXT): DENTAL EMULSION, ADALIMUMAB SOLUTION FOR INJECTION,
     Route: 050
  1113. RIFAXIMIN [Suspect]
     Active Substance: RIFAXIMIN
     Dosage: UNK, ADDITIONAL INFORMATION ON DRUG (FREE TEXT): DENTAL EMULSION, ADALIMUMAB SOLUTION FOR INJECTION,
     Route: 050
  1114. RIFAXIMIN [Suspect]
     Active Substance: RIFAXIMIN
     Dosage: UNK, ADDITIONAL INFORMATION ON DRUG (FREE TEXT): DENTAL EMULSION, ADALIMUMAB SOLUTION FOR INJECTION,
     Route: 050
  1115. RIFAXIMIN [Suspect]
     Active Substance: RIFAXIMIN
     Dosage: UNK, ADDITIONAL INFORMATION ON DRUG (FREE TEXT): DENTAL EMULSION, ADALIMUMAB SOLUTION FOR INJECTION,
     Route: 050
  1116. RIFAXIMIN [Suspect]
     Active Substance: RIFAXIMIN
     Dosage: UNK, ADDITIONAL INFORMATION ON DRUG (FREE TEXT): DENTAL EMULSION, ADALIMUMAB SOLUTION FOR INJECTION,
     Route: 050
  1117. RIFAXIMIN [Suspect]
     Active Substance: RIFAXIMIN
     Dosage: UNK, ADDITIONAL INFORMATION ON DRUG (FREE TEXT): DENTAL EMULSION, ADALIMUMAB SOLUTION FOR INJECTION,
     Route: 050
  1118. RIFAXIMIN [Suspect]
     Active Substance: RIFAXIMIN
     Dosage: UNK, ADDITIONAL INFORMATION ON DRUG (FREE TEXT): DENTAL EMULSION, ADALIMUMAB SOLUTION FOR INJECTION,
     Route: 050
  1119. RIFAXIMIN [Suspect]
     Active Substance: RIFAXIMIN
     Dosage: UNK, ADDITIONAL INFORMATION ON DRUG (FREE TEXT): DENTAL EMULSION, ADALIMUMAB SOLUTION FOR INJECTION,
     Route: 050
  1120. RIFAXIMIN [Suspect]
     Active Substance: RIFAXIMIN
     Dosage: UNK, ADDITIONAL INFORMATION ON DRUG (FREE TEXT): DENTAL EMULSION, ADALIMUMAB SOLUTION FOR INJECTION,
     Route: 050
  1121. RIFAXIMIN [Suspect]
     Active Substance: RIFAXIMIN
     Dosage: UNK, ADDITIONAL INFORMATION ON DRUG (FREE TEXT): DENTAL EMULSION, ADALIMUMAB SOLUTION FOR INJECTION,
     Route: 050
  1122. RIFAXIMIN [Suspect]
     Active Substance: RIFAXIMIN
     Dosage: UNK, ADDITIONAL INFORMATION ON DRUG (FREE TEXT): DENTAL EMULSION, ADALIMUMAB SOLUTION FOR INJECTION,
     Route: 050
  1123. RIFAXIMIN [Suspect]
     Active Substance: RIFAXIMIN
     Dosage: UNK, ADDITIONAL INFORMATION ON DRUG (FREE TEXT): DENTAL EMULSION, ADALIMUMAB SOLUTION FOR INJECTION,
     Route: 050
  1124. RIFAXIMIN [Suspect]
     Active Substance: RIFAXIMIN
     Dosage: UNK, ADDITIONAL INFORMATION ON DRUG (FREE TEXT): DENTAL EMULSION, ADALIMUMAB SOLUTION FOR INJECTION,
     Route: 050
  1125. RIFAXIMIN [Suspect]
     Active Substance: RIFAXIMIN
     Dosage: UNK, ADDITIONAL INFORMATION ON DRUG (FREE TEXT): DENTAL EMULSION, ADALIMUMAB SOLUTION FOR INJECTION,
     Route: 050
  1126. RIFAXIMIN [Suspect]
     Active Substance: RIFAXIMIN
     Dosage: UNK, ADDITIONAL INFORMATION ON DRUG (FREE TEXT): DENTAL EMULSION, ADALIMUMAB SOLUTION FOR INJECTION,
     Route: 050
  1127. VEDOLIZUMAB [Suspect]
     Active Substance: VEDOLIZUMAB
     Indication: Crohn^s disease
     Dosage: UNK
     Route: 065
     Dates: start: 20211112
  1128. VEDOLIZUMAB [Suspect]
     Active Substance: VEDOLIZUMAB
     Indication: Crohn^s disease
     Dosage: UNK (ADALIMUMAB SOLUTION FOR INJECTION, SINGLE DOSE PEN)
  1129. VEDOLIZUMAB [Suspect]
     Active Substance: VEDOLIZUMAB
     Indication: Crohn^s disease
     Dosage: UNK; ADDITIONAL INFO: ROUTE:OTHER ROUTE:OTHER ROUTE:OTHER ROUTE:
  1130. VEDOLIZUMAB [Suspect]
     Active Substance: VEDOLIZUMAB
     Indication: Crohn^s disease
     Dosage: UNK; ADDITIONAL INFO: ROUTE:OTHER ROUTE:
     Route: 050
  1131. VEDOLIZUMAB [Suspect]
     Active Substance: VEDOLIZUMAB
     Indication: Product used for unknown indication
     Dosage: UNKNOWN; ADDITIONAL INFO: ROUTE:OTHER ROUTE:
     Route: 050
  1132. VEDOLIZUMAB [Suspect]
     Active Substance: VEDOLIZUMAB
     Dosage: UNKNOWN; OTHER
     Route: 050
  1133. VEDOLIZUMAB [Suspect]
     Active Substance: VEDOLIZUMAB
     Dosage: UNKNOWN; OTHER
     Route: 050
  1134. VEDOLIZUMAB [Suspect]
     Active Substance: VEDOLIZUMAB
     Dosage: UNKNOWN; OTHER
     Route: 050
  1135. VEDOLIZUMAB [Suspect]
     Active Substance: VEDOLIZUMAB
     Dosage: UNK
     Route: 050
  1136. VEDOLIZUMAB [Suspect]
     Active Substance: VEDOLIZUMAB
     Dosage: UNK
     Route: 050
  1137. VEDOLIZUMAB [Suspect]
     Active Substance: VEDOLIZUMAB
     Dosage: UNK
     Route: 050
  1138. VEDOLIZUMAB [Suspect]
     Active Substance: VEDOLIZUMAB
     Dosage: UNK
     Route: 050
  1139. VEDOLIZUMAB [Suspect]
     Active Substance: VEDOLIZUMAB
     Dosage: UNK
     Route: 050
  1140. VEDOLIZUMAB [Suspect]
     Active Substance: VEDOLIZUMAB
     Dosage: UNK
     Route: 050
  1141. VEDOLIZUMAB [Suspect]
     Active Substance: VEDOLIZUMAB
     Dosage: UNK (ADALIMUMAB SOLUTION FOR INJECTION, SINGLE DOSE PEN)
     Route: 050
     Dates: start: 20211112
  1142. VEDOLIZUMAB [Suspect]
     Active Substance: VEDOLIZUMAB
     Dosage: UNK (ADALIMUMAB SOLUTION FOR INJECTION, SINGLE DOSE PEN)
     Route: 050
  1143. VEDOLIZUMAB [Suspect]
     Active Substance: VEDOLIZUMAB
     Dosage: UNK
     Route: 050
  1144. VEDOLIZUMAB [Suspect]
     Active Substance: VEDOLIZUMAB
     Dosage: UNK
     Route: 065
     Dates: start: 20211112
  1145. VEDOLIZUMAB [Suspect]
     Active Substance: VEDOLIZUMAB
     Dosage: UNK UNK UNK
     Route: 065
  1146. VEDOLIZUMAB [Suspect]
     Active Substance: VEDOLIZUMAB
     Dosage: UNK UNK UNK
     Route: 065
  1147. VEDOLIZUMAB [Suspect]
     Active Substance: VEDOLIZUMAB
     Dosage: UNK UNK UNK
     Route: 065
  1148. VEDOLIZUMAB [Suspect]
     Active Substance: VEDOLIZUMAB
     Dosage: UNK UNK UNK
     Route: 065
  1149. VEDOLIZUMAB [Suspect]
     Active Substance: VEDOLIZUMAB
     Dosage: UNK UNK UNK
     Route: 065
  1150. VEDOLIZUMAB [Suspect]
     Active Substance: VEDOLIZUMAB
     Dosage: UNK UNK UNK
     Route: 065
  1151. VEDOLIZUMAB [Suspect]
     Active Substance: VEDOLIZUMAB
     Dosage: UNK UNK UNK
     Route: 065
  1152. VEDOLIZUMAB [Suspect]
     Active Substance: VEDOLIZUMAB
     Dosage: UNK UNK UNK
     Route: 065
  1153. VEDOLIZUMAB [Suspect]
     Active Substance: VEDOLIZUMAB
     Dosage: UNK UNK UNK
     Route: 065
  1154. VEDOLIZUMAB [Suspect]
     Active Substance: VEDOLIZUMAB
     Dosage: UNK UNK UNK
     Route: 065
  1155. VEDOLIZUMAB [Suspect]
     Active Substance: VEDOLIZUMAB
     Dosage: UNK UNK UNK
     Route: 065
  1156. VEDOLIZUMAB [Suspect]
     Active Substance: VEDOLIZUMAB
     Dosage: UNK UNK UNK
     Route: 065
  1157. VEDOLIZUMAB [Suspect]
     Active Substance: VEDOLIZUMAB
     Dosage: SOLUTION FOR INJECTION
     Route: 065
  1158. VEDOLIZUMAB [Suspect]
     Active Substance: VEDOLIZUMAB
     Dosage: SOLUTION FOR INJECTION
     Route: 065
  1159. VEDOLIZUMAB [Suspect]
     Active Substance: VEDOLIZUMAB
     Dosage: SOLUTION FOR INJECTION
     Route: 065
  1160. VEDOLIZUMAB [Suspect]
     Active Substance: VEDOLIZUMAB
     Dosage: SOLUTION FOR INJECTION
     Route: 065
  1161. VEDOLIZUMAB [Suspect]
     Active Substance: VEDOLIZUMAB
     Dosage: SOLUTION FOR INJECTION
     Route: 065
  1162. VEDOLIZUMAB [Suspect]
     Active Substance: VEDOLIZUMAB
     Dosage: SOLUTION FOR INJECTION
     Route: 065
  1163. VEDOLIZUMAB [Suspect]
     Active Substance: VEDOLIZUMAB
     Dosage: SOLUTION FOR INJECTION
     Route: 065
  1164. VEDOLIZUMAB [Suspect]
     Active Substance: VEDOLIZUMAB
     Dosage: SOLUTION FOR INJECTION
     Route: 065
  1165. VEDOLIZUMAB [Suspect]
     Active Substance: VEDOLIZUMAB
     Dosage: SOLUTION FOR INJECTION
     Route: 065
  1166. VEDOLIZUMAB [Suspect]
     Active Substance: VEDOLIZUMAB
     Dosage: SOLUTION FOR INJECTION
     Route: 065
  1167. VEDOLIZUMAB [Suspect]
     Active Substance: VEDOLIZUMAB
     Dosage: SOLUTION FOR INJECTION
     Route: 065
  1168. VEDOLIZUMAB [Suspect]
     Active Substance: VEDOLIZUMAB
     Dosage: SOLUTION FOR INJECTION
     Route: 065
  1169. VEDOLIZUMAB [Suspect]
     Active Substance: VEDOLIZUMAB
     Dosage: SOLUTION FOR INJECTION
     Route: 065
  1170. VEDOLIZUMAB [Suspect]
     Active Substance: VEDOLIZUMAB
     Dosage: SOLUTION FOR INJECTION
     Route: 065
  1171. VEDOLIZUMAB [Suspect]
     Active Substance: VEDOLIZUMAB
     Dosage: SOLUTION FOR INJECTION
     Route: 065
  1172. VEDOLIZUMAB [Suspect]
     Active Substance: VEDOLIZUMAB
     Dosage: SOLUTION FOR INJECTION
     Route: 065
  1173. VEDOLIZUMAB [Suspect]
     Active Substance: VEDOLIZUMAB
     Dosage: SOLUTION FOR INJECTION
     Route: 065
  1174. VEDOLIZUMAB [Suspect]
     Active Substance: VEDOLIZUMAB
     Dosage: SOLUTION FOR INJECTION
     Route: 065
  1175. VEDOLIZUMAB [Suspect]
     Active Substance: VEDOLIZUMAB
     Dosage: SOLUTION FOR INJECTION
     Route: 065
  1176. VEDOLIZUMAB [Suspect]
     Active Substance: VEDOLIZUMAB
     Dosage: SOLUTION FOR INJECTION
     Route: 065
  1177. VEDOLIZUMAB [Suspect]
     Active Substance: VEDOLIZUMAB
     Dosage: SOLUTION FOR INJECTION
     Route: 050
  1178. VEDOLIZUMAB [Suspect]
     Active Substance: VEDOLIZUMAB
     Dosage: UNK
     Route: 065
  1179. VEDOLIZUMAB [Suspect]
     Active Substance: VEDOLIZUMAB
     Dosage: SOLUTION FOR INJECTION
  1180. VEDOLIZUMAB [Suspect]
     Active Substance: VEDOLIZUMAB
     Dosage: UNK
  1181. VEDOLIZUMAB [Suspect]
     Active Substance: VEDOLIZUMAB
     Dosage: SOLUTION FOR INJECTION
  1182. VEDOLIZUMAB [Suspect]
     Active Substance: VEDOLIZUMAB
     Dosage: UNK
  1183. VEDOLIZUMAB [Suspect]
     Active Substance: VEDOLIZUMAB
     Indication: Crohn^s disease
     Dosage: SOLUTION FOR INJECTION, ADDITIONAL INFORMATION ON DRUG (FREE TEXT): OROMUCOSAL SUSPENSION ADALIMUMAB
     Route: 050
  1184. VEDOLIZUMAB [Suspect]
     Active Substance: VEDOLIZUMAB
     Dosage: SOLUTION FOR INJECTION
     Route: 050
  1185. VEDOLIZUMAB [Suspect]
     Active Substance: VEDOLIZUMAB
     Dosage: SOLUTION FOR INJECTION
     Route: 050
  1186. VEDOLIZUMAB [Suspect]
     Active Substance: VEDOLIZUMAB
     Dosage: SOLUTION FOR INJECTION
     Route: 050
  1187. VEDOLIZUMAB [Suspect]
     Active Substance: VEDOLIZUMAB
     Dosage: SOLUTION FOR INJECTION
     Route: 050
  1188. VEDOLIZUMAB [Suspect]
     Active Substance: VEDOLIZUMAB
     Dosage: SOLUTION FOR INJECTION
     Route: 050
  1189. VEDOLIZUMAB [Suspect]
     Active Substance: VEDOLIZUMAB
     Dosage: UNK, ADDITIONAL INFORMATION ON DRUG (FREE TEXT): OROMUCOSAL SUSPENSION ADALIMUMAB SOLUTION FOR INJEC
     Route: 050
  1190. VEDOLIZUMAB [Suspect]
     Active Substance: VEDOLIZUMAB
     Dosage: UNK, ADDITIONAL INFORMATION ON DRUG (FREE TEXT): OROMUCOSAL SUSPENSION ADALIMUMAB SOLUTION FOR INJEC
     Route: 050
  1191. VEDOLIZUMAB [Suspect]
     Active Substance: VEDOLIZUMAB
     Dosage: UNK, ADDITIONAL INFORMATION ON DRUG (FREE TEXT): OROMUCOSAL SUSPENSION ADALIMUMAB SOLUTION FOR INJEC
     Route: 050
  1192. VEDOLIZUMAB [Suspect]
     Active Substance: VEDOLIZUMAB
     Dosage: UNK, ADALIMUMAB SOLUTION FOR INJECTION, SINGLE DOSE PEN OROMUCOSAL SUSPENSION
     Route: 050
  1193. VEDOLIZUMAB [Suspect]
     Active Substance: VEDOLIZUMAB
     Dosage: UNK, ADDITIONAL INFORMATION ON DRUG (FREE TEXT): OROMUCOSAL SUSPENSION ADALIMUMAB SOLUTION FOR INJEC
     Route: 050
  1194. VEDOLIZUMAB [Suspect]
     Active Substance: VEDOLIZUMAB
     Dosage: UNK, ADDITIONAL INFORMATION ON DRUG (FREE TEXT): OROMUCOSAL SUSPENSION ADALIMUMAB SOLUTION FOR INJEC
     Route: 050
  1195. VEDOLIZUMAB [Suspect]
     Active Substance: VEDOLIZUMAB
     Dosage: UNK, ADDITIONAL INFORMATION ON DRUG (FREE TEXT): OROMUCOSAL SUSPENSION ADALIMUMAB SOLUTION FOR INJEC
     Route: 050
  1196. VEDOLIZUMAB [Suspect]
     Active Substance: VEDOLIZUMAB
     Dosage: UNK
     Route: 050
  1197. VEDOLIZUMAB [Suspect]
     Active Substance: VEDOLIZUMAB
     Dosage: UNK, ADALIMUMAB SOLUTION FOR INJECTION, SINGLE DOSE PEN
     Route: 065
     Dates: start: 20211112
  1198. VEDOLIZUMAB [Suspect]
     Active Substance: VEDOLIZUMAB
     Dosage: UNK, ADDITIONAL INFORMATION ON DRUG (FREE TEXT): OROMUCOSAL SUSPENSION ADALIMUMAB SOLUTION FOR INJEC
     Route: 065
  1199. VEDOLIZUMAB [Suspect]
     Active Substance: VEDOLIZUMAB
     Dosage: UNK, ADDITIONAL INFORMATION ON DRUG (FREE TEXT): OROMUCOSAL SUSPENSION ADALIMUMAB SOLUTION FOR INJEC
     Route: 065
  1200. VEDOLIZUMAB [Suspect]
     Active Substance: VEDOLIZUMAB
     Dosage: UNK, ADDITIONAL INFORMATION ON DRUG (FREE TEXT): OROMUCOSAL SUSPENSION ADALIMUMAB SOLUTION FOR INJEC
     Route: 065
  1201. VEDOLIZUMAB [Suspect]
     Active Substance: VEDOLIZUMAB
     Dosage: UNK, ADDITIONAL INFORMATION ON DRUG (FREE TEXT): OROMUCOSAL SUSPENSION ADALIMUMAB SOLUTION FOR INJEC
     Route: 065
  1202. VEDOLIZUMAB [Suspect]
     Active Substance: VEDOLIZUMAB
     Dosage: UNK, ADDITIONAL INFORMATION ON DRUG (FREE TEXT): OROMUCOSAL SUSPENSION ADALIMUMAB SOLUTION FOR INJEC
     Route: 065
  1203. VEDOLIZUMAB [Suspect]
     Active Substance: VEDOLIZUMAB
     Dosage: UNK, ADDITIONAL INFORMATION ON DRUG (FREE TEXT): OROMUCOSAL SUSPENSION ADALIMUMAB SOLUTION FOR INJEC
     Route: 065
  1204. VEDOLIZUMAB [Suspect]
     Active Substance: VEDOLIZUMAB
     Dosage: UNK, ADDITIONAL INFORMATION ON DRUG (FREE TEXT): OROMUCOSAL SUSPENSION ADALIMUMAB SOLUTION FOR INJEC
     Route: 065
  1205. VEDOLIZUMAB [Suspect]
     Active Substance: VEDOLIZUMAB
     Dosage: UNK, ADDITIONAL INFORMATION ON DRUG (FREE TEXT): OROMUCOSAL SUSPENSION ADALIMUMAB SOLUTION FOR INJEC
     Route: 065
  1206. VEDOLIZUMAB [Suspect]
     Active Substance: VEDOLIZUMAB
     Dosage: UNK, ADDITIONAL INFORMATION ON DRUG (FREE TEXT): OROMUCOSAL SUSPENSION ADALIMUMAB SOLUTION FOR INJEC
     Route: 065
  1207. VEDOLIZUMAB [Suspect]
     Active Substance: VEDOLIZUMAB
     Dosage: UNK, ADDITIONAL INFORMATION ON DRUG (FREE TEXT): OROMUCOSAL SUSPENSION ADALIMUMAB SOLUTION FOR INJEC
     Route: 065
  1208. VEDOLIZUMAB [Suspect]
     Active Substance: VEDOLIZUMAB
     Dosage: UNK, ADDITIONAL INFORMATION ON DRUG (FREE TEXT): OROMUCOSAL SUSPENSION ADALIMUMAB SOLUTION FOR INJEC
     Route: 065
  1209. VEDOLIZUMAB [Suspect]
     Active Substance: VEDOLIZUMAB
     Dosage: UNK, ADDITIONAL INFORMATION ON DRUG (FREE TEXT): OROMUCOSAL SUSPENSION ADALIMUMAB SOLUTION FOR INJEC
     Route: 065
  1210. VEDOLIZUMAB [Suspect]
     Active Substance: VEDOLIZUMAB
     Dosage: UNK, ADDITIONAL INFORMATION ON DRUG (FREE TEXT): OROMUCOSAL SUSPENSION ADALIMUMAB SOLUTION FOR INJEC
     Route: 065
  1211. VEDOLIZUMAB [Suspect]
     Active Substance: VEDOLIZUMAB
     Dosage: UNK, ADDITIONAL INFORMATION ON DRUG (FREE TEXT): OROMUCOSAL SUSPENSION ADALIMUMAB SOLUTION FOR INJEC
     Route: 065
  1212. VEDOLIZUMAB [Suspect]
     Active Substance: VEDOLIZUMAB
     Dosage: UNKNOWN
     Route: 050
  1213. VEDOLIZUMAB [Suspect]
     Active Substance: VEDOLIZUMAB
     Dosage: UNKNOWN
     Route: 050
  1214. VEDOLIZUMAB [Suspect]
     Active Substance: VEDOLIZUMAB
     Dosage: UNKNOWN
     Route: 050
  1215. VEDOLIZUMAB [Suspect]
     Active Substance: VEDOLIZUMAB
     Dosage: UNKNOWN
     Route: 050
  1216. VEDOLIZUMAB [Suspect]
     Active Substance: VEDOLIZUMAB
     Dosage: UNKNOWN
     Route: 050
  1217. VEDOLIZUMAB [Suspect]
     Active Substance: VEDOLIZUMAB
     Dosage: UNKNOWN
     Route: 050
  1218. VEDOLIZUMAB [Suspect]
     Active Substance: VEDOLIZUMAB
     Dosage: UNKNOWN
     Route: 050
  1219. VEDOLIZUMAB [Suspect]
     Active Substance: VEDOLIZUMAB
     Dosage: UNKNOWN
     Route: 050
  1220. VEDOLIZUMAB [Suspect]
     Active Substance: VEDOLIZUMAB
     Dosage: UNKNOWN
     Route: 050
  1221. VEDOLIZUMAB [Suspect]
     Active Substance: VEDOLIZUMAB
     Dosage: UNK, SINGLE DOSE PEN
     Route: 050
  1222. VEDOLIZUMAB [Suspect]
     Active Substance: VEDOLIZUMAB
     Dosage: UNK (SOLUTION FOR INJECTION)
     Route: 065
  1223. VEDOLIZUMAB [Suspect]
     Active Substance: VEDOLIZUMAB
     Dosage: UNKNOWN; ;
     Route: 050
  1224. VEDOLIZUMAB [Suspect]
     Active Substance: VEDOLIZUMAB
     Dosage: UNKNOWN; ;
     Route: 050
  1225. VEDOLIZUMAB [Suspect]
     Active Substance: VEDOLIZUMAB
     Dosage: UNKNOWN; ;
     Route: 050
  1226. VEDOLIZUMAB [Suspect]
     Active Substance: VEDOLIZUMAB
     Dosage: UNKNOWN; ;
     Route: 050
  1227. VEDOLIZUMAB [Suspect]
     Active Substance: VEDOLIZUMAB
     Dosage: UNKNOWN; ;
     Route: 050
  1228. VEDOLIZUMAB [Suspect]
     Active Substance: VEDOLIZUMAB
     Dosage: UNKNOWN; ;
     Route: 050
  1229. VEDOLIZUMAB [Suspect]
     Active Substance: VEDOLIZUMAB
     Dosage: UNK; ;
     Route: 050
  1230. VEDOLIZUMAB [Suspect]
     Active Substance: VEDOLIZUMAB
     Dosage: UNK; ;
     Route: 050
  1231. VEDOLIZUMAB [Suspect]
     Active Substance: VEDOLIZUMAB
     Dosage: UNK; ;
     Route: 050
  1232. VEDOLIZUMAB [Suspect]
     Active Substance: VEDOLIZUMAB
     Dosage: UNK; ;
     Route: 050
  1233. VEDOLIZUMAB [Suspect]
     Active Substance: VEDOLIZUMAB
     Indication: Crohn^s disease
     Dosage: SOLUTION FOR INJECTION
     Route: 065
  1234. VEDOLIZUMAB [Suspect]
     Active Substance: VEDOLIZUMAB
     Indication: Crohn^s disease
     Dosage: UNK
     Route: 065
  1235. VEDOLIZUMAB [Suspect]
     Active Substance: VEDOLIZUMAB
     Dosage: UNK
     Route: 065
  1236. VEDOLIZUMAB [Suspect]
     Active Substance: VEDOLIZUMAB
     Dosage: UNK
     Route: 065
  1237. VEDOLIZUMAB [Suspect]
     Active Substance: VEDOLIZUMAB
     Dosage: UNK
     Route: 065
  1238. VEDOLIZUMAB [Suspect]
     Active Substance: VEDOLIZUMAB
     Dosage: UNK
     Route: 065
  1239. VEDOLIZUMAB [Suspect]
     Active Substance: VEDOLIZUMAB
     Dosage: UNK
     Route: 065
  1240. VEDOLIZUMAB [Suspect]
     Active Substance: VEDOLIZUMAB
     Dosage: UNK
     Route: 065
  1241. VEDOLIZUMAB [Suspect]
     Active Substance: VEDOLIZUMAB
     Dosage: UNK
     Route: 065
  1242. VEDOLIZUMAB [Suspect]
     Active Substance: VEDOLIZUMAB
     Dosage: UNK
     Route: 065
  1243. VEDOLIZUMAB [Suspect]
     Active Substance: VEDOLIZUMAB
     Dosage: UNK
     Route: 065
  1244. VEDOLIZUMAB [Suspect]
     Active Substance: VEDOLIZUMAB
     Dosage: UNK
     Route: 065
  1245. VEDOLIZUMAB [Suspect]
     Active Substance: VEDOLIZUMAB
     Dosage: UNK
     Route: 065
  1246. VEDOLIZUMAB [Suspect]
     Active Substance: VEDOLIZUMAB
     Dosage: UNK
     Route: 065
  1247. VEDOLIZUMAB [Suspect]
     Active Substance: VEDOLIZUMAB
     Dosage: UNK
     Route: 065
  1248. VEDOLIZUMAB [Suspect]
     Active Substance: VEDOLIZUMAB
     Dosage: UNK, OTHER
     Route: 065
  1249. VEDOLIZUMAB [Suspect]
     Active Substance: VEDOLIZUMAB
     Dosage: UNK, OTHER
     Route: 065
  1250. VEDOLIZUMAB [Suspect]
     Active Substance: VEDOLIZUMAB
     Dosage: UNK, OTHER
     Route: 065
  1251. VEDOLIZUMAB [Suspect]
     Active Substance: VEDOLIZUMAB
     Dosage: UNK, OTHER
     Route: 065
  1252. VEDOLIZUMAB [Suspect]
     Active Substance: VEDOLIZUMAB
     Dosage: UNK, OTHER
     Route: 065
  1253. VEDOLIZUMAB [Suspect]
     Active Substance: VEDOLIZUMAB
     Dosage: UNK, OTHER
     Route: 065
  1254. VEDOLIZUMAB [Suspect]
     Active Substance: VEDOLIZUMAB
     Dosage: UNK
     Route: 050
  1255. VEDOLIZUMAB [Suspect]
     Active Substance: VEDOLIZUMAB
     Dosage: UNK
  1256. VEDOLIZUMAB [Suspect]
     Active Substance: VEDOLIZUMAB
     Dosage: UNK
  1257. VEDOLIZUMAB [Suspect]
     Active Substance: VEDOLIZUMAB
     Dosage: UNK
  1258. VEDOLIZUMAB [Suspect]
     Active Substance: VEDOLIZUMAB
     Dosage: UNK
  1259. VEDOLIZUMAB [Suspect]
     Active Substance: VEDOLIZUMAB
     Dosage: UNK
  1260. VEDOLIZUMAB [Suspect]
     Active Substance: VEDOLIZUMAB
     Dosage: UNK
  1261. VEDOLIZUMAB [Suspect]
     Active Substance: VEDOLIZUMAB
     Dosage: UNK
  1262. VEDOLIZUMAB [Suspect]
     Active Substance: VEDOLIZUMAB
     Dosage: UNK
  1263. VEDOLIZUMAB [Suspect]
     Active Substance: VEDOLIZUMAB
     Dosage: UNK
  1264. VEDOLIZUMAB [Suspect]
     Active Substance: VEDOLIZUMAB
     Dosage: UNK
  1265. VEDOLIZUMAB [Suspect]
     Active Substance: VEDOLIZUMAB
     Dosage: UNK
  1266. VEDOLIZUMAB [Suspect]
     Active Substance: VEDOLIZUMAB
     Dosage: UNK
  1267. VEDOLIZUMAB [Suspect]
     Active Substance: VEDOLIZUMAB
     Dosage: UNK
  1268. VEDOLIZUMAB [Suspect]
     Active Substance: VEDOLIZUMAB
     Dosage: UNK
  1269. VEDOLIZUMAB [Suspect]
     Active Substance: VEDOLIZUMAB
     Dosage: UNK
  1270. VEDOLIZUMAB [Suspect]
     Active Substance: VEDOLIZUMAB
     Dosage: UNK
  1271. VEDOLIZUMAB [Suspect]
     Active Substance: VEDOLIZUMAB
     Dosage: UNK
  1272. VEDOLIZUMAB [Suspect]
     Active Substance: VEDOLIZUMAB
     Dosage: UNK
  1273. VEDOLIZUMAB [Suspect]
     Active Substance: VEDOLIZUMAB
     Dosage: UNK
  1274. VEDOLIZUMAB [Suspect]
     Active Substance: VEDOLIZUMAB
     Dosage: UNK
  1275. VEDOLIZUMAB [Suspect]
     Active Substance: VEDOLIZUMAB
     Dosage: UNK
  1276. VEDOLIZUMAB [Suspect]
     Active Substance: VEDOLIZUMAB
     Indication: Crohn^s disease
     Dosage: UNK; ;
     Route: 050
  1277. VEDOLIZUMAB [Suspect]
     Active Substance: VEDOLIZUMAB
     Dosage: UNK; ;
     Route: 050
  1278. VEDOLIZUMAB [Suspect]
     Active Substance: VEDOLIZUMAB
     Dosage: UNK; ;
     Route: 050
  1279. VEDOLIZUMAB [Suspect]
     Active Substance: VEDOLIZUMAB
     Dosage: UNK; ;
     Route: 050
  1280. VEDOLIZUMAB [Suspect]
     Active Substance: VEDOLIZUMAB
     Dosage: UNK; ;
     Route: 050
  1281. VEDOLIZUMAB [Suspect]
     Active Substance: VEDOLIZUMAB
     Dosage: UNK; ;
     Route: 050
  1282. VEDOLIZUMAB [Suspect]
     Active Substance: VEDOLIZUMAB
     Dosage: UNK; ;
     Route: 050
  1283. VEDOLIZUMAB [Suspect]
     Active Substance: VEDOLIZUMAB
     Dosage: UNK; ;
     Route: 050
  1284. VEDOLIZUMAB [Suspect]
     Active Substance: VEDOLIZUMAB
     Dosage: UNK; ;
     Route: 050
  1285. VEDOLIZUMAB [Suspect]
     Active Substance: VEDOLIZUMAB
     Dosage: UNK; ;
     Route: 050
  1286. VEDOLIZUMAB [Suspect]
     Active Substance: VEDOLIZUMAB
     Dosage: UNK, ADDITIONAL INFORMATION ON DRUG (FREE TEXT): OROMUCOSAL SUSPENSION ADALIMUMAB SOLUTION FOR INJEC
     Route: 065
     Dates: start: 20211112
  1287. VEDOLIZUMAB [Suspect]
     Active Substance: VEDOLIZUMAB
     Dosage: UNK OTHER
     Route: 050
     Dates: start: 20211112
  1288. VEDOLIZUMAB [Suspect]
     Active Substance: VEDOLIZUMAB
     Dosage: UNK OTHER
     Route: 050
     Dates: start: 20211112
  1289. VEDOLIZUMAB [Suspect]
     Active Substance: VEDOLIZUMAB
     Dosage: UNK OTHER
     Route: 050
     Dates: start: 20211112
  1290. VEDOLIZUMAB [Suspect]
     Active Substance: VEDOLIZUMAB
     Dosage: SOLUTION FOR INJECTION
     Route: 050
     Dates: start: 20211112
  1291. VEDOLIZUMAB [Suspect]
     Active Substance: VEDOLIZUMAB
     Dosage: SOLUTION FOR INJECTION
     Route: 050
     Dates: start: 20211112
  1292. VEDOLIZUMAB [Suspect]
     Active Substance: VEDOLIZUMAB
     Dosage: SOLUTION FOR INJECTION
     Route: 050
     Dates: start: 20211112
  1293. VEDOLIZUMAB [Suspect]
     Active Substance: VEDOLIZUMAB
     Dosage: SOLUTION FOR INJECTION
     Route: 050
     Dates: start: 20211112
  1294. VEDOLIZUMAB [Suspect]
     Active Substance: VEDOLIZUMAB
     Dosage: SOLUTION FOR INJECTION
     Route: 050
     Dates: start: 20211112
  1295. VEDOLIZUMAB [Suspect]
     Active Substance: VEDOLIZUMAB
     Dosage: SOLUTION FOR INJECTION
     Route: 050
     Dates: start: 20211112
  1296. VEDOLIZUMAB [Suspect]
     Active Substance: VEDOLIZUMAB
     Dosage: SOLUTION FOR INJECTION
     Route: 050
     Dates: start: 20211112
  1297. VEDOLIZUMAB [Suspect]
     Active Substance: VEDOLIZUMAB
     Dosage: SOLUTION FOR INJECTION
     Route: 050
     Dates: start: 20211112
  1298. VEDOLIZUMAB [Suspect]
     Active Substance: VEDOLIZUMAB
     Dosage: SOLUTION FOR INJECTION
     Route: 050
     Dates: start: 20211112
  1299. VEDOLIZUMAB [Suspect]
     Active Substance: VEDOLIZUMAB
     Dosage: SOLUTION FOR INJECTION
     Route: 050
     Dates: start: 20211112
  1300. VEDOLIZUMAB [Suspect]
     Active Substance: VEDOLIZUMAB
     Dosage: SOLUTION FOR INJECTION
     Route: 050
     Dates: start: 20211112
  1301. VEDOLIZUMAB [Suspect]
     Active Substance: VEDOLIZUMAB
     Dosage: SOLUTION FOR INJECTION
     Route: 050
     Dates: start: 20211112
  1302. VEDOLIZUMAB [Suspect]
     Active Substance: VEDOLIZUMAB
     Dosage: SOLUTION FOR INJECTION
     Route: 050
     Dates: start: 20211112
  1303. VEDOLIZUMAB [Suspect]
     Active Substance: VEDOLIZUMAB
     Dosage: SOLUTION FOR INJECTION
     Route: 050
     Dates: start: 20211112
  1304. VEDOLIZUMAB [Suspect]
     Active Substance: VEDOLIZUMAB
     Dosage: SOLUTION FOR INJECTION
     Route: 050
     Dates: start: 20211112
  1305. VEDOLIZUMAB [Suspect]
     Active Substance: VEDOLIZUMAB
     Dosage: SOLUTION FOR INJECTION
     Route: 050
     Dates: start: 20211112
  1306. VEDOLIZUMAB [Suspect]
     Active Substance: VEDOLIZUMAB
     Dosage: SOLUTION FOR INJECTION
     Route: 050
     Dates: start: 20211112
  1307. VEDOLIZUMAB [Suspect]
     Active Substance: VEDOLIZUMAB
     Dosage: UNK; ADDITIONAL INFORMATION ON DRUG (FREE TEXT): ADALIMUMAB SOLUTION FOR INJECTION, SINGLE DOSE PEN
     Route: 050
  1308. VEDOLIZUMAB [Suspect]
     Active Substance: VEDOLIZUMAB
     Dosage: UNK; ADDITIONAL INFORMATION ON DRUG (FREE TEXT): ADALIMUMAB SOLUTION FOR INJECTION, SINGLE DOSE PEN
     Route: 065
     Dates: start: 20211112
  1309. VEDOLIZUMAB [Suspect]
     Active Substance: VEDOLIZUMAB
     Dosage: UNK, ADDITIONAL INFORMATION ON DRUG (FREE TEXT): OROMUCOSAL SUSPENSION ADALIMUMAB SOLUTION FOR INJEC
     Route: 050
  1310. VEDOLIZUMAB [Suspect]
     Active Substance: VEDOLIZUMAB
     Dosage: UNK, ADDITIONAL INFORMATION ON DRUG (FREE TEXT): OROMUCOSAL SUSPENSION ADALIMUMAB SOLUTION FOR INJEC
     Route: 050
  1311. VEDOLIZUMAB [Suspect]
     Active Substance: VEDOLIZUMAB
     Dosage: UNK, ADDITIONAL INFORMATION ON DRUG (FREE TEXT): OROMUCOSAL SUSPENSION ADALIMUMAB SOLUTION FOR INJEC
     Route: 050
  1312. VEDOLIZUMAB [Suspect]
     Active Substance: VEDOLIZUMAB
     Dosage: UNK, ADDITIONAL INFORMATION ON DRUG (FREE TEXT): OROMUCOSAL SUSPENSION ADALIMUMAB SOLUTION FOR INJEC
     Route: 050
  1313. VEDOLIZUMAB [Suspect]
     Active Substance: VEDOLIZUMAB
     Dosage: UNK, ADDITIONAL INFORMATION ON DRUG (FREE TEXT): OROMUCOSAL SUSPENSION ADALIMUMAB SOLUTION FOR INJEC
     Route: 050
  1314. VEDOLIZUMAB [Suspect]
     Active Substance: VEDOLIZUMAB
     Indication: Crohn^s disease
     Dosage: SOLUTION FOR INJECTION
     Route: 050
  1315. VEDOLIZUMAB [Suspect]
     Active Substance: VEDOLIZUMAB
     Indication: Crohn^s disease
     Dosage: SOLUTION FOR INJECTION
     Route: 050
  1316. VEDOLIZUMAB [Suspect]
     Active Substance: VEDOLIZUMAB
     Dosage: SOLUTION FOR INJECTION
     Route: 050
  1317. VEDOLIZUMAB [Suspect]
     Active Substance: VEDOLIZUMAB
     Dosage: SOLUTION FOR INJECTION
     Route: 050
  1318. VEDOLIZUMAB [Suspect]
     Active Substance: VEDOLIZUMAB
     Dosage: UNK OTHER
     Route: 050
  1319. VEDOLIZUMAB [Suspect]
     Active Substance: VEDOLIZUMAB
     Dosage: SOLUTION FOR INJECTION
     Route: 050
  1320. VEDOLIZUMAB [Suspect]
     Active Substance: VEDOLIZUMAB
     Dosage: SOLUTION FOR INJECTION
     Route: 050
  1321. VEDOLIZUMAB [Suspect]
     Active Substance: VEDOLIZUMAB
     Dosage: SOLUTION FOR INJECTION
     Route: 050
  1322. VEDOLIZUMAB [Suspect]
     Active Substance: VEDOLIZUMAB
     Dosage: SOLUTION FOR INJECTION
     Route: 050
  1323. VEDOLIZUMAB [Suspect]
     Active Substance: VEDOLIZUMAB
     Dosage: SOLUTION FOR INJECTION
     Route: 050
  1324. VEDOLIZUMAB [Suspect]
     Active Substance: VEDOLIZUMAB
     Dosage: SOLUTION FOR INJECTION
     Route: 050
  1325. VEDOLIZUMAB [Suspect]
     Active Substance: VEDOLIZUMAB
     Dosage: UNK OTHER
     Route: 050
  1326. VEDOLIZUMAB [Suspect]
     Active Substance: VEDOLIZUMAB
     Dosage: SOLUTION FOR INJECTION
     Route: 050
  1327. VEDOLIZUMAB [Suspect]
     Active Substance: VEDOLIZUMAB
     Dosage: SOLUTION FOR INJECTION
     Route: 050
  1328. VEDOLIZUMAB [Suspect]
     Active Substance: VEDOLIZUMAB
     Dosage: SOLUTION FOR INJECTION
     Route: 050
  1329. VEDOLIZUMAB [Suspect]
     Active Substance: VEDOLIZUMAB
     Dosage: SOLUTION FOR INJECTION
     Route: 050
  1330. VEDOLIZUMAB [Suspect]
     Active Substance: VEDOLIZUMAB
     Dosage: SOLUTION FOR INJECTION
     Route: 050
  1331. VEDOLIZUMAB [Suspect]
     Active Substance: VEDOLIZUMAB
     Dosage: SOLUTION FOR INJECTION
     Route: 050
  1332. VEDOLIZUMAB [Suspect]
     Active Substance: VEDOLIZUMAB
     Dosage: UNK OTHER
     Route: 050
  1333. VEDOLIZUMAB [Suspect]
     Active Substance: VEDOLIZUMAB
     Dosage: SOLUTION FOR INJECTION
     Route: 050
  1334. VEDOLIZUMAB [Suspect]
     Active Substance: VEDOLIZUMAB
     Dosage: SOLUTION FOR INJECTION
     Route: 050
  1335. VEDOLIZUMAB [Suspect]
     Active Substance: VEDOLIZUMAB
     Dosage: SOLUTION FOR INJECTION
     Route: 050
  1336. VEDOLIZUMAB [Suspect]
     Active Substance: VEDOLIZUMAB
     Dosage: SOLUTION FOR INJECTION
     Route: 050
  1337. VEDOLIZUMAB [Suspect]
     Active Substance: VEDOLIZUMAB
     Dosage: SOLUTION FOR INJECTION
     Route: 050
  1338. VEDOLIZUMAB [Suspect]
     Active Substance: VEDOLIZUMAB
     Dosage: SOLUTION FOR INJECTION
     Route: 050
  1339. VEDOLIZUMAB [Suspect]
     Active Substance: VEDOLIZUMAB
     Dosage: SOLUTION FOR INJECTION
     Route: 050
  1340. VEDOLIZUMAB [Suspect]
     Active Substance: VEDOLIZUMAB
     Dosage: SOLUTION FOR INJECTION
     Route: 050
  1341. VEDOLIZUMAB [Suspect]
     Active Substance: VEDOLIZUMAB
     Dosage: UNKNOWN, UNK, SINGLE DOSE PEN
     Route: 050
  1342. VEDOLIZUMAB [Suspect]
     Active Substance: VEDOLIZUMAB
     Dosage: UNKNOWN, UNK, SINGLE DOSE PEN
     Route: 050
  1343. VEDOLIZUMAB [Suspect]
     Active Substance: VEDOLIZUMAB
     Dosage: SOLUTION FOR INJECTION
     Route: 065
  1344. VEDOLIZUMAB [Suspect]
     Active Substance: VEDOLIZUMAB
     Dosage: SOLUTION FOR INJECTION
     Route: 065
  1345. VEDOLIZUMAB [Suspect]
     Active Substance: VEDOLIZUMAB
     Dosage: SOLUTION FOR INJECTION
     Route: 065
  1346. VEDOLIZUMAB [Suspect]
     Active Substance: VEDOLIZUMAB
     Dosage: SOLUTION FOR INJECTION
     Route: 065
  1347. VEDOLIZUMAB [Suspect]
     Active Substance: VEDOLIZUMAB
     Dosage: SOLUTION FOR INJECTION
     Route: 065
  1348. VEDOLIZUMAB [Suspect]
     Active Substance: VEDOLIZUMAB
     Dosage: SOLUTION FOR INJECTION
     Route: 065
  1349. VEDOLIZUMAB [Suspect]
     Active Substance: VEDOLIZUMAB
     Dosage: SOLUTION FOR INJECTION
     Route: 065
  1350. VEDOLIZUMAB [Suspect]
     Active Substance: VEDOLIZUMAB
     Dosage: SOLUTION FOR INJECTION
     Route: 065
  1351. VEDOLIZUMAB [Suspect]
     Active Substance: VEDOLIZUMAB
     Dosage: SOLUTION FOR INJECTION
     Route: 065
  1352. VEDOLIZUMAB [Suspect]
     Active Substance: VEDOLIZUMAB
     Dosage: UNK, OTHER
     Route: 065
  1353. VEDOLIZUMAB [Suspect]
     Active Substance: VEDOLIZUMAB
     Dosage: SOLUTION FOR INJECTION
     Route: 065
  1354. VEDOLIZUMAB [Suspect]
     Active Substance: VEDOLIZUMAB
     Dosage: SOLUTION FOR INJECTION
     Route: 065
  1355. VEDOLIZUMAB [Suspect]
     Active Substance: VEDOLIZUMAB
     Dosage: SOLUTION FOR INJECTION
     Route: 065
  1356. VEDOLIZUMAB [Suspect]
     Active Substance: VEDOLIZUMAB
     Dosage: SOLUTION FOR INJECTION
     Route: 065
  1357. VEDOLIZUMAB [Suspect]
     Active Substance: VEDOLIZUMAB
     Dosage: SOLUTION FOR INJECTION
     Route: 065
  1358. VEDOLIZUMAB [Suspect]
     Active Substance: VEDOLIZUMAB
     Dosage: SOLUTION FOR INJECTION
     Route: 065
  1359. VEDOLIZUMAB [Suspect]
     Active Substance: VEDOLIZUMAB
     Dosage: SOLUTION FOR INJECTION
     Route: 065
  1360. VEDOLIZUMAB [Suspect]
     Active Substance: VEDOLIZUMAB
     Dosage: UNK, OTHER
     Route: 065
     Dates: start: 20211112
  1361. VEDOLIZUMAB [Suspect]
     Active Substance: VEDOLIZUMAB
     Dosage: SOLUTION FOR INJECTION
     Route: 065
  1362. VEDOLIZUMAB [Suspect]
     Active Substance: VEDOLIZUMAB
     Dosage: SOLUTION FOR INJECTION
     Route: 065
  1363. VEDOLIZUMAB [Suspect]
     Active Substance: VEDOLIZUMAB
     Dosage: SOLUTION FOR INJECTION
     Route: 065
  1364. VEDOLIZUMAB [Suspect]
     Active Substance: VEDOLIZUMAB
     Indication: Crohn^s disease
     Dosage: SOLUTION FOR INJECTION
     Route: 065
  1365. VEDOLIZUMAB [Suspect]
     Active Substance: VEDOLIZUMAB
     Dosage: SOLUTION FOR INJECTION
     Route: 065
  1366. VEDOLIZUMAB [Suspect]
     Active Substance: VEDOLIZUMAB
     Dosage: SOLUTION FOR INJECTION
     Route: 065
  1367. VEDOLIZUMAB [Suspect]
     Active Substance: VEDOLIZUMAB
     Dosage: SOLUTION FOR INJECTION
     Route: 065
  1368. VEDOLIZUMAB [Suspect]
     Active Substance: VEDOLIZUMAB
     Dosage: SOLUTION FOR INJECTION
     Route: 065
  1369. VEDOLIZUMAB [Suspect]
     Active Substance: VEDOLIZUMAB
     Dosage: SOLUTION FOR INJECTION
     Route: 065
  1370. VEDOLIZUMAB [Suspect]
     Active Substance: VEDOLIZUMAB
     Dosage: SOLUTION FOR INJECTION
     Route: 065
  1371. VEDOLIZUMAB [Suspect]
     Active Substance: VEDOLIZUMAB
     Dosage: SOLUTION FOR INJECTION
     Route: 065
  1372. VEDOLIZUMAB [Suspect]
     Active Substance: VEDOLIZUMAB
     Dosage: SOLUTION FOR INJECTION
     Route: 065
  1373. VEDOLIZUMAB [Suspect]
     Active Substance: VEDOLIZUMAB
     Dosage: SOLUTION FOR INJECTION
     Route: 065
  1374. VEDOLIZUMAB [Suspect]
     Active Substance: VEDOLIZUMAB
     Dosage: SOLUTION FOR INJECTION
     Route: 065
  1375. VEDOLIZUMAB [Suspect]
     Active Substance: VEDOLIZUMAB
     Dosage: SOLUTION FOR INJECTION
     Route: 065
  1376. VEDOLIZUMAB [Suspect]
     Active Substance: VEDOLIZUMAB
     Dosage: SOLUTION FOR INJECTION
     Route: 065
  1377. VEDOLIZUMAB [Suspect]
     Active Substance: VEDOLIZUMAB
     Dosage: SOLUTION FOR INJECTION
     Route: 065
  1378. VEDOLIZUMAB [Suspect]
     Active Substance: VEDOLIZUMAB
     Dosage: SOLUTION FOR INJECTION
     Route: 065
  1379. VEDOLIZUMAB [Suspect]
     Active Substance: VEDOLIZUMAB
     Dosage: SOLUTION FOR INJECTION
     Route: 065
  1380. VEDOLIZUMAB [Suspect]
     Active Substance: VEDOLIZUMAB
     Dosage: SOLUTION FOR INJECTION
     Route: 065
  1381. VEDOLIZUMAB [Suspect]
     Active Substance: VEDOLIZUMAB
     Dosage: SOLUTION FOR INJECTION
     Route: 065
  1382. VEDOLIZUMAB [Suspect]
     Active Substance: VEDOLIZUMAB
     Dosage: SOLUTION FOR INJECTION
     Route: 065
  1383. VEDOLIZUMAB [Suspect]
     Active Substance: VEDOLIZUMAB
     Dosage: SOLUTION FOR INJECTION
     Route: 065
  1384. VEDOLIZUMAB [Suspect]
     Active Substance: VEDOLIZUMAB
     Dosage: SOLUTION FOR INJECTION
     Route: 065
  1385. VEDOLIZUMAB [Suspect]
     Active Substance: VEDOLIZUMAB
     Dosage: SOLUTION FOR INJECTION
     Route: 065
  1386. VEDOLIZUMAB [Suspect]
     Active Substance: VEDOLIZUMAB
     Dosage: SOLUTION FOR INJECTION
     Route: 065
  1387. VEDOLIZUMAB [Suspect]
     Active Substance: VEDOLIZUMAB
     Dosage: SOLUTION FOR INJECTION
     Route: 065
  1388. VEDOLIZUMAB [Suspect]
     Active Substance: VEDOLIZUMAB
     Dosage: SOLUTION FOR INJECTION
     Route: 065
  1389. VEDOLIZUMAB [Suspect]
     Active Substance: VEDOLIZUMAB
     Dosage: SOLUTION FOR INJECTION
     Route: 065
  1390. VEDOLIZUMAB [Suspect]
     Active Substance: VEDOLIZUMAB
     Dosage: SOLUTION FOR INJECTION
     Route: 065
  1391. VEDOLIZUMAB [Suspect]
     Active Substance: VEDOLIZUMAB
     Dosage: UNK
     Route: 050
  1392. VEDOLIZUMAB [Suspect]
     Active Substance: VEDOLIZUMAB
     Dosage: UNK
     Route: 050
  1393. VEDOLIZUMAB [Suspect]
     Active Substance: VEDOLIZUMAB
     Dosage: UNK
     Route: 050
  1394. VEDOLIZUMAB [Suspect]
     Active Substance: VEDOLIZUMAB
     Dosage: UNK
     Route: 050
  1395. VEDOLIZUMAB [Suspect]
     Active Substance: VEDOLIZUMAB
     Dosage: UNK
     Route: 050
  1396. VEDOLIZUMAB [Suspect]
     Active Substance: VEDOLIZUMAB
     Dosage: UNK
     Route: 050
  1397. VEDOLIZUMAB [Suspect]
     Active Substance: VEDOLIZUMAB
     Dosage: UNK
     Route: 050
  1398. VEDOLIZUMAB [Suspect]
     Active Substance: VEDOLIZUMAB
     Dosage: UNK
     Route: 050
  1399. VEDOLIZUMAB [Suspect]
     Active Substance: VEDOLIZUMAB
     Dosage: UNK
     Route: 050
  1400. RIFAXIMIN [Suspect]
     Active Substance: RIFAXIMIN
     Indication: Crohn^s disease
     Dosage: UNKNOWN
     Route: 050
  1401. RIFAXIMIN [Suspect]
     Active Substance: RIFAXIMIN
     Indication: Product used for unknown indication
     Dosage: UNKNOWN
     Route: 050
  1402. RIFAXIMIN [Suspect]
     Active Substance: RIFAXIMIN
     Indication: Product used for unknown indication
     Dosage: UNKNOWN
     Route: 050
  1403. RIFAXIMIN [Suspect]
     Active Substance: RIFAXIMIN
     Dosage: UNKNOWN
     Route: 050
  1404. RIFAXIMIN [Suspect]
     Active Substance: RIFAXIMIN
     Dosage: UNK
     Route: 050
  1405. RIFAXIMIN [Suspect]
     Active Substance: RIFAXIMIN
     Dosage: UNKNOWN
     Route: 050
  1406. RIFAXIMIN [Suspect]
     Active Substance: RIFAXIMIN
     Dosage: UNK, ADDITIONAL INFORMATION ON DRUG (FREE TEXT): ADALIMUMAB SOLUTION FOR INJECTION, SINGLE DOSE PEN
     Route: 065
  1407. RIFAXIMIN [Suspect]
     Active Substance: RIFAXIMIN
     Dosage: UNK, ADDITIONAL INFORMATION ON DRUG (FREE TEXT): ADALIMUMAB SOLUTION FOR INJECTION, SINGLE DOSE PEN
     Route: 065
  1408. RIFAXIMIN [Suspect]
     Active Substance: RIFAXIMIN
     Dosage: UNK, ADDITIONAL INFORMATION ON DRUG (FREE TEXT): ADALIMUMAB SOLUTION FOR INJECTION, SINGLE DOSE PEN
     Route: 065
  1409. RIFAXIMIN [Suspect]
     Active Substance: RIFAXIMIN
     Dosage: UNK, ADDITIONAL INFORMATION ON DRUG (FREE TEXT): ADALIMUMAB SOLUTION FOR INJECTION, SINGLE DOSE PEN
     Route: 065
  1410. RIFAXIMIN [Suspect]
     Active Substance: RIFAXIMIN
     Dosage: UNK, ADDITIONAL INFORMATION ON DRUG (FREE TEXT): ADALIMUMAB SOLUTION FOR INJECTION, SINGLE DOSE PEN
     Route: 065
  1411. RIFAXIMIN [Suspect]
     Active Substance: RIFAXIMIN
     Dosage: UNK
     Route: 050
  1412. RIFAXIMIN [Suspect]
     Active Substance: RIFAXIMIN
     Dosage: UNK
     Route: 050
  1413. RIFAXIMIN [Suspect]
     Active Substance: RIFAXIMIN
     Dosage: UNK
     Route: 050
  1414. RIFAXIMIN [Suspect]
     Active Substance: RIFAXIMIN
     Dosage: UNK
     Route: 050
  1415. RIFAXIMIN [Suspect]
     Active Substance: RIFAXIMIN
     Dosage: UNK
     Route: 050
  1416. RIFAXIMIN [Suspect]
     Active Substance: RIFAXIMIN
     Dosage: UNKNOWN
     Route: 050
  1417. RIFAXIMIN [Suspect]
     Active Substance: RIFAXIMIN
     Dosage: UNK
     Route: 050
  1418. RIFAXIMIN [Suspect]
     Active Substance: RIFAXIMIN
     Dosage: UNK
     Route: 050
  1419. RIFAXIMIN [Suspect]
     Active Substance: RIFAXIMIN
     Dosage: UNK
     Route: 050
  1420. RIFAXIMIN [Suspect]
     Active Substance: RIFAXIMIN
     Dosage: UNK
     Route: 050
  1421. RIFAXIMIN [Suspect]
     Active Substance: RIFAXIMIN
     Dosage: UNK
     Route: 050
  1422. RIFAXIMIN [Suspect]
     Active Substance: RIFAXIMIN
     Dosage: UNK
     Route: 050
  1423. RIFAXIMIN [Suspect]
     Active Substance: RIFAXIMIN
     Dosage: UNKNOWN
     Route: 050
  1424. RIFAXIMIN [Suspect]
     Active Substance: RIFAXIMIN
     Dosage: UNKNOWN
     Route: 050
  1425. RIFAXIMIN [Suspect]
     Active Substance: RIFAXIMIN
     Dosage: UNKNOWN
     Route: 050
  1426. RIFAXIMIN [Suspect]
     Active Substance: RIFAXIMIN
     Dosage: UNKNOWN
     Route: 050
  1427. RIFAXIMIN [Suspect]
     Active Substance: RIFAXIMIN
     Dosage: UNKNOWN
     Route: 050
  1428. RIFAXIMIN [Suspect]
     Active Substance: RIFAXIMIN
     Dosage: UNK; ; ADDITIONAL INFO: ROUTE:OTHER
     Route: 050
  1429. RIFAXIMIN [Suspect]
     Active Substance: RIFAXIMIN
     Dosage: UNK, OTHER (ADALIMUMAB SOLUTION FOR INJECTION, SINGLE DOSE PEN)
     Route: 065
  1430. RIFAXIMIN [Suspect]
     Active Substance: RIFAXIMIN
     Dosage: UNK, OTHER
     Route: 065
  1431. RIFAXIMIN [Suspect]
     Active Substance: RIFAXIMIN
     Dosage: UNK, OTHER
     Route: 065
  1432. RIFAXIMIN [Suspect]
     Active Substance: RIFAXIMIN
     Dosage: UNK, OTHER
     Route: 065
  1433. RIFAXIMIN [Suspect]
     Active Substance: RIFAXIMIN
     Dosage: UNK, OTHER
     Route: 065
  1434. RIFAXIMIN [Suspect]
     Active Substance: RIFAXIMIN
     Dosage: UNK, OTHER
     Route: 065
  1435. RIFAXIMIN [Suspect]
     Active Substance: RIFAXIMIN
     Dosage: UNK, OTHER
     Route: 065
  1436. RIFAXIMIN [Suspect]
     Active Substance: RIFAXIMIN
     Dosage: UNK, OTHER
     Route: 065
  1437. RIFAXIMIN [Suspect]
     Active Substance: RIFAXIMIN
     Dosage: UNK, OTHER
     Route: 065
  1438. RIFAXIMIN [Suspect]
     Active Substance: RIFAXIMIN
     Dosage: UNK, OTHER
     Route: 065
  1439. RIFAXIMIN [Suspect]
     Active Substance: RIFAXIMIN
     Dosage: UNK, OTHER
     Route: 065
  1440. RIFAXIMIN [Suspect]
     Active Substance: RIFAXIMIN
     Dosage: UNK, OTHER
     Route: 065
  1441. RIFAXIMIN [Suspect]
     Active Substance: RIFAXIMIN
     Dosage: UNK, ADDITIONAL INFORMATION ON DRUG (FREE TEXT): ADALIMUMAB SOLUTION FOR INJECTION, SINGLE DOSE PEN
     Route: 065
  1442. RIFAXIMIN [Suspect]
     Active Substance: RIFAXIMIN
     Dosage: UNK, ADDITIONAL INFORMATION ON DRUG (FREE TEXT): ADALIMUMAB SOLUTION FOR INJECTION, SINGLE DOSE PEN
     Route: 065
  1443. RIFAXIMIN [Suspect]
     Active Substance: RIFAXIMIN
     Dosage: UNK, ADDITIONAL INFORMATION ON DRUG (FREE TEXT): ADALIMUMAB SOLUTION FOR INJECTION, SINGLE DOSE PEN
     Route: 065
  1444. RIFAXIMIN [Suspect]
     Active Substance: RIFAXIMIN
     Dosage: UNK, ADDITIONAL INFORMATION ON DRUG (FREE TEXT): ADALIMUMAB SOLUTION FOR INJECTION, SINGLE DOSE PEN
     Route: 065
  1445. RIFAXIMIN [Suspect]
     Active Substance: RIFAXIMIN
     Dosage: UNK, ADDITIONAL INFORMATION ON DRUG (FREE TEXT): ADALIMUMAB SOLUTION FOR INJECTION, SINGLE DOSE PEN
     Route: 065
  1446. RIFAXIMIN [Suspect]
     Active Substance: RIFAXIMIN
     Dosage: UNK, ADDITIONAL INFORMATION ON DRUG (FREE TEXT): ADALIMUMAB SOLUTION FOR INJECTION, SINGLE DOSE PEN
     Route: 065
  1447. RIFAXIMIN [Suspect]
     Active Substance: RIFAXIMIN
     Dosage: UNK, ADDITIONAL INFORMATION ON DRUG (FREE TEXT): ADALIMUMAB SOLUTION FOR INJECTION, SINGLE DOSE PEN
     Route: 065
  1448. RIFAXIMIN [Suspect]
     Active Substance: RIFAXIMIN
     Dosage: UNKNOWN; ;
     Route: 050
  1449. RIFAXIMIN [Suspect]
     Active Substance: RIFAXIMIN
     Dosage: UNKNOWN; ;
     Route: 050
  1450. RIFAXIMIN [Suspect]
     Active Substance: RIFAXIMIN
     Dosage: UNK
     Route: 050
  1451. RIFAXIMIN [Suspect]
     Active Substance: RIFAXIMIN
     Dosage: UNK
  1452. RIFAXIMIN [Suspect]
     Active Substance: RIFAXIMIN
     Dosage: UNK
  1453. RIFAXIMIN [Suspect]
     Active Substance: RIFAXIMIN
     Indication: Product used for unknown indication
     Dosage: UNK, ADALIMUMAB SOLUTION FOR INJECTION, SINGLE DOSE PEN
     Route: 050
  1454. RIFAXIMIN [Suspect]
     Active Substance: RIFAXIMIN
     Dosage: UNK, ADALIMUMAB SOLUTION FOR INJECTION, SINGLE DOSE PEN
     Route: 050
  1455. RIFAXIMIN [Suspect]
     Active Substance: RIFAXIMIN
     Dosage: UNK, ADALIMUMAB SOLUTION FOR INJECTION, SINGLE DOSE PEN
     Route: 050
  1456. RIFAXIMIN [Suspect]
     Active Substance: RIFAXIMIN
     Dosage: UNK, ADALIMUMAB SOLUTION FOR INJECTION, SINGLE DOSE PEN
     Route: 050
  1457. RIFAXIMIN [Suspect]
     Active Substance: RIFAXIMIN
     Dosage: UNK, ADALIMUMAB SOLUTION FOR INJECTION, SINGLE DOSE PEN
     Route: 050
  1458. RIFAXIMIN [Suspect]
     Active Substance: RIFAXIMIN
     Dosage: UNK, ADALIMUMAB SOLUTION FOR INJECTION, SINGLE DOSE PEN
     Route: 050
  1459. RIFAXIMIN [Suspect]
     Active Substance: RIFAXIMIN
     Dosage: UNKNOWN
     Route: 050
  1460. RIFAXIMIN [Suspect]
     Active Substance: RIFAXIMIN
     Dosage: UNKNOWN
     Route: 050
  1461. RIFAXIMIN [Suspect]
     Active Substance: RIFAXIMIN
     Dosage: UNKNOWN
     Route: 050
  1462. RIFAXIMIN [Suspect]
     Active Substance: RIFAXIMIN
     Dosage: DOSE FORM: 82
     Route: 050
  1463. RIFAXIMIN [Suspect]
     Active Substance: RIFAXIMIN
     Dosage: DOSE FORM: 82
     Route: 050
  1464. RIFAXIMIN [Suspect]
     Active Substance: RIFAXIMIN
     Dosage: DOSE FORM: 82
     Route: 050
  1465. RIFAXIMIN [Suspect]
     Active Substance: RIFAXIMIN
     Dosage: DOSE FORM: 82
     Route: 050
  1466. RIFAXIMIN [Suspect]
     Active Substance: RIFAXIMIN
     Dosage: DOSE FORM: 82
     Route: 050
  1467. RIFAXIMIN [Suspect]
     Active Substance: RIFAXIMIN
     Dosage: DOSE FORM: 82
     Route: 050
  1468. RIFAXIMIN [Suspect]
     Active Substance: RIFAXIMIN
     Dosage: DOSE FORM: 82
     Route: 050
  1469. RIFAXIMIN [Suspect]
     Active Substance: RIFAXIMIN
     Dosage: DOSE FORM: 82
     Route: 050
  1470. RIFAXIMIN [Suspect]
     Active Substance: RIFAXIMIN
     Dosage: DOSE FORM: 82
     Route: 050
  1471. RIFAXIMIN [Suspect]
     Active Substance: RIFAXIMIN
     Dosage: DOSE FORM: 82
     Route: 050
  1472. RIFAXIMIN [Suspect]
     Active Substance: RIFAXIMIN
     Dosage: DOSE FORM: 82
     Route: 050
  1473. RIFAXIMIN [Suspect]
     Active Substance: RIFAXIMIN
     Dosage: DOSE FORM: 82
     Route: 050
  1474. RIFAXIMIN [Suspect]
     Active Substance: RIFAXIMIN
     Dosage: UNK, OTHER / ADALIMUMAB SOLUTION FOR INJECTION, SINGLE DOSE PEN
     Route: 065
  1475. RIFAXIMIN [Suspect]
     Active Substance: RIFAXIMIN
     Dosage: UNK
     Route: 065
  1476. RIFAXIMIN [Suspect]
     Active Substance: RIFAXIMIN
     Dosage: UNK
     Route: 065
  1477. RIFAXIMIN [Suspect]
     Active Substance: RIFAXIMIN
     Dosage: UNK
     Route: 065
  1478. RIFAXIMIN [Suspect]
     Active Substance: RIFAXIMIN
     Dosage: UNKNOWN
     Route: 050
  1479. RIFAXIMIN [Suspect]
     Active Substance: RIFAXIMIN
     Dosage: UNKNOWN
     Route: 050
  1480. RIFAXIMIN [Suspect]
     Active Substance: RIFAXIMIN
     Dosage: UNKNOWN
     Route: 050
  1481. RIFAXIMIN [Suspect]
     Active Substance: RIFAXIMIN
     Dosage: UNKNOWN
     Route: 050
  1482. RIFAXIMIN [Suspect]
     Active Substance: RIFAXIMIN
     Dosage: UNKNOWN
     Route: 050
  1483. RIFAXIMIN [Suspect]
     Active Substance: RIFAXIMIN
     Dosage: UNKNOWN
     Route: 050
  1484. RIFAXIMIN [Suspect]
     Active Substance: RIFAXIMIN
     Dosage: UNKNOWN
     Route: 050
  1485. RIFAXIMIN [Suspect]
     Active Substance: RIFAXIMIN
     Dosage: UNKNOWN
     Route: 050
  1486. RIFAXIMIN [Suspect]
     Active Substance: RIFAXIMIN
     Dosage: UNKNOWN
     Route: 050
  1487. RIFAXIMIN [Suspect]
     Active Substance: RIFAXIMIN
     Dosage: UNK
     Route: 050
  1488. RIFAXIMIN [Suspect]
     Active Substance: RIFAXIMIN
     Dosage: UNK
     Route: 050
  1489. RIFAXIMIN [Suspect]
     Active Substance: RIFAXIMIN
     Dosage: UNKNOWN
     Route: 050
  1490. RIFAXIMIN [Suspect]
     Active Substance: RIFAXIMIN
     Dosage: UNKNOWN
     Route: 050
  1491. RIFAXIMIN [Suspect]
     Active Substance: RIFAXIMIN
     Dosage: UNKNOWN
     Route: 050
  1492. RIFAXIMIN [Suspect]
     Active Substance: RIFAXIMIN
     Dosage: UNK
     Route: 065
  1493. RIFAXIMIN [Suspect]
     Active Substance: RIFAXIMIN
     Dosage: UNK
     Route: 065
  1494. RIFAXIMIN [Suspect]
     Active Substance: RIFAXIMIN
     Dosage: UNK
     Route: 065
  1495. RIFAXIMIN [Suspect]
     Active Substance: RIFAXIMIN
     Dosage: UNK
     Route: 065
  1496. RIFAXIMIN [Suspect]
     Active Substance: RIFAXIMIN
     Dosage: UNK
     Route: 065
  1497. RIFAXIMIN [Suspect]
     Active Substance: RIFAXIMIN
     Dosage: UNK
     Route: 065
  1498. RIFAXIMIN [Suspect]
     Active Substance: RIFAXIMIN
     Dosage: UNK
     Route: 065
  1499. RIFAXIMIN [Suspect]
     Active Substance: RIFAXIMIN
     Dosage: UNK
     Route: 065
  1500. RIFAXIMIN [Suspect]
     Active Substance: RIFAXIMIN
     Dosage: UNK
     Route: 065
  1501. RIFAXIMIN [Suspect]
     Active Substance: RIFAXIMIN
     Dosage: UNK
     Route: 065
  1502. RIFAXIMIN [Suspect]
     Active Substance: RIFAXIMIN
     Dosage: UNK
     Route: 065
  1503. RIFAXIMIN [Suspect]
     Active Substance: RIFAXIMIN
     Indication: Product used for unknown indication
     Dosage: UNKNOWN
     Route: 065
  1504. RIFAXIMIN [Suspect]
     Active Substance: RIFAXIMIN
     Dosage: UNKNOWN
     Route: 065
  1505. RIFAXIMIN [Suspect]
     Active Substance: RIFAXIMIN
     Dosage: UNKNOWN
     Route: 065
  1506. RIFAXIMIN [Suspect]
     Active Substance: RIFAXIMIN
     Dosage: UNKNOWN
     Route: 065
  1507. RIFAXIMIN [Suspect]
     Active Substance: RIFAXIMIN
     Dosage: UNKNOWN
     Route: 065
  1508. RIFAXIMIN [Suspect]
     Active Substance: RIFAXIMIN
     Dosage: UNKNOWN
     Route: 065
  1509. RIFAXIMIN [Suspect]
     Active Substance: RIFAXIMIN
     Dosage: UNKNOWN
     Route: 065
  1510. RIFAXIMIN [Suspect]
     Active Substance: RIFAXIMIN
     Dosage: UNKNOWN
     Route: 065
  1511. RIFAXIMIN [Suspect]
     Active Substance: RIFAXIMIN
     Dosage: UNKNOWN
     Route: 065
  1512. RIFAXIMIN [Suspect]
     Active Substance: RIFAXIMIN
     Dosage: UNKNOWN
     Route: 065
  1513. RIFAXIMIN [Suspect]
     Active Substance: RIFAXIMIN
     Dosage: UNKNOWN
     Route: 065
  1514. RIFAXIMIN [Suspect]
     Active Substance: RIFAXIMIN
     Dosage: UNK
     Route: 050
  1515. RIFAXIMIN [Suspect]
     Active Substance: RIFAXIMIN
     Dosage: UNK
     Route: 050
  1516. RIFAXIMIN [Suspect]
     Active Substance: RIFAXIMIN
     Dosage: UNK
     Route: 050
  1517. RIFAXIMIN [Suspect]
     Active Substance: RIFAXIMIN
     Dosage: UNK
     Route: 050
  1518. RIFAXIMIN [Suspect]
     Active Substance: RIFAXIMIN
     Indication: Product used for unknown indication
     Dosage: UNKNOWN; ;
     Route: 050
  1519. RIFAXIMIN [Suspect]
     Active Substance: RIFAXIMIN
     Dosage: UNKNOWN; ;
     Route: 050
  1520. RIFAXIMIN [Suspect]
     Active Substance: RIFAXIMIN
     Dosage: UNKNOWN; ;
     Route: 050
  1521. RIFAXIMIN [Suspect]
     Active Substance: RIFAXIMIN
     Dosage: UNKNOWN; ;
     Route: 050
  1522. RIFAXIMIN [Suspect]
     Active Substance: RIFAXIMIN
     Dosage: UNK; ;
     Route: 050
  1523. RIFAXIMIN [Suspect]
     Active Substance: RIFAXIMIN
     Dosage: UNK
     Route: 050
  1524. RIFAXIMIN [Suspect]
     Active Substance: RIFAXIMIN
     Dosage: UNKNOWN, ADDITIONAL INFORMATION ON DRUG (FREE TEXT): ADALIMUMAB SOLUTION FOR INJECTION, SINGLE DOSE
     Route: 065
  1525. RIFAXIMIN [Suspect]
     Active Substance: RIFAXIMIN
     Dosage: UNKNOWN, ADDITIONAL INFORMATION ON DRUG (FREE TEXT): ADALIMUMAB SOLUTION FOR INJECTION, SINGLE DOSE
     Route: 065
  1526. RIFAXIMIN [Suspect]
     Active Substance: RIFAXIMIN
     Dosage: UNKNOWN, ADDITIONAL INFORMATION ON DRUG (FREE TEXT): ADALIMUMAB SOLUTION FOR INJECTION, SINGLE DOSE
     Route: 065
  1527. RIFAXIMIN [Suspect]
     Active Substance: RIFAXIMIN
     Dosage: UNKNOWN, ADDITIONAL INFORMATION ON DRUG (FREE TEXT): ADALIMUMAB SOLUTION FOR INJECTION, SINGLE DOSE
     Route: 065
  1528. RIFAXIMIN [Suspect]
     Active Substance: RIFAXIMIN
     Dosage: UNKNOWN, ADDITIONAL INFORMATION ON DRUG (FREE TEXT): ADALIMUMAB SOLUTION FOR INJECTION, SINGLE DOSE
     Route: 065
  1529. RIFAXIMIN [Suspect]
     Active Substance: RIFAXIMIN
     Dosage: UNKNOWN, ADDITIONAL INFORMATION ON DRUG (FREE TEXT): ADALIMUMAB SOLUTION FOR INJECTION, SINGLE DOSE
     Route: 065
  1530. RIFAXIMIN [Suspect]
     Active Substance: RIFAXIMIN
     Dosage: UNKNOWN, ADDITIONAL INFORMATION ON DRUG (FREE TEXT): ADALIMUMAB SOLUTION FOR INJECTION, SINGLE DOSE
     Route: 065
  1531. RIFAXIMIN [Suspect]
     Active Substance: RIFAXIMIN
     Dosage: UNKNOWN, ADDITIONAL INFORMATION ON DRUG (FREE TEXT): ADALIMUMAB SOLUTION FOR INJECTION, SINGLE DOSE
     Route: 065
  1532. RIFAXIMIN [Suspect]
     Active Substance: RIFAXIMIN
     Dosage: UNKNOWN, ADDITIONAL INFORMATION ON DRUG (FREE TEXT): ADALIMUMAB SOLUTION FOR INJECTION, SINGLE DOSE
     Route: 065
  1533. RIFAXIMIN [Suspect]
     Active Substance: RIFAXIMIN
     Dosage: UNKNOWN, ADDITIONAL INFORMATION ON DRUG (FREE TEXT): ADALIMUMAB SOLUTION FOR INJECTION, SINGLE DOSE
     Route: 065
  1534. RIFAXIMIN [Suspect]
     Active Substance: RIFAXIMIN
     Dosage: UNKNOWN, ADDITIONAL INFORMATION ON DRUG (FREE TEXT): ADALIMUMAB SOLUTION FOR INJECTION, SINGLE DOSE
     Route: 065
  1535. RIFAXIMIN [Suspect]
     Active Substance: RIFAXIMIN
     Dosage: UNKNOWN, ADDITIONAL INFORMATION ON DRUG (FREE TEXT): ADALIMUMAB SOLUTION FOR INJECTION, SINGLE DOSE
     Route: 065
  1536. RIFAXIMIN [Suspect]
     Active Substance: RIFAXIMIN
     Dosage: UNKNOWN
     Route: 065
  1537. RIFAXIMIN [Suspect]
     Active Substance: RIFAXIMIN
     Dosage: UNKNOWN
     Route: 065
  1538. RIFAXIMIN [Suspect]
     Active Substance: RIFAXIMIN
     Dosage: UNKNOWN
     Route: 065
  1539. RIFAXIMIN [Suspect]
     Active Substance: RIFAXIMIN
     Dosage: UNKNOWN
     Route: 065
  1540. RIFAXIMIN [Suspect]
     Active Substance: RIFAXIMIN
     Dosage: UNKNOWN
     Route: 065
  1541. RIFAXIMIN [Suspect]
     Active Substance: RIFAXIMIN
     Dosage: UNKNOWN
     Route: 065
  1542. RIFAXIMIN [Suspect]
     Active Substance: RIFAXIMIN
     Dosage: UNKNOWN
     Route: 065
  1543. RIFAXIMIN [Suspect]
     Active Substance: RIFAXIMIN
     Dosage: UNKNOWN
     Route: 065
  1544. RIFAXIMIN [Suspect]
     Active Substance: RIFAXIMIN
     Dosage: UNK, ADDITIONAL INFORMATION ON DRUG (FREE TEXT): ADALIMUMAB SOLUTION FOR INJECTION, SINGLE DOSE PEN
     Route: 065
  1545. RIFAXIMIN [Suspect]
     Active Substance: RIFAXIMIN
     Indication: Product used for unknown indication
     Dosage: UNK; ;
     Route: 050
  1546. RIFAXIMIN [Suspect]
     Active Substance: RIFAXIMIN
     Indication: Product used for unknown indication
     Dosage: UNK
     Route: 050
  1547. RIFAXIMIN [Suspect]
     Active Substance: RIFAXIMIN
     Dosage: UNK
     Route: 050
  1548. RIFAXIMIN [Suspect]
     Active Substance: RIFAXIMIN
     Dosage: UNK
     Route: 050
  1549. RIFAXIMIN [Suspect]
     Active Substance: RIFAXIMIN
     Dosage: UNK
     Route: 050
  1550. RIFAXIMIN [Suspect]
     Active Substance: RIFAXIMIN
     Dosage: UNK
     Route: 050
  1551. RIFAXIMIN [Suspect]
     Active Substance: RIFAXIMIN
     Dosage: UNK
     Route: 050
  1552. RIFAXIMIN [Suspect]
     Active Substance: RIFAXIMIN
     Dosage: UNK
     Route: 050
  1553. RIFAXIMIN [Suspect]
     Active Substance: RIFAXIMIN
     Dosage: UNK
     Route: 050
  1554. RIFAXIMIN [Suspect]
     Active Substance: RIFAXIMIN
     Dosage: UNK
     Route: 050
  1555. RIFAXIMIN [Suspect]
     Active Substance: RIFAXIMIN
     Dosage: UNK
     Route: 050
  1556. RIFAXIMIN [Suspect]
     Active Substance: RIFAXIMIN
     Dosage: UNK
     Route: 050
  1557. RIFAXIMIN [Suspect]
     Active Substance: RIFAXIMIN
     Dosage: UNK
     Route: 050
  1558. RIFAXIMIN [Suspect]
     Active Substance: RIFAXIMIN
     Dosage: UNK
     Route: 050
  1559. RIFAXIMIN [Suspect]
     Active Substance: RIFAXIMIN
     Dosage: UNK
     Route: 050
  1560. RIFAXIMIN [Suspect]
     Active Substance: RIFAXIMIN
     Dosage: UNK
     Route: 050
  1561. RIFAXIMIN [Suspect]
     Active Substance: RIFAXIMIN
     Dosage: UNK
     Route: 050
  1562. RIFAXIMIN [Suspect]
     Active Substance: RIFAXIMIN
     Dosage: UNK
     Route: 050
  1563. RIFAXIMIN [Suspect]
     Active Substance: RIFAXIMIN
     Dosage: UNK
     Route: 050
  1564. RIFAXIMIN [Suspect]
     Active Substance: RIFAXIMIN
     Dosage: UNK
     Route: 050
  1565. RIFAXIMIN [Suspect]
     Active Substance: RIFAXIMIN
     Dosage: UNK
     Route: 050
  1566. RIFAXIMIN [Suspect]
     Active Substance: RIFAXIMIN
     Dosage: UNK
     Route: 050
  1567. RIFAXIMIN [Suspect]
     Active Substance: RIFAXIMIN
     Dosage: UNK
     Route: 050
  1568. RIFAXIMIN [Suspect]
     Active Substance: RIFAXIMIN
     Dosage: UNK
     Route: 050
  1569. RIFAXIMIN [Suspect]
     Active Substance: RIFAXIMIN
     Dosage: UNK
     Route: 050
  1570. RIFAXIMIN [Suspect]
     Active Substance: RIFAXIMIN
     Dosage: UNK
     Route: 050
  1571. RIFAXIMIN [Suspect]
     Active Substance: RIFAXIMIN
     Dosage: UNK
     Route: 050
  1572. RIFAXIMIN [Suspect]
     Active Substance: RIFAXIMIN
     Dosage: UNK
     Route: 050
  1573. RIFAXIMIN [Suspect]
     Active Substance: RIFAXIMIN
     Dosage: UNK
     Route: 050
  1574. RIFAXIMIN [Suspect]
     Active Substance: RIFAXIMIN
     Dosage: UNK
     Route: 050
  1575. RIFAXIMIN [Suspect]
     Active Substance: RIFAXIMIN
     Dosage: UNK
     Route: 050
  1576. RIFAXIMIN [Suspect]
     Active Substance: RIFAXIMIN
     Dosage: UNK
     Route: 050
  1577. RIFAXIMIN [Suspect]
     Active Substance: RIFAXIMIN
     Dosage: UNK
     Route: 050
  1578. RIFAXIMIN [Suspect]
     Active Substance: RIFAXIMIN
     Dosage: UNK
     Route: 050
  1579. RIFAXIMIN [Suspect]
     Active Substance: RIFAXIMIN
     Dosage: UNK
     Route: 050
  1580. RIFAXIMIN [Suspect]
     Active Substance: RIFAXIMIN
     Dosage: UNK
     Route: 050
  1581. RIFAXIMIN [Suspect]
     Active Substance: RIFAXIMIN
     Dosage: UNK
     Route: 050
  1582. RIFAXIMIN [Suspect]
     Active Substance: RIFAXIMIN
     Dosage: UNK
     Route: 050
  1583. RIFAXIMIN [Suspect]
     Active Substance: RIFAXIMIN
     Dosage: UNK
     Route: 050
  1584. RIFAXIMIN [Suspect]
     Active Substance: RIFAXIMIN
     Dosage: UNK
     Route: 050
  1585. RIFAXIMIN [Suspect]
     Active Substance: RIFAXIMIN
     Dosage: UNK
     Route: 050
  1586. RIFAXIMIN [Suspect]
     Active Substance: RIFAXIMIN
     Dosage: UNK
     Route: 050
  1587. RIFAXIMIN [Suspect]
     Active Substance: RIFAXIMIN
     Dosage: UNK
     Route: 050
  1588. RIFAXIMIN [Suspect]
     Active Substance: RIFAXIMIN
     Dosage: UNK
     Route: 050
  1589. RIFAXIMIN [Suspect]
     Active Substance: RIFAXIMIN
     Dosage: UNK
     Route: 050
  1590. RIFAXIMIN [Suspect]
     Active Substance: RIFAXIMIN
     Dosage: UNK
     Route: 050
  1591. RIFAXIMIN [Suspect]
     Active Substance: RIFAXIMIN
     Dosage: UNK
     Route: 050
  1592. RIFAXIMIN [Suspect]
     Active Substance: RIFAXIMIN
     Dosage: UNK
     Route: 050
  1593. RIFAXIMIN [Suspect]
     Active Substance: RIFAXIMIN
     Dosage: UNK
     Route: 050
  1594. RIFAXIMIN [Suspect]
     Active Substance: RIFAXIMIN
     Dosage: UNK
     Route: 050
  1595. RIFAXIMIN [Suspect]
     Active Substance: RIFAXIMIN
     Dosage: UNK
     Route: 050
  1596. RIFAXIMIN [Suspect]
     Active Substance: RIFAXIMIN
     Indication: Product used for unknown indication
     Dosage: UNK
     Route: 050
  1597. RIFAXIMIN [Suspect]
     Active Substance: RIFAXIMIN
     Dosage: UNK
     Route: 050
  1598. RIFAXIMIN [Suspect]
     Active Substance: RIFAXIMIN
     Dosage: UNK
     Route: 050
  1599. RIFAXIMIN [Suspect]
     Active Substance: RIFAXIMIN
     Dosage: UNK
     Route: 050
  1600. RIFAXIMIN [Suspect]
     Active Substance: RIFAXIMIN
     Dosage: UNK
     Route: 050
  1601. RIFAXIMIN [Suspect]
     Active Substance: RIFAXIMIN
     Dosage: UNK
     Route: 050
  1602. RIFAXIMIN [Suspect]
     Active Substance: RIFAXIMIN
     Dosage: UNK
     Route: 050
  1603. RIFAXIMIN [Suspect]
     Active Substance: RIFAXIMIN
     Dosage: UNK
     Route: 050
  1604. RIFAXIMIN [Suspect]
     Active Substance: RIFAXIMIN
     Dosage: UNK
     Route: 050
  1605. RIFAXIMIN [Suspect]
     Active Substance: RIFAXIMIN
     Dosage: UNK
     Route: 050
  1606. RIFAXIMIN [Suspect]
     Active Substance: RIFAXIMIN
     Dosage: UNK
     Route: 050
  1607. RIFAXIMIN [Suspect]
     Active Substance: RIFAXIMIN
     Dosage: UNK
     Route: 050
  1608. RIFAXIMIN [Suspect]
     Active Substance: RIFAXIMIN
     Dosage: UNK
     Route: 050
  1609. RIFAXIMIN [Suspect]
     Active Substance: RIFAXIMIN
     Dosage: UNK
     Route: 050
  1610. RIFAXIMIN [Suspect]
     Active Substance: RIFAXIMIN
     Dosage: UNK
     Route: 050
  1611. RIFAXIMIN [Suspect]
     Active Substance: RIFAXIMIN
     Dosage: UNK
     Route: 050
  1612. RIFAXIMIN [Suspect]
     Active Substance: RIFAXIMIN
     Dosage: UNK
     Route: 050
  1613. RIFAXIMIN [Suspect]
     Active Substance: RIFAXIMIN
     Dosage: UNK
     Route: 050
  1614. RIFAXIMIN [Suspect]
     Active Substance: RIFAXIMIN
     Dosage: UNK
     Route: 050
  1615. RIFAXIMIN [Suspect]
     Active Substance: RIFAXIMIN
     Dosage: UNK
     Route: 050
  1616. RIFAXIMIN [Suspect]
     Active Substance: RIFAXIMIN
     Dosage: UNK
     Route: 050
  1617. RIFAXIMIN [Suspect]
     Active Substance: RIFAXIMIN
     Dosage: UNK
     Route: 050
  1618. RIFAXIMIN [Suspect]
     Active Substance: RIFAXIMIN
     Dosage: UNK
     Route: 050
  1619. RIFAXIMIN [Suspect]
     Active Substance: RIFAXIMIN
     Dosage: UNK
     Route: 050
  1620. RIFAXIMIN [Suspect]
     Active Substance: RIFAXIMIN
     Dosage: UNK
     Route: 050
  1621. RIFAXIMIN [Suspect]
     Active Substance: RIFAXIMIN
     Dosage: UNK
     Route: 050
  1622. RIFAXIMIN [Suspect]
     Active Substance: RIFAXIMIN
     Dosage: UNK
     Route: 050
  1623. RIFAXIMIN [Suspect]
     Active Substance: RIFAXIMIN
     Dosage: UNK
     Route: 050
  1624. RIFAXIMIN [Suspect]
     Active Substance: RIFAXIMIN
     Dosage: UNK
     Route: 050
  1625. RIFAXIMIN [Suspect]
     Active Substance: RIFAXIMIN
     Dosage: UNK
     Route: 050
  1626. RIFAXIMIN [Suspect]
     Active Substance: RIFAXIMIN
     Dosage: UNK
     Route: 050
  1627. RIFAXIMIN [Suspect]
     Active Substance: RIFAXIMIN
     Dosage: UNK
     Route: 050
  1628. RIFAXIMIN [Suspect]
     Active Substance: RIFAXIMIN
     Dosage: UNK
     Route: 050
  1629. RIFAXIMIN [Suspect]
     Active Substance: RIFAXIMIN
     Dosage: UNK
     Route: 050
  1630. RIFAXIMIN [Suspect]
     Active Substance: RIFAXIMIN
     Dosage: UNK
     Route: 050
  1631. RIFAXIMIN [Suspect]
     Active Substance: RIFAXIMIN
     Dosage: UNK
     Route: 050
  1632. RIFAXIMIN [Suspect]
     Active Substance: RIFAXIMIN
     Dosage: UNK
     Route: 050
  1633. RIFAXIMIN [Suspect]
     Active Substance: RIFAXIMIN
     Dosage: UNK
     Route: 050
  1634. RIFAXIMIN [Suspect]
     Active Substance: RIFAXIMIN
     Dosage: UNK
     Route: 050
  1635. RIFAXIMIN [Suspect]
     Active Substance: RIFAXIMIN
     Dosage: UNK
     Route: 050
  1636. RIFAXIMIN [Suspect]
     Active Substance: RIFAXIMIN
     Dosage: UNK
     Route: 065
  1637. RIFAXIMIN [Suspect]
     Active Substance: RIFAXIMIN
     Dosage: UNK
     Route: 065
  1638. RIFAXIMIN [Suspect]
     Active Substance: RIFAXIMIN
     Dosage: UNK
     Route: 065
  1639. RIFAXIMIN [Suspect]
     Active Substance: RIFAXIMIN
     Dosage: UNK
     Route: 065
  1640. RIFAXIMIN [Suspect]
     Active Substance: RIFAXIMIN
     Dosage: UNK
     Route: 065
  1641. RIFAXIMIN [Suspect]
     Active Substance: RIFAXIMIN
     Dosage: UNK
     Route: 065
  1642. RIFAXIMIN [Suspect]
     Active Substance: RIFAXIMIN
     Dosage: UNK
     Route: 065
  1643. RIFAXIMIN [Suspect]
     Active Substance: RIFAXIMIN
     Dosage: UNK
     Route: 065
  1644. RIFAXIMIN [Suspect]
     Active Substance: RIFAXIMIN
     Indication: Product used for unknown indication
     Dosage: UNKNOWN
     Route: 065
  1645. RIFAXIMIN [Suspect]
     Active Substance: RIFAXIMIN
     Dosage: UNKNOWN
     Route: 065
  1646. RIFAXIMIN [Suspect]
     Active Substance: RIFAXIMIN
     Dosage: UNKNOWN
     Route: 065
  1647. RIFAXIMIN [Suspect]
     Active Substance: RIFAXIMIN
     Dosage: UNKNOWN
     Route: 065
  1648. RIFAXIMIN [Suspect]
     Active Substance: RIFAXIMIN
     Dosage: UNKNOWN
     Route: 065
  1649. RIFAXIMIN [Suspect]
     Active Substance: RIFAXIMIN
     Dosage: UNK
     Route: 065
  1650. RIFAXIMIN [Suspect]
     Active Substance: RIFAXIMIN
     Dosage: UNKNOWN
     Route: 065
  1651. RIFAXIMIN [Suspect]
     Active Substance: RIFAXIMIN
     Dosage: UNKNOWN
     Route: 065
  1652. RIFAXIMIN [Suspect]
     Active Substance: RIFAXIMIN
     Dosage: UNKNOWN
     Route: 065
  1653. RIFAXIMIN [Suspect]
     Active Substance: RIFAXIMIN
     Dosage: UNK
     Route: 065
  1654. RIFAXIMIN [Suspect]
     Active Substance: RIFAXIMIN
     Dosage: UNKNOWN
     Route: 065
  1655. RIFAXIMIN [Suspect]
     Active Substance: RIFAXIMIN
     Dosage: UNKNOWN
     Route: 065
  1656. RIFAXIMIN [Suspect]
     Active Substance: RIFAXIMIN
     Dosage: UNKNOWN
     Route: 065
  1657. RIFAXIMIN [Suspect]
     Active Substance: RIFAXIMIN
     Dosage: UNKNOWN
     Route: 065
  1658. RIFAXIMIN [Suspect]
     Active Substance: RIFAXIMIN
     Dosage: UNKNOWN
     Route: 065
  1659. RIFAXIMIN [Suspect]
     Active Substance: RIFAXIMIN
     Dosage: UNKNOWN
     Route: 065
  1660. RIFAXIMIN [Suspect]
     Active Substance: RIFAXIMIN
     Dosage: UNKNOWN
     Route: 065
  1661. RIFAXIMIN [Suspect]
     Active Substance: RIFAXIMIN
     Dosage: UNKNOWN
     Route: 065
  1662. RIFAXIMIN [Suspect]
     Active Substance: RIFAXIMIN
     Dosage: UNK
     Route: 065
  1663. RIFAXIMIN [Suspect]
     Active Substance: RIFAXIMIN
     Dosage: UNK
     Route: 065
  1664. RIFAXIMIN [Suspect]
     Active Substance: RIFAXIMIN
     Dosage: UNKNOWN
     Route: 065
  1665. RIFAXIMIN [Suspect]
     Active Substance: RIFAXIMIN
     Dosage: UNKNOWN
     Route: 065
  1666. RIFAXIMIN [Suspect]
     Active Substance: RIFAXIMIN
     Dosage: UNKNOWN
     Route: 065
  1667. RIFAXIMIN [Suspect]
     Active Substance: RIFAXIMIN
     Dosage: UNKNOWN
     Route: 065
  1668. RIFAXIMIN [Suspect]
     Active Substance: RIFAXIMIN
     Dosage: UNK
     Route: 065
  1669. RIFAXIMIN [Suspect]
     Active Substance: RIFAXIMIN
     Indication: Product used for unknown indication
     Dosage: UNK
  1670. METHOTREXATE [Suspect]
     Active Substance: METHOTREXATE
     Indication: Product used for unknown indication
     Dosage: UNK
     Route: 050
     Dates: start: 20211112
  1671. METHOTREXATE [Suspect]
     Active Substance: METHOTREXATE
     Indication: Product used for unknown indication
     Dosage: UNK
     Route: 050
     Dates: start: 20211211
  1672. METHOTREXATE [Suspect]
     Active Substance: METHOTREXATE
     Dosage: UNK
     Route: 050
  1673. METHOTREXATE [Suspect]
     Active Substance: METHOTREXATE
     Dosage: UNK
     Route: 050
  1674. METHOTREXATE [Suspect]
     Active Substance: METHOTREXATE
     Dosage: UNK
     Route: 050
  1675. METHOTREXATE [Suspect]
     Active Substance: METHOTREXATE
     Dosage: UNK
     Route: 050
  1676. METHOTREXATE [Suspect]
     Active Substance: METHOTREXATE
     Dosage: UNK UNK, UNK
     Route: 065
  1677. METHOTREXATE [Suspect]
     Active Substance: METHOTREXATE
     Dosage: UNK UNK, UNK
     Route: 065
  1678. METHOTREXATE [Suspect]
     Active Substance: METHOTREXATE
     Dosage: UNK UNK, UNK
     Route: 065
  1679. METHOTREXATE [Suspect]
     Active Substance: METHOTREXATE
     Dosage: UNK UNK, UNK
     Route: 065
  1680. METHOTREXATE [Suspect]
     Active Substance: METHOTREXATE
     Dosage: UNK UNK, UNK
     Route: 065
  1681. METHOTREXATE [Suspect]
     Active Substance: METHOTREXATE
     Dosage: UNK UNK, UNK
     Route: 065
  1682. METHOTREXATE [Suspect]
     Active Substance: METHOTREXATE
     Dosage: UNK UNK, UNK
     Route: 065
  1683. METHOTREXATE [Suspect]
     Active Substance: METHOTREXATE
     Dosage: UNK UNK, UNK
     Route: 065
  1684. METHOTREXATE [Suspect]
     Active Substance: METHOTREXATE
     Dosage: UNK UNK, UNK
     Route: 065
  1685. METHOTREXATE [Suspect]
     Active Substance: METHOTREXATE
     Dosage: UNK UNK, UNK
     Route: 065
  1686. METHOTREXATE [Suspect]
     Active Substance: METHOTREXATE
     Dosage: UNK UNK, UNK
     Route: 065
  1687. METHOTREXATE [Suspect]
     Active Substance: METHOTREXATE
     Dosage: UNK UNK, UNK
     Route: 065
  1688. METHOTREXATE [Suspect]
     Active Substance: METHOTREXATE
     Dosage: UNK UNK, UNK
     Route: 065
  1689. METHOTREXATE [Suspect]
     Active Substance: METHOTREXATE
     Dosage: UNK (ADALIMUMAB SOLUTION FOR INJECTION, SINGLE DOSE PEN)
     Route: 065
  1690. METHOTREXATE [Suspect]
     Active Substance: METHOTREXATE
     Dosage: UNK, ADDITIONAL INFORMATION ON DRUG (FREE TEXT): ADALIMUMAB SOLUTION FOR INJECTION, SINGLE DOSE PEN
     Route: 065
  1691. METHOTREXATE [Suspect]
     Active Substance: METHOTREXATE
     Dosage: UNK, ADDITIONAL INFORMATION ON DRUG (FREE TEXT): ADALIMUMAB SOLUTION FOR INJECTION, SINGLE DOSE PEN
     Route: 065
  1692. METHOTREXATE [Suspect]
     Active Substance: METHOTREXATE
     Dosage: UNK, ADDITIONAL INFORMATION ON DRUG (FREE TEXT): ADALIMUMAB SOLUTION FOR INJECTION, SINGLE DOSE PEN
     Route: 065
  1693. METHOTREXATE [Suspect]
     Active Substance: METHOTREXATE
     Dosage: UNK, ADDITIONAL INFORMATION ON DRUG (FREE TEXT): ADALIMUMAB SOLUTION FOR INJECTION, SINGLE DOSE PEN
     Route: 065
  1694. METHOTREXATE [Suspect]
     Active Substance: METHOTREXATE
     Dosage: UNK, ADDITIONAL INFORMATION ON DRUG (FREE TEXT): ADALIMUMAB SOLUTION FOR INJECTION, SINGLE DOSE PEN
     Route: 065
  1695. METHOTREXATE [Suspect]
     Active Substance: METHOTREXATE
     Dosage: UNK, ADDITIONAL INFORMATION ON DRUG (FREE TEXT): ADALIMUMAB SOLUTION FOR INJECTION, SINGLE DOSE PEN
     Route: 065
  1696. METHOTREXATE [Suspect]
     Active Substance: METHOTREXATE
     Dosage: UNK, ADDITIONAL INFORMATION ON DRUG (FREE TEXT): ADALIMUMAB SOLUTION FOR INJECTION, SINGLE DOSE PEN
     Route: 065
  1697. METHOTREXATE [Suspect]
     Active Substance: METHOTREXATE
     Dosage: UNK
     Route: 065
  1698. METHOTREXATE [Suspect]
     Active Substance: METHOTREXATE
     Dosage: UNK, ADDITIONAL INFORMATION ON DRUG (FREE TEXT): ADALIMUMAB SOLUTION FOR INJECTION, SINGLE DOSE PEN
     Route: 050
     Dates: start: 20211112
  1699. METHOTREXATE [Suspect]
     Active Substance: METHOTREXATE
     Dosage: UNK
     Route: 050
  1700. METHOTREXATE [Suspect]
     Active Substance: METHOTREXATE
     Dosage: UNK
     Route: 050
  1701. METHOTREXATE [Suspect]
     Active Substance: METHOTREXATE
     Dosage: UNK
     Route: 050
  1702. METHOTREXATE [Suspect]
     Active Substance: METHOTREXATE
     Dosage: UNK
     Route: 050
  1703. METHOTREXATE [Suspect]
     Active Substance: METHOTREXATE
     Dosage: UNK
     Route: 050
  1704. METHOTREXATE [Suspect]
     Active Substance: METHOTREXATE
     Dosage: UNK
     Route: 050
  1705. METHOTREXATE [Suspect]
     Active Substance: METHOTREXATE
     Dosage: UNK
     Route: 065
  1706. METHOTREXATE [Suspect]
     Active Substance: METHOTREXATE
     Dosage: UNK (ADALIMUMAB SOLUTION FOR INJECTION, SINGLE DOSE PEN)
     Route: 065
  1707. METHOTREXATE [Suspect]
     Active Substance: METHOTREXATE
     Dosage: UNK (ADALIMUMAB SOLUTION FOR INJECTION, SINGLE DOSE PEN)
     Route: 065
  1708. METHOTREXATE [Suspect]
     Active Substance: METHOTREXATE
     Dosage: UNK (ADALIMUMAB SOLUTION FOR INJECTION, SINGLE DOSE PEN)
     Route: 065
  1709. METHOTREXATE [Suspect]
     Active Substance: METHOTREXATE
     Dosage: UNK (ADALIMUMAB SOLUTION FOR INJECTION, SINGLE DOSE PEN)
     Route: 065
  1710. METHOTREXATE [Suspect]
     Active Substance: METHOTREXATE
     Dosage: UNK (ADALIMUMAB SOLUTION FOR INJECTION, SINGLE DOSE PEN)
     Route: 065
  1711. METHOTREXATE [Suspect]
     Active Substance: METHOTREXATE
     Dosage: UNK (ADALIMUMAB SOLUTION FOR INJECTION, SINGLE DOSE PEN)
     Route: 065
  1712. METHOTREXATE [Suspect]
     Active Substance: METHOTREXATE
     Dosage: UNK, OTHER
     Route: 065
  1713. METHOTREXATE [Suspect]
     Active Substance: METHOTREXATE
     Dosage: UNK, OTHER
     Route: 065
  1714. METHOTREXATE [Suspect]
     Active Substance: METHOTREXATE
     Dosage: UNK, OTHER
     Route: 065
  1715. METHOTREXATE [Suspect]
     Active Substance: METHOTREXATE
     Dosage: UNK, OTHER
     Route: 065
  1716. METHOTREXATE [Suspect]
     Active Substance: METHOTREXATE
     Dosage: UNK, OTHER
     Route: 065
  1717. METHOTREXATE [Suspect]
     Active Substance: METHOTREXATE
     Dosage: UNK, OTHER
     Route: 065
  1718. METHOTREXATE [Suspect]
     Active Substance: METHOTREXATE
     Dosage: UNK, OTHER
     Route: 065
  1719. METHOTREXATE [Suspect]
     Active Substance: METHOTREXATE
     Dosage: UNK, OTHER
     Route: 065
  1720. METHOTREXATE [Suspect]
     Active Substance: METHOTREXATE
     Indication: Product used for unknown indication
     Dosage: UNK; ADDITIONAL INFO: ROUTE:OTHER
     Route: 050
  1721. METHOTREXATE [Suspect]
     Active Substance: METHOTREXATE
     Dosage: UNK; ;
     Route: 050
     Dates: start: 20211112
  1722. METHOTREXATE [Suspect]
     Active Substance: METHOTREXATE
     Indication: Product used for unknown indication
     Dosage: UNK, OTHER
     Route: 065
  1723. METHOTREXATE [Suspect]
     Active Substance: METHOTREXATE
     Dosage: UNK, OTHER
     Route: 065
  1724. METHOTREXATE [Suspect]
     Active Substance: METHOTREXATE
     Dosage: UNK, OTHER
     Route: 065
  1725. METHOTREXATE [Suspect]
     Active Substance: METHOTREXATE
     Dosage: UNK, OTHER
     Route: 065
  1726. METHOTREXATE [Suspect]
     Active Substance: METHOTREXATE
     Dosage: UNK, OTHER
     Route: 065
  1727. METHOTREXATE [Suspect]
     Active Substance: METHOTREXATE
     Dosage: UNK, OTHER
     Route: 065
  1728. METHOTREXATE [Suspect]
     Active Substance: METHOTREXATE
     Dosage: UNK, OTHER
     Route: 065
  1729. METHOTREXATE [Suspect]
     Active Substance: METHOTREXATE
     Dosage: UNK, OTHER
     Route: 065
  1730. METHOTREXATE [Suspect]
     Active Substance: METHOTREXATE
     Dosage: UNK, OTHER
     Route: 065
  1731. METHOTREXATE [Suspect]
     Active Substance: METHOTREXATE
     Dosage: UNK, OTHER
     Route: 065
  1732. METHOTREXATE [Suspect]
     Active Substance: METHOTREXATE
     Dosage: UNK, OTHER
     Route: 065
  1733. METHOTREXATE [Suspect]
     Active Substance: METHOTREXATE
     Dosage: UNK, OTHER
     Route: 065
  1734. METHOTREXATE [Suspect]
     Active Substance: METHOTREXATE
     Dosage: UNKNOWN; ;
     Route: 050
  1735. METHOTREXATE [Suspect]
     Active Substance: METHOTREXATE
     Dosage: UNKNOWN; ;
     Route: 050
  1736. METHOTREXATE [Suspect]
     Active Substance: METHOTREXATE
     Dosage: UNKNOWN; ;
     Route: 050
  1737. METHOTREXATE [Suspect]
     Active Substance: METHOTREXATE
     Dosage: UNKNOWN; ;
     Route: 050
  1738. METHOTREXATE [Suspect]
     Active Substance: METHOTREXATE
     Dosage: UNKNOWN; ;
     Route: 050
  1739. METHOTREXATE [Suspect]
     Active Substance: METHOTREXATE
     Dosage: UNK; ;
     Route: 050
     Dates: start: 20211112
  1740. METHOTREXATE [Suspect]
     Active Substance: METHOTREXATE
     Dosage: UNK; ;ADDITIONAL INFORMATION ON DRUG (FREE TEXT): ADALIMUMAB SOLUTION FOR INJECTION, SINGLE DOSE PEN
     Route: 050
  1741. METHOTREXATE [Suspect]
     Active Substance: METHOTREXATE
     Dosage: UNK; ;ADDITIONAL INFORMATION ON DRUG (FREE TEXT): ADALIMUMAB SOLUTION FOR INJECTION, SINGLE DOSE PEN
     Route: 050
  1742. METHOTREXATE [Suspect]
     Active Substance: METHOTREXATE
     Dosage: UNK; ;ADDITIONAL INFORMATION ON DRUG (FREE TEXT): ADALIMUMAB SOLUTION FOR INJECTION, SINGLE DOSE PEN
     Route: 050
  1743. METHOTREXATE [Suspect]
     Active Substance: METHOTREXATE
     Dosage: UNK; ;ADDITIONAL INFORMATION ON DRUG (FREE TEXT): ADALIMUMAB SOLUTION FOR INJECTION, SINGLE DOSE PEN
     Route: 050
  1744. METHOTREXATE [Suspect]
     Active Substance: METHOTREXATE
     Dosage: UNK; ;ADDITIONAL INFORMATION ON DRUG (FREE TEXT): ADALIMUMAB SOLUTION FOR INJECTION, SINGLE DOSE PEN
     Route: 050
  1745. METHOTREXATE [Suspect]
     Active Substance: METHOTREXATE
     Dosage: UNK; ;ADDITIONAL INFORMATION ON DRUG (FREE TEXT): ADALIMUMAB SOLUTION FOR INJECTION, SINGLE DOSE PEN
     Route: 050
  1746. METHOTREXATE [Suspect]
     Active Substance: METHOTREXATE
     Dosage: UNK; ;ADDITIONAL INFORMATION ON DRUG (FREE TEXT): ADALIMUMAB SOLUTION FOR INJECTION, SINGLE DOSE PEN
     Route: 050
  1747. METHOTREXATE [Suspect]
     Active Substance: METHOTREXATE
     Dosage: UNK; ;ADDITIONAL INFORMATION ON DRUG (FREE TEXT): ADALIMUMAB SOLUTION FOR INJECTION, SINGLE DOSE PEN
     Route: 050
  1748. METHOTREXATE [Suspect]
     Active Substance: METHOTREXATE
     Dosage: UNK; ;ADDITIONAL INFORMATION ON DRUG (FREE TEXT): ADALIMUMAB SOLUTION FOR INJECTION, SINGLE DOSE PEN
     Route: 050
  1749. METHOTREXATE [Suspect]
     Active Substance: METHOTREXATE
     Dosage: UNK; ;ADDITIONAL INFORMATION ON DRUG (FREE TEXT): ADALIMUMAB SOLUTION FOR INJECTION, SINGLE DOSE PEN
     Route: 050
  1750. METHOTREXATE [Suspect]
     Active Substance: METHOTREXATE
     Dosage: UNK; ;ADDITIONAL INFORMATION ON DRUG (FREE TEXT): ADALIMUMAB SOLUTION FOR INJECTION, SINGLE DOSE PEN
     Route: 050
  1751. METHOTREXATE [Suspect]
     Active Substance: METHOTREXATE
     Dosage: UNK; ;ADDITIONAL INFORMATION ON DRUG (FREE TEXT): ADALIMUMAB SOLUTION FOR INJECTION, SINGLE DOSE PEN
     Route: 050
  1752. METHOTREXATE [Suspect]
     Active Substance: METHOTREXATE
     Dosage: UNK; ;ADDITIONAL INFORMATION ON DRUG (FREE TEXT): ADALIMUMAB SOLUTION FOR INJECTION, SINGLE DOSE PEN
     Route: 050
  1753. METHOTREXATE [Suspect]
     Active Substance: METHOTREXATE
     Dosage: UNK; ;ADDITIONAL INFORMATION ON DRUG (FREE TEXT): ADALIMUMAB SOLUTION FOR INJECTION, SINGLE DOSE PEN
     Route: 050
  1754. METHOTREXATE [Suspect]
     Active Substance: METHOTREXATE
     Dosage: UNK
     Route: 050
     Dates: start: 20211112
  1755. METHOTREXATE [Suspect]
     Active Substance: METHOTREXATE
     Dosage: UNK (ADALIMUMAB SOLUTION FOR INJECTION, SINGLE DOSE PEN)
     Route: 065
     Dates: start: 20211211
  1756. METHOTREXATE [Suspect]
     Active Substance: METHOTREXATE
     Dosage: UNK (ADALIMUMAB SOLUTION FOR INJECTION, SINGLE DOSE PEN)
     Route: 065
     Dates: start: 20211212
  1757. METHOTREXATE [Suspect]
     Active Substance: METHOTREXATE
     Dosage: UNK; ADDITIONAL INFORMATION ON DRUG (FREE TEXT): ADALIMUMAB SOLUTION FOR INJECTION, SINGLE DOSE PEN
     Route: 050
     Dates: start: 20211211
  1758. METHOTREXATE [Suspect]
     Active Substance: METHOTREXATE
     Dosage: UNK; ADDITIONAL INFORMATION ON DRUG (FREE TEXT): ADALIMUMAB SOLUTION FOR INJECTION, SINGLE DOSE PEN
     Route: 050
     Dates: start: 20211112
  1759. METHOTREXATE [Suspect]
     Active Substance: METHOTREXATE
     Dosage: UNK (ADALIMUMAB SOLUTION FOR INJECTION, SINGLE DOSE PEN)
     Route: 065
  1760. METHOTREXATE [Suspect]
     Active Substance: METHOTREXATE
     Dosage: UNK (ADALIMUMAB SOLUTION FOR INJECTION, SINGLE DOSE PEN)
     Route: 065
  1761. METHOTREXATE [Suspect]
     Active Substance: METHOTREXATE
     Dosage: UNK (ADALIMUMAB SOLUTION FOR INJECTION, SINGLE DOSE PEN)
     Route: 065
  1762. METHOTREXATE [Suspect]
     Active Substance: METHOTREXATE
     Dosage: UNK (ADALIMUMAB SOLUTION FOR INJECTION, SINGLE DOSE PEN)
     Route: 065
  1763. METHOTREXATE [Suspect]
     Active Substance: METHOTREXATE
     Dosage: UNK (ADALIMUMAB SOLUTION FOR INJECTION, SINGLE DOSE PEN)
     Route: 065
  1764. METHOTREXATE [Suspect]
     Active Substance: METHOTREXATE
     Dosage: UNK (ADALIMUMAB SOLUTION FOR INJECTION, SINGLE DOSE PEN)
     Route: 065
  1765. METHOTREXATE [Suspect]
     Active Substance: METHOTREXATE
     Dosage: UNK (ADALIMUMAB SOLUTION FOR INJECTION, SINGLE DOSE PEN)
     Route: 065
  1766. METHOTREXATE [Suspect]
     Active Substance: METHOTREXATE
     Dosage: UNK (ADALIMUMAB SOLUTION FOR INJECTION, SINGLE DOSE PEN)
     Route: 065
  1767. METHOTREXATE [Suspect]
     Active Substance: METHOTREXATE
     Dosage: UNK (ADALIMUMAB SOLUTION FOR INJECTION, SINGLE DOSE PEN)
     Route: 065
  1768. METHOTREXATE [Suspect]
     Active Substance: METHOTREXATE
     Dosage: UNK (ADALIMUMAB SOLUTION FOR INJECTION, SINGLE DOSE PEN)
     Route: 065
  1769. METHOTREXATE [Suspect]
     Active Substance: METHOTREXATE
     Dosage: UNK (ADALIMUMAB SOLUTION FOR INJECTION, SINGLE DOSE PEN)
     Route: 065
  1770. METHOTREXATE [Suspect]
     Active Substance: METHOTREXATE
     Dosage: UNK (ADALIMUMAB SOLUTION FOR INJECTION, SINGLE DOSE PEN)
     Route: 065
  1771. METHOTREXATE [Suspect]
     Active Substance: METHOTREXATE
     Dosage: UNK (ADALIMUMAB SOLUTION FOR INJECTION, SINGLE DOSE PEN)
     Route: 065
  1772. METHOTREXATE [Suspect]
     Active Substance: METHOTREXATE
     Indication: Product used for unknown indication
     Route: 065
  1773. METHOTREXATE [Suspect]
     Active Substance: METHOTREXATE
     Indication: Product used for unknown indication
     Dosage: UNK
     Dates: start: 20211112
  1774. METHOTREXATE [Suspect]
     Active Substance: METHOTREXATE
     Dosage: UNK
  1775. METHOTREXATE [Suspect]
     Active Substance: METHOTREXATE
     Indication: Product used for unknown indication
     Dosage: UNK
     Route: 065
  1776. METHOTREXATE [Suspect]
     Active Substance: METHOTREXATE
     Dosage: UNK, ADDITIONAL INFORMATION ON DRUG (FREE TEXT): ADALIMUMAB SOLUTION FOR INJECTION, SINGLE DOSE PEN
  1777. METHOTREXATE [Suspect]
     Active Substance: METHOTREXATE
     Dosage: UNKNOWN, ADDITIONAL INFORMATION ON DRUG (FREE TEXT): ADALIMUMAB SOLUTION FOR INJECTION, SINGLE DOSE
  1778. METHOTREXATE [Suspect]
     Active Substance: METHOTREXATE
     Dosage: UNKNOWN, ADDITIONAL INFORMATION ON DRUG (FREE TEXT): ADALIMUMAB SOLUTION FOR INJECTION, SINGLE DOSE
  1779. METHOTREXATE [Suspect]
     Active Substance: METHOTREXATE
     Dosage: UNKNOWN, ADDITIONAL INFORMATION ON DRUG (FREE TEXT): ADALIMUMAB SOLUTION FOR INJECTION, SINGLE DOSE
  1780. METHOTREXATE [Suspect]
     Active Substance: METHOTREXATE
     Dosage: UNKNOWN, ADDITIONAL INFORMATION ON DRUG (FREE TEXT): ADALIMUMAB SOLUTION FOR INJECTION, SINGLE DOSE
  1781. METHOTREXATE [Suspect]
     Active Substance: METHOTREXATE
     Dosage: UNKNOWN, ADDITIONAL INFORMATION ON DRUG (FREE TEXT): ADALIMUMAB SOLUTION FOR INJECTION, SINGLE DOSE
  1782. METHOTREXATE [Suspect]
     Active Substance: METHOTREXATE
     Dosage: UNKNOWN, ADDITIONAL INFORMATION ON DRUG (FREE TEXT): ADALIMUMAB SOLUTION FOR INJECTION, SINGLE DOSE
  1783. METHOTREXATE [Suspect]
     Active Substance: METHOTREXATE
     Dosage: UNKNOWN, ADDITIONAL INFORMATION ON DRUG (FREE TEXT): ADALIMUMAB SOLUTION FOR INJECTION, SINGLE DOSE
  1784. METHOTREXATE [Suspect]
     Active Substance: METHOTREXATE
     Dosage: UNKNOWN, ADDITIONAL INFORMATION ON DRUG (FREE TEXT): ADALIMUMAB SOLUTION FOR INJECTION, SINGLE DOSE
  1785. METHOTREXATE [Suspect]
     Active Substance: METHOTREXATE
     Dosage: UNK, ADDITIONAL INFORMATION ON DRUG (FREE TEXT): ADALIMUMAB SOLUTION FOR INJECTION, SINGLE DOSE PEN
  1786. METHOTREXATE [Suspect]
     Active Substance: METHOTREXATE
     Dosage: UNKNOWN, ADDITIONAL INFORMATION ON DRUG (FREE TEXT): ADALIMUMAB SOLUTION FOR INJECTION, SINGLE DOSE
  1787. METHOTREXATE [Suspect]
     Active Substance: METHOTREXATE
     Dosage: UNKNOWN, ADDITIONAL INFORMATION ON DRUG (FREE TEXT): ADALIMUMAB SOLUTION FOR INJECTION, SINGLE DOSE
  1788. METHOTREXATE [Suspect]
     Active Substance: METHOTREXATE
     Indication: Product used for unknown indication
     Dosage: UNK (ADALIMUMAB SOLUTION FOR INJECTION, SINGLE DOSE PEN)
     Route: 065
  1789. METHOTREXATE [Suspect]
     Active Substance: METHOTREXATE
     Dosage: UNK (ADALIMUMAB SOLUTION FOR INJECTION, SINGLE DOSE PEN)
     Route: 065
  1790. METHOTREXATE [Suspect]
     Active Substance: METHOTREXATE
     Dosage: UNK (ADALIMUMAB SOLUTION FOR INJECTION, SINGLE DOSE PEN)
     Route: 065
  1791. METHOTREXATE [Suspect]
     Active Substance: METHOTREXATE
     Dosage: UNK (ADALIMUMAB SOLUTION FOR INJECTION, SINGLE DOSE PEN)
     Route: 065
  1792. METHOTREXATE [Suspect]
     Active Substance: METHOTREXATE
     Dosage: UNK (ADALIMUMAB SOLUTION FOR INJECTION, SINGLE DOSE PEN)
     Route: 065
  1793. METHOTREXATE [Suspect]
     Active Substance: METHOTREXATE
     Dosage: UNK (ADALIMUMAB SOLUTION FOR INJECTION, SINGLE DOSE PEN)
     Route: 065
  1794. METHOTREXATE [Suspect]
     Active Substance: METHOTREXATE
     Dosage: UNK, ADDITIONAL INFORMATION ON DRUG (FREE TEXT): ADALIMUMAB SOLUTION FOR INJECTION, SINGLE DOSE PEN
     Route: 050
  1795. METHOTREXATE [Suspect]
     Active Substance: METHOTREXATE
     Dosage: UNK, ADDITIONAL INFORMATION ON DRUG (FREE TEXT): ADALIMUMAB SOLUTION FOR INJECTION, SINGLE DOSE PEN
     Route: 050
  1796. METHOTREXATE [Suspect]
     Active Substance: METHOTREXATE
     Dosage: UNK, ADDITIONAL INFORMATION ON DRUG (FREE TEXT): ADALIMUMAB SOLUTION FOR INJECTION, SINGLE DOSE PEN
     Route: 050
  1797. METHOTREXATE [Suspect]
     Active Substance: METHOTREXATE
     Dosage: UNK, ADDITIONAL INFORMATION ON DRUG (FREE TEXT): ADALIMUMAB SOLUTION FOR INJECTION, SINGLE DOSE PEN
     Route: 050
  1798. METHOTREXATE [Suspect]
     Active Substance: METHOTREXATE
     Dosage: UNK, ADDITIONAL INFORMATION ON DRUG (FREE TEXT): ADALIMUMAB SOLUTION FOR INJECTION, SINGLE DOSE PEN
     Route: 050
  1799. METHOTREXATE [Suspect]
     Active Substance: METHOTREXATE
     Dosage: UNK, ADDITIONAL INFORMATION ON DRUG (FREE TEXT): ADALIMUMAB SOLUTION FOR INJECTION, SINGLE DOSE PEN
     Route: 050
  1800. USTEKINUMAB [Concomitant]
     Active Substance: USTEKINUMAB
     Indication: Product used for unknown indication
     Dosage: UNK
     Route: 065
     Dates: start: 20211112, end: 2022
  1801. USTEKINUMAB [Concomitant]
     Active Substance: USTEKINUMAB
     Indication: Product used for unknown indication
     Dosage: UNKNOWN; OTHER
     Route: 050
     Dates: start: 20211112
  1802. USTEKINUMAB [Concomitant]
     Active Substance: USTEKINUMAB
     Dosage: UNK (ADALIMUMAB SOLUTION FOR INJECTION, SINGLE DOSE PEN DOSAGE1: UNIT=NOT AVAILABLE)
     Route: 050
     Dates: start: 20211112, end: 2022
  1803. USTEKINUMAB [Concomitant]
     Active Substance: USTEKINUMAB
     Dosage: PHARMACEUTICAL DOSE FORM (FREE TEXT): 98
     Route: 065
     Dates: start: 20211112, end: 2022
  1804. USTEKINUMAB [Concomitant]
     Active Substance: USTEKINUMAB
     Dosage: UNKNOWN, ADDITIONAL INFORMATION ON DRUG (FREE TEXT): ADALIMUMAB SOLUTION FOR INJECTION, SINGLE DOSE
     Route: 065
     Dates: start: 20211112, end: 2022
  1805. USTEKINUMAB [Concomitant]
     Active Substance: USTEKINUMAB
     Dosage: UNK (ADDITIONAL INFO: ROUTE:OTHER ADALIMUMAB SOLUTION FOR INJECTION, SINGLE DOSE PEN)
     Dates: start: 20211112, end: 2022
  1806. USTEKINUMAB [Concomitant]
     Active Substance: USTEKINUMAB
     Dosage: UNK (ADDITIONAL INFO: ROUTE:OTHER ADALIMUMAB SOLUTION FOR INJECTION, SINGLE DOSE PEN)
     Dates: start: 20211112, end: 2022
  1807. USTEKINUMAB [Concomitant]
     Active Substance: USTEKINUMAB
     Dosage: UNK (ADDITIONAL INFO: ROUTE:OTHER ADALIMUMAB SOLUTION FOR INJECTION, SINGLE DOSE PEN)
     Dates: start: 20211112, end: 2022
  1808. USTEKINUMAB [Concomitant]
     Active Substance: USTEKINUMAB
     Dosage: UNK (ADDITIONAL INFO: ROUTE:OTHER ADALIMUMAB SOLUTION FOR INJECTION, SINGLE DOSE PEN)
     Route: 065
     Dates: start: 20211112, end: 2022
  1809. USTEKINUMAB [Concomitant]
     Active Substance: USTEKINUMAB
     Indication: Product used for unknown indication
     Dosage: UNK; ADDITIONAL INFO: ROUTE:OTHER
     Route: 050
     Dates: start: 20211112, end: 2022
  1810. USTEKINUMAB [Concomitant]
     Active Substance: USTEKINUMAB
     Dosage: UNK; ;
     Route: 050
     Dates: start: 20211112, end: 2022
  1811. USTEKINUMAB [Concomitant]
     Active Substance: USTEKINUMAB
     Dosage: UNK
     Route: 065
     Dates: start: 20211112, end: 2022
  1812. USTEKINUMAB [Concomitant]
     Active Substance: USTEKINUMAB
     Dosage: UNK
     Route: 050
     Dates: start: 20211112, end: 2022
  1813. USTEKINUMAB [Concomitant]
     Active Substance: USTEKINUMAB
     Indication: Product used for unknown indication
     Dosage: UNK
     Dates: start: 20211112, end: 2022
  1814. USTEKINUMAB [Concomitant]
     Active Substance: USTEKINUMAB
     Dosage: UNK
     Route: 065
     Dates: start: 20211112, end: 2022
  1815. USTEKINUMAB [Concomitant]
     Active Substance: USTEKINUMAB
     Dosage: UNK
     Route: 065
     Dates: start: 20211112, end: 2022
  1816. HYRIMOZ [Concomitant]
     Active Substance: ADALIMUMAB-ADAZ
     Indication: Crohn^s disease
     Dosage: UNK, SENSO-READ PEN (ADALIMUMAB SOLUTION FOR INJECTION, SINGLE DOSE PEN)
     Route: 065
  1817. HYRIMOZ [Concomitant]
     Active Substance: ADALIMUMAB-ADAZ
     Dosage: UNK, SENSO-READ PEN; PHARMACEUTICAL DOSE FORM: HYRIMOZ SENSO-READ PEN
  1818. HYRIMOZ [Concomitant]
     Active Substance: ADALIMUMAB-ADAZ
     Dosage: UNK, SENSO-READ PEN/ADDITIONAL INFORMATION ON DRUG (FREE TEXT): HYRIMOZ SENSO-READ PEN/ HYRIMOZ PRE-
     Route: 050
  1819. HYRIMOZ [Concomitant]
     Active Substance: ADALIMUMAB-ADAZ
     Dosage: UNK, SENSO-READ PEN; ; (ADALIMUMAB SOLUTION FOR INJECTION, SINGLE DOSE PEN)
     Route: 050
  1820. HYRIMOZ [Concomitant]
     Active Substance: ADALIMUMAB-ADAZ
     Dosage: UNK, SENSO-READ PEN/ADDITIONAL INFORMATION ON DRUG (FREE TEXT): HYRIMOZ SENSO-READ PEN/ HYRIMOZ PRE-
     Route: 050
  1821. HYRIMOZ [Concomitant]
     Active Substance: ADALIMUMAB-ADAZ
     Dosage: UNK; ADDITIONAL INFO: ROUTE:OTHERHYRIMOZ SENSO-READ PEN
     Route: 050
  1822. HYRIMOZ [Concomitant]
     Active Substance: ADALIMUMAB-ADAZ
     Dosage: UNK, SENSO-READ PEN; ;
     Route: 065
  1823. HYRIMOZ [Concomitant]
     Active Substance: ADALIMUMAB-ADAZ
     Dosage: UNK, SENSO-READ PEN; ;
     Route: 065
  1824. HYRIMOZ [Concomitant]
     Active Substance: ADALIMUMAB-ADAZ
     Dosage: UNK, SENSO-READ PEN
     Route: 050
  1825. HYRIMOZ [Concomitant]
     Active Substance: ADALIMUMAB-ADAZ
     Dosage: UNK, SENSO-READ PEN (ADALIMUMAB SOLUTION FOR INJECTION, SINGLE DOSE PEN)
     Route: 050
  1826. HYRIMOZ [Concomitant]
     Active Substance: ADALIMUMAB-ADAZ
     Dosage: UNK (SENSO-READ PEN) (ADALIMUMAB SOLUTION FOR INJECTION, SINGLE DOSE PEN)
     Route: 065
  1827. HYRIMOZ [Concomitant]
     Active Substance: ADALIMUMAB-ADAZ
     Dosage: UNK (SENSO-READ PEN)
     Route: 065
  1828. HYRIMOZ [Concomitant]
     Active Substance: ADALIMUMAB-ADAZ
     Dosage: UNK, SENSO-READ PEN; ;
     Route: 050
  1829. HYRIMOZ [Concomitant]
     Active Substance: ADALIMUMAB-ADAZ
     Dosage: UNK, SENSO-READ PEN; ;
     Route: 050
  1830. HYRIMOZ [Concomitant]
     Active Substance: ADALIMUMAB-ADAZ
     Dosage: UNKNOWN, SENSO-READ PEN HYRIMOZ SENSO-READ PEN/ HYRIMOZ PRE-FILLED SYRINGE+X100L (ADALIMUMAB).; ;
     Route: 050
  1831. HYRIMOZ [Concomitant]
     Active Substance: ADALIMUMAB-ADAZ
     Dosage: ADALIMUMAB SOLUTION FOR INJECTION, SINGLE DOSE PEN; ;
     Route: 050
  1832. HYRIMOZ [Concomitant]
     Active Substance: ADALIMUMAB-ADAZ
     Dosage: UNK (SENSO-READ PEN)
     Route: 050
  1833. HYRIMOZ [Concomitant]
     Active Substance: ADALIMUMAB-ADAZ
     Dosage: UNK (SENSO-READ PEN)
     Route: 050
  1834. HYRIMOZ [Concomitant]
     Active Substance: ADALIMUMAB-ADAZ
     Dosage: ADALIMUMAB SOLUTION FOR INJECTION, SINGLE DOSE PEN; ;
     Route: 050
  1835. HYRIMOZ [Concomitant]
     Active Substance: ADALIMUMAB-ADAZ
     Dosage: ADALIMUMAB SOLUTION FOR INJECTION, SINGLE DOSE PEN; ;
     Route: 050
  1836. HYRIMOZ [Concomitant]
     Active Substance: ADALIMUMAB-ADAZ
     Dosage: ADALIMUMAB SOLUTION FOR INJECTION, SINGLE DOSE PEN; ;
     Route: 050
  1837. HYRIMOZ [Concomitant]
     Active Substance: ADALIMUMAB-ADAZ
     Dosage: UNK (SENSO-READ PEN)
     Route: 050
  1838. HYRIMOZ [Concomitant]
     Active Substance: ADALIMUMAB-ADAZ
     Dosage: UNK (SENSO-READ PEN)
     Route: 050
  1839. HYRIMOZ [Concomitant]
     Active Substance: ADALIMUMAB-ADAZ
     Dosage: UNK (SENSO-READ PEN)
     Route: 050
  1840. HYRIMOZ [Concomitant]
     Active Substance: ADALIMUMAB-ADAZ
     Dosage: HYRIMOZ SENSO-READ PEN/ HYRIMOZ PRE-FILLED SYRINGE+X100L (ADALIMUMAB) (ADALIMUMAB SOLUTION FOR INJEC
     Route: 050
  1841. HYRIMOZ [Concomitant]
     Active Substance: ADALIMUMAB-ADAZ
     Dosage: UNK (SENSO-READ PEN) (ADALIMUMAB SOLUTION FOR INJECTION, SINGLE DOSE PEN)
     Route: 050
  1842. HYRIMOZ [Concomitant]
     Active Substance: ADALIMUMAB-ADAZ
     Dosage: HYRIMOZ SENSO-READ PEN/ HYRIMOZ PRE-FILLED SYRINGE+X100L (ADALIMUMAB); ADDITIONAL INFORMATION ON DRU
     Route: 050
  1843. HYRIMOZ [Concomitant]
     Active Substance: ADALIMUMAB-ADAZ
     Dosage: ADALIMUMAB SOLUTION FOR INJECTION, SINGLE DOSE PEN
  1844. HYRIMOZ [Concomitant]
     Active Substance: ADALIMUMAB-ADAZ
     Dosage: ADALIMUMAB SOLUTION FOR INJECTION, SINGLE DOSE PEN
  1845. HYRIMOZ [Concomitant]
     Active Substance: ADALIMUMAB-ADAZ
     Dosage: UNK
  1846. HYRIMOZ [Concomitant]
     Active Substance: ADALIMUMAB-ADAZ
     Dosage: UNK, SENSO-READ PEN
  1847. HYRIMOZ [Concomitant]
     Active Substance: ADALIMUMAB-ADAZ
     Dosage: HYRIMOZ SENSO-READ PEN/ HYRIMOZ PRE-FILLED SYRINGE+X100L (ADALIMUMAB)
  1848. HYRIMOZ [Concomitant]
     Active Substance: ADALIMUMAB-ADAZ
     Dosage: UNK (SENSO-READ PEN)
  1849. HYRIMOZ [Concomitant]
     Active Substance: ADALIMUMAB-ADAZ
     Dosage: UNK (SENSO-READ PEN)
  1850. HYRIMOZ [Concomitant]
     Active Substance: ADALIMUMAB-ADAZ
     Dosage: UNK (SENSO-READ PEN)
  1851. HYRIMOZ [Concomitant]
     Active Substance: ADALIMUMAB-ADAZ
     Dosage: UNK (SENSO-READ PEN)
  1852. HYRIMOZ [Concomitant]
     Active Substance: ADALIMUMAB-ADAZ
     Indication: Product used for unknown indication
     Dosage: UNK, SENSO-READ PEN
     Route: 065
  1853. HYRIMOZ [Concomitant]
     Active Substance: ADALIMUMAB-ADAZ
     Dosage: UNK, SENSO-READ PEN, PHARMACEUTICAL DOSE FORM (FREE TEXT): 98
     Route: 065
  1854. HYRIMOZ [Concomitant]
     Active Substance: ADALIMUMAB-ADAZ
     Indication: Crohn^s disease
     Dosage: UNK, SENSO-READ PEN, ADDITIONAL INFORMATION ON DRUG (FREE TEXT): HYRIMOZ SENSO-READ PEN/ HYRIMOZ PRE
     Route: 050
  1855. HYRIMOZ [Concomitant]
     Active Substance: ADALIMUMAB-ADAZ
     Dosage: UNK, SENSO-READ PEN, ADDITIONAL INFORMATION ON DRUG (FREE TEXT): HYRIMOZ SENSO-READ PEN/ HYRIMOZ PRE
     Route: 050
  1856. HYRIMOZ [Concomitant]
     Active Substance: ADALIMUMAB-ADAZ
     Dosage: UNK, SENSO-READ PEN, ADDITIONAL INFORMATION ON DRUG (FREE TEXT): HYRIMOZ SENSO-READ PEN/ HYRIMOZ PRE
     Route: 065
  1857. HYRIMOZ [Concomitant]
     Active Substance: ADALIMUMAB-ADAZ
     Dosage: UNK, SENSO-READ PEN, ADDITIONAL INFORMATION ON DRUG (FREE TEXT): HYRIMOZ SENSO-READ PEN/ HYRIMOZ PRE
     Route: 065
  1858. HYRIMOZ [Concomitant]
     Active Substance: ADALIMUMAB-ADAZ
     Dosage: UNK, SENSO-READ PEN, ADDITIONAL INFORMATION ON DRUG (FREE TEXT): HYRIMOZ SENSO-READ PEN/ HYRIMOZ PRE
     Route: 050
  1859. HYRIMOZ [Concomitant]
     Active Substance: ADALIMUMAB-ADAZ
     Dosage: UNK, SENSO-READ PEN/HYRIMOZ PRE-FILLED SYRINGE PLUS X100L (ADALIMUMAB)
     Route: 050
  1860. HYRIMOZ [Concomitant]
     Active Substance: ADALIMUMAB-ADAZ
     Dosage: HYRIMOZ SENSO-READ PEN/ HYRIMOZ PRE-FILLED SYRINGE+X100L (ADALIMUMAB), ADDITIONAL INFORMATION ON DRU
     Route: 050

REACTIONS (19)
  - Crohn^s disease [Unknown]
  - Crohn^s disease [Unknown]
  - Abdominal adhesions [Unknown]
  - Small intestinal obstruction [Unknown]
  - Small intestinal obstruction [Unknown]
  - Nerve injury [Unknown]
  - Frequent bowel movements [Unknown]
  - Quality of life decreased [Unknown]
  - Quality of life decreased [Unknown]
  - Impaired quality of life [Unknown]
  - Impaired quality of life [Unknown]
  - Incontinence [Unknown]
  - Drug specific antibody [Unknown]
  - Drug specific antibody present [Unknown]
  - Pancreatitis [Unknown]
  - Pneumonia [Unknown]
  - Gastrointestinal microorganism overgrowth [Unknown]
  - Drug ineffective [Unknown]
  - Drug ineffective [Unknown]

NARRATIVE: CASE EVENT DATE: 20220101
